FAERS Safety Report 18724586 (Version 11)
Quarter: 2024Q4

REPORT INFORMATION
  Report Type: Other
  Country: GB (occurrence: GB)
  Receive Date: 20210111
  Receipt Date: 20241111
  Transmission Date: 20250114
  Serious: Yes (Other)
  Sender: STRIDES
  Company Number: None

PATIENT
  Age: 72 Year
  Sex: Female
  Weight: 62 kg

DRUGS (1162)
  1. PREDNISOLONE [Suspect]
     Active Substance: PREDNISOLONE
     Indication: Diffuse large B-cell lymphoma
     Dosage: UNK
     Route: 048
     Dates: start: 20201118, end: 20201122
  2. PREDNISOLONE [Suspect]
     Active Substance: PREDNISOLONE
     Indication: Diffuse large B-cell lymphoma
     Dosage: UNK
     Route: 065
     Dates: start: 20201118, end: 20201122
  3. PREDNISOLONE [Suspect]
     Active Substance: PREDNISOLONE
     Indication: Diffuse large B-cell lymphoma
     Dosage: 100 MILLIGRAM, (DATE OF MOST RECENT DOSE PRIOR TO FIRST EPISODE OF NEUTROPENIA 24/NOV/2020.DATE OF M
     Route: 048
     Dates: start: 20201124
  4. PREDNISOLONE [Suspect]
     Active Substance: PREDNISOLONE
     Indication: Diffuse large B-cell lymphoma
     Dosage: 100 MILLIGRAM, TOTAL INFUSION (DATE OF MOST RECENT DOSE PRIOR TO FIRST EPISODE OF NEUTROPENIA 24/NOV
     Route: 065
     Dates: start: 20201124
  5. PREDNISOLONE [Suspect]
     Active Substance: PREDNISOLONE
     Indication: Product used for unknown indication
     Dosage: 100 MILLIGRAM (DATE OF MOST RECENT DOSE PRIOR TO FIRST EPISODE OF NEUTROPENIA 24/NOV/2020.DATE OF MO
     Route: 048
     Dates: start: 20201124
  6. PREDNISOLONE [Suspect]
     Active Substance: PREDNISOLONE
     Indication: Product used for unknown indication
     Dosage: UNK (UNK ROUTE OF ADMIN (FREE TEXT): UNKNOWN ROUTE )
     Route: 048
     Dates: start: 20201118, end: 20201122
  7. PREDNISOLONE [Suspect]
     Active Substance: PREDNISOLONE
     Dosage: UNK (UNK ROUTE OF ADMIN (FREE TEXT): UNKNOWN ROUTE )
     Route: 065
  8. PREDNISOLONE [Suspect]
     Active Substance: PREDNISOLONE
     Dosage: UNK (UNK ROUTE OF ADMIN (FREE TEXT): UNKNOWN ROUTE )
     Route: 065
  9. PREDNISOLONE [Suspect]
     Active Substance: PREDNISOLONE
     Dosage: UNK
     Route: 065
  10. PREDNISOLONE [Suspect]
     Active Substance: PREDNISOLONE
     Dosage: UNK (UNK ROUTE OF ADMIN (FREE TEXT): UNKNOWN ROUTE )
     Route: 065
  11. PREDNISOLONE [Suspect]
     Active Substance: PREDNISOLONE
     Dosage: UNK
     Route: 065
  12. PREDNISOLONE [Suspect]
     Active Substance: PREDNISOLONE
     Dosage: UNK
     Route: 065
  13. PREDNISOLONE [Suspect]
     Active Substance: PREDNISOLONE
     Dosage: 100 MILLIGRAM/SQ. METER
     Route: 048
     Dates: start: 20201128
  14. PREDNISOLONE [Suspect]
     Active Substance: PREDNISOLONE
     Dosage: 100 MILLIGRAM/SQ. METER
     Route: 048
     Dates: start: 20201215
  15. PREDNISOLONE [Suspect]
     Active Substance: PREDNISOLONE
     Dosage: 100 MILLIGRAM
     Route: 048
     Dates: start: 20210109
  16. PREDNISOLONE [Suspect]
     Active Substance: PREDNISOLONE
     Dosage: 100 MILLIGRAM/SQ. METER
     Route: 048
     Dates: start: 20210218, end: 20210218
  17. PREDNISOLONE [Suspect]
     Active Substance: PREDNISOLONE
     Dosage: UNK
     Route: 065
     Dates: start: 20210220
  18. PREDNISOLONE [Suspect]
     Active Substance: PREDNISOLONE
     Dosage: 100 MILLIGRAM
     Route: 048
     Dates: start: 20210309
  19. DOXORUBICIN [Suspect]
     Active Substance: DOXORUBICIN
     Indication: Diffuse large B-cell lymphoma
     Dosage: UNK (INFUSION)
     Route: 042
  20. DOXORUBICIN [Suspect]
     Active Substance: DOXORUBICIN
     Dosage: UNK (INFUSION)
     Route: 042
  21. DOXORUBICIN [Suspect]
     Active Substance: DOXORUBICIN
     Dosage: UNK (INFUSION)
     Route: 042
  22. DOXORUBICIN [Suspect]
     Active Substance: DOXORUBICIN
     Dosage: UNK (INFUSION)
     Route: 042
  23. DOXORUBICIN [Suspect]
     Active Substance: DOXORUBICIN
     Dosage: 50 MILLIGRAM/SQ. METER PER 3 WEEKS, INFUSION ( DATE OF MOST RECENT DOSE PRIOR TO FIRST EPISODE OF NE
     Route: 042
     Dates: start: 20201124
  24. DOXORUBICIN [Suspect]
     Active Substance: DOXORUBICIN
     Dosage: 80 MILLIGRAM/SQ. METER, CYCLICAL PER 3WEEK, INFUSION (ON DAY 1 OF EACH 21-DAY CYCLE DATE OF MOST REC
     Route: 042
     Dates: start: 20201124
  25. DOXORUBICIN [Suspect]
     Active Substance: DOXORUBICIN
     Dosage: UNK (80 MG/M2, EVERY 3 WEEKS, ON DAY 1 OF EACH 21 DAY CYCLE, DATE OF MOST RECENT DOSE PRIOR TO FIRST
     Route: 050
     Dates: start: 20201124
  26. DOXORUBICIN [Suspect]
     Active Substance: DOXORUBICIN
     Dosage: UNK (80 MG/M2, EVERY 3 WEEKS, ON DAY 1 OF EACH 21 DAY CYCLE, DATE OF MOST RECENT DOSE PRIOR TO FIRST
     Route: 050
     Dates: start: 20201124
  27. DOXORUBICIN [Suspect]
     Active Substance: DOXORUBICIN
     Dosage: UNK
     Route: 042
  28. DOXORUBICIN [Suspect]
     Active Substance: DOXORUBICIN
     Dosage: UNK
     Route: 042
  29. DOXORUBICIN [Suspect]
     Active Substance: DOXORUBICIN
     Dosage: UNK
     Route: 042
  30. DOXORUBICIN [Suspect]
     Active Substance: DOXORUBICIN
     Dosage: UNK
     Route: 042
  31. DOXORUBICIN [Suspect]
     Active Substance: DOXORUBICIN
     Dosage: UNK
     Route: 042
  32. DOXORUBICIN [Suspect]
     Active Substance: DOXORUBICIN
     Dosage: UNK, DOSAGE FORM: INFUSION
     Route: 042
  33. DOXORUBICIN [Suspect]
     Active Substance: DOXORUBICIN
     Dosage: UNK, DOSAGE FORM: INFUSION
     Route: 042
  34. DOXORUBICIN [Suspect]
     Active Substance: DOXORUBICIN
     Dosage: UNK, DOSAGE FORM: INFUSION
     Route: 042
  35. DOXORUBICIN [Suspect]
     Active Substance: DOXORUBICIN
     Dosage: UNK, DOSAGE FORM: INFUSION
     Route: 042
  36. DOXORUBICIN [Suspect]
     Active Substance: DOXORUBICIN
     Dosage: UNK, DOSAGE FORM: INFUSION
     Route: 042
  37. DOXORUBICIN [Suspect]
     Active Substance: DOXORUBICIN
     Dosage: UNK, DOSAGE FORM: INFUSION
     Route: 042
  38. DOXORUBICIN [Suspect]
     Active Substance: DOXORUBICIN
     Dosage: 50 MILLIGRAM
     Route: 065
     Dates: start: 20201124
  39. DOXORUBICIN [Suspect]
     Active Substance: DOXORUBICIN
     Dosage: UNK
     Route: 065
     Dates: start: 20201124
  40. DOXORUBICIN [Suspect]
     Active Substance: DOXORUBICIN
     Dosage: UNK
     Route: 065
  41. DOXORUBICIN [Suspect]
     Active Substance: DOXORUBICIN
     Dosage: UNK
     Route: 065
  42. DOXORUBICIN [Suspect]
     Active Substance: DOXORUBICIN
     Dosage: UNK
     Route: 065
  43. DOXORUBICIN [Suspect]
     Active Substance: DOXORUBICIN
     Dosage: UNK
     Route: 065
  44. DOXORUBICIN [Suspect]
     Active Substance: DOXORUBICIN
     Dosage: UNK
     Route: 065
  45. DOXORUBICIN [Suspect]
     Active Substance: DOXORUBICIN
     Dosage: UNK (INFUSION)
     Route: 042
  46. VALGANCICLOVIR HYDROCHLORIDE [Suspect]
     Active Substance: VALGANCICLOVIR HYDROCHLORIDE
     Indication: Cytomegalovirus viraemia
     Dosage: 900 MILLIGRAM/SQ. METER, BID
     Route: 065
     Dates: start: 20210426, end: 20210513
  47. VALGANCICLOVIR HYDROCHLORIDE [Suspect]
     Active Substance: VALGANCICLOVIR HYDROCHLORIDE
     Indication: Cytomegalovirus viraemia
     Dosage: UNK
     Route: 065
     Dates: start: 20210513
  48. VALGANCICLOVIR HYDROCHLORIDE [Suspect]
     Active Substance: VALGANCICLOVIR HYDROCHLORIDE
     Indication: Cytomegalovirus viraemia
     Dosage: UNK
     Route: 065
     Dates: end: 20210513
  49. VALGANCICLOVIR HYDROCHLORIDE [Suspect]
     Active Substance: VALGANCICLOVIR HYDROCHLORIDE
     Indication: Cytomegalovirus viraemia
     Dosage: 21 MG/M2
     Route: 065
     Dates: start: 20210426, end: 20210513
  50. VALGANCICLOVIR HYDROCHLORIDE [Suspect]
     Active Substance: VALGANCICLOVIR HYDROCHLORIDE
     Dosage: UNK
     Route: 065
     Dates: end: 20210513
  51. CYCLOPHOSPHAMIDE [Suspect]
     Active Substance: CYCLOPHOSPHAMIDE
     Indication: Diffuse large B-cell lymphoma
     Dosage: UNK
     Route: 042
  52. CYCLOPHOSPHAMIDE [Suspect]
     Active Substance: CYCLOPHOSPHAMIDE
     Indication: Diffuse large B-cell lymphoma
     Dosage: UNK
     Route: 042
  53. CYCLOPHOSPHAMIDE [Suspect]
     Active Substance: CYCLOPHOSPHAMIDE
     Indication: Diffuse large B-cell lymphoma
     Dosage: UNK
     Route: 042
  54. CYCLOPHOSPHAMIDE [Suspect]
     Active Substance: CYCLOPHOSPHAMIDE
     Dosage: 1260 MILLIGRAM/SQ. METER, 3XW (TOTAL VOLUME PRIOR AE 313 MLDATE OF MOST RECENT DOSE PRIOR TO FIRST
     Route: 042
     Dates: start: 20201124
  55. CYCLOPHOSPHAMIDE [Suspect]
     Active Substance: CYCLOPHOSPHAMIDE
     Dosage: 1260 MILLIGRAM/SQ. METER, EVERY 3 WEEKS, (1260 MILLIGRAM/SQ. METER PER 3 WEEK (TOTAL VOLUME PRIOR AE
     Route: 042
     Dates: start: 20201124
  56. CYCLOPHOSPHAMIDE [Suspect]
     Active Substance: CYCLOPHOSPHAMIDE
     Dosage: 750 MILLIGRAM/SQ. METER (750 MILLIGRAM/SQ. METER PER 3 WEEKS INTERVAL (TOTAL VOLUME PRIOR AE 313 ML
     Route: 042
     Dates: start: 20201124
  57. CYCLOPHOSPHAMIDE [Suspect]
     Active Substance: CYCLOPHOSPHAMIDE
     Dosage: UNK
     Route: 065
  58. CYCLOPHOSPHAMIDE [Suspect]
     Active Substance: CYCLOPHOSPHAMIDE
     Dosage: UNK
     Route: 065
  59. CYCLOPHOSPHAMIDE [Suspect]
     Active Substance: CYCLOPHOSPHAMIDE
     Dosage: UNK
     Route: 065
  60. CYCLOPHOSPHAMIDE [Suspect]
     Active Substance: CYCLOPHOSPHAMIDE
     Dosage: UNK
     Route: 065
  61. CYCLOPHOSPHAMIDE [Suspect]
     Active Substance: CYCLOPHOSPHAMIDE
     Dosage: UNK
     Route: 065
  62. CYCLOPHOSPHAMIDE [Suspect]
     Active Substance: CYCLOPHOSPHAMIDE
     Dosage: UNK
     Route: 065
  63. CYCLOPHOSPHAMIDE [Suspect]
     Active Substance: CYCLOPHOSPHAMIDE
     Dosage: UNK
     Route: 065
     Dates: start: 20201124
  64. CYCLOPHOSPHAMIDE [Suspect]
     Active Substance: CYCLOPHOSPHAMIDE
     Dosage: UNK
     Route: 065
  65. CYCLOPHOSPHAMIDE [Suspect]
     Active Substance: CYCLOPHOSPHAMIDE
     Dosage: 1260 MG/M2, EVERY 3 WEEK, TOTAL VOLUME PRIOR AE 313 ML, DATE OF MOSTE RECENT DOSE PRIOR TO FIRST EPI
     Route: 042
     Dates: start: 20201124
  66. CYCLOPHOSPHAMIDE [Suspect]
     Active Substance: CYCLOPHOSPHAMIDE
     Dosage: 1260 MILLIGRAM/SQ. METER, EVERY 3 WEEKS, (1260 MILLIGRAM/SQ. METER PER 3 WEEK (TOTAL VOLUME PRIOR AE
     Route: 042
     Dates: start: 20201124
  67. CYCLOPHOSPHAMIDE [Suspect]
     Active Substance: CYCLOPHOSPHAMIDE
     Dosage: UNK
     Route: 042
  68. CYCLOPHOSPHAMIDE [Suspect]
     Active Substance: CYCLOPHOSPHAMIDE
     Dosage: UNK
     Route: 042
  69. CYCLOPHOSPHAMIDE [Suspect]
     Active Substance: CYCLOPHOSPHAMIDE
     Dosage: UNK
     Route: 042
  70. CYCLOPHOSPHAMIDE [Suspect]
     Active Substance: CYCLOPHOSPHAMIDE
     Dosage: UNK
     Route: 042
  71. CYCLOPHOSPHAMIDE [Suspect]
     Active Substance: CYCLOPHOSPHAMIDE
     Dosage: UNK (DOSAGE FORM: SOLUTION FOR INFUSION)
     Route: 065
  72. CYCLOPHOSPHAMIDE [Suspect]
     Active Substance: CYCLOPHOSPHAMIDE
     Dosage: UNK
     Route: 065
  73. CYCLOPHOSPHAMIDE [Suspect]
     Active Substance: CYCLOPHOSPHAMIDE
     Dosage: UNK
     Route: 042
  74. CYCLOPHOSPHAMIDE [Suspect]
     Active Substance: CYCLOPHOSPHAMIDE
     Dosage: UNK
     Route: 042
  75. CYCLOPHOSPHAMIDE [Suspect]
     Active Substance: CYCLOPHOSPHAMIDE
     Dosage: UNK
     Route: 042
  76. CYCLOPHOSPHAMIDE [Suspect]
     Active Substance: CYCLOPHOSPHAMIDE
     Dosage: UNK
     Route: 042
  77. CYCLOPHOSPHAMIDE [Suspect]
     Active Substance: CYCLOPHOSPHAMIDE
     Dosage: UNK (DOSAGE FORM: SOLUTION FOR INFUSION)
     Route: 042
  78. RITUXIMAB [Suspect]
     Active Substance: RITUXIMAB
     Indication: Diffuse large B-cell lymphoma
     Dosage: 375 MILLIGRAM/SQ. METER IN 3 WEEK INTERVAL ( TOTAL VOLUME PRIOR AE 560 ML  DATE OF MOST RECENT DOSE
     Route: 041
     Dates: start: 20201124
  79. RITUXIMAB [Suspect]
     Active Substance: RITUXIMAB
     Indication: Diffuse large B-cell lymphoma
     Dosage: 9 MG/M2, TOTAL VOLUME PRIOR AE 560 MLDATE OF MOST RECENT DOSE PRIOR TO FIRST EPISODE OF NEUTROPENIA
     Route: 065
     Dates: start: 20201124
  80. RITUXIMAB [Suspect]
     Active Substance: RITUXIMAB
     Dosage: 600 MILLIGRAM/SQ. METER, TOTAL VOLUME PRIOR AE 560 MLDATE OF MOST RECENT DOSE PRIOR TO FIRST EPISODE
     Route: 042
     Dates: start: 20201124
  81. RITUXIMAB [Suspect]
     Active Substance: RITUXIMAB
     Dosage: 3 MILLILITER, 3XW
     Route: 065
     Dates: start: 20201221, end: 20201221
  82. RITUXIMAB [Suspect]
     Active Substance: RITUXIMAB
     Dosage: 600 MILLIGRAM, 3XW
     Route: 065
     Dates: start: 20210105, end: 20210216
  83. RITUXIMAB [Suspect]
     Active Substance: RITUXIMAB
     Dosage: 3 MILLILITER, 3XW
     Route: 065
     Dates: start: 20210216, end: 20210216
  84. RITUXIMAB [Suspect]
     Active Substance: RITUXIMAB
     Dosage: UNK
     Route: 065
  85. RITUXIMAB [Suspect]
     Active Substance: RITUXIMAB
     Dosage: UNK
     Route: 065
  86. RITUXIMAB [Suspect]
     Active Substance: RITUXIMAB
     Dosage: UNK
     Route: 065
  87. RITUXIMAB [Suspect]
     Active Substance: RITUXIMAB
     Dosage: UNK
     Route: 065
  88. RITUXIMAB [Suspect]
     Active Substance: RITUXIMAB
     Dosage: UNK
     Route: 065
  89. RITUXIMAB [Suspect]
     Active Substance: RITUXIMAB
     Dosage: UNK
     Route: 065
  90. RITUXIMAB [Suspect]
     Active Substance: RITUXIMAB
     Dosage: 3 MILLILITER, 3XW
     Route: 065
     Dates: start: 20210216, end: 20210216
  91. RITUXIMAB [Suspect]
     Active Substance: RITUXIMAB
     Dosage: 9 MILLIGRAM/SQ. METER (9 MG/M2, TOTAL VOLUME PRIOR AE 560 MLDATE OF MOST RECENT DOSE PRIOR TO FIRST
     Route: 065
     Dates: start: 20201124
  92. RITUXIMAB [Suspect]
     Active Substance: RITUXIMAB
     Dosage: 600 MILLIGRAM, 3XW (600 MG, TIW)
     Route: 065
     Dates: end: 20210216
  93. RITUXIMAB [Suspect]
     Active Substance: RITUXIMAB
     Dosage: 3 MILLILITER, 3XW (3 ML, TIW)
     Route: 065
     Dates: start: 20210216, end: 20210216
  94. RITUXIMAB [Suspect]
     Active Substance: RITUXIMAB
     Dosage: 9 MILLIGRAM/SQ. METER (9 MG/M2, TOTAL VOLUME PRIOR AE 560 MLDATE OF MOST RECENT DOSE PRIOR TO FIRST
     Route: 065
     Dates: start: 20201124
  95. RITUXIMAB [Suspect]
     Active Substance: RITUXIMAB
     Dosage: 3 MILLILITER, 3XW (3 ML, TIW)
     Route: 065
     Dates: start: 20210216, end: 20210216
  96. RITUXIMAB [Suspect]
     Active Substance: RITUXIMAB
     Dosage: 3 MILLILITER, 3XW (3 ML, TIW, TIME INTERVAL: 0.33 WK)
     Route: 065
     Dates: start: 20201221, end: 20201221
  97. RITUXIMAB [Suspect]
     Active Substance: RITUXIMAB
     Dosage: UNK
     Route: 065
  98. RITUXIMAB [Suspect]
     Active Substance: RITUXIMAB
     Dosage: UNK
     Route: 065
  99. RITUXIMAB [Suspect]
     Active Substance: RITUXIMAB
     Dosage: UNK
     Route: 065
  100. RITUXIMAB [Suspect]
     Active Substance: RITUXIMAB
     Dosage: UNK
     Route: 065
  101. RITUXIMAB [Suspect]
     Active Substance: RITUXIMAB
     Dosage: 375 MILLIGRAM/SQ. METER
     Route: 042
  102. RITUXIMAB [Suspect]
     Active Substance: RITUXIMAB
     Dosage: UNK
     Route: 065
  103. RITUXIMAB [Suspect]
     Active Substance: RITUXIMAB
     Dosage: 21 MILLIGRAM/SQ. METER
     Route: 065
  104. RITUXIMAB [Suspect]
     Active Substance: RITUXIMAB
     Indication: Diffuse large B-cell lymphoma
     Dosage: 375 MILLIGRAM/SQ. METER
     Route: 065
  105. RITUXIMAB [Suspect]
     Active Substance: RITUXIMAB
     Indication: Product used for unknown indication
     Dosage: UNK
     Route: 050
  106. RITUXIMAB [Suspect]
     Active Substance: RITUXIMAB
     Dosage: 375 MILLIGRAM/SQ. METER
     Route: 065
  107. RITUXIMAB [Suspect]
     Active Substance: RITUXIMAB
     Dosage: UNK
     Route: 065
  108. RITUXIMAB [Suspect]
     Active Substance: RITUXIMAB
     Dosage: UNK
     Route: 065
  109. RITUXIMAB [Suspect]
     Active Substance: RITUXIMAB
     Dosage: UNK
     Route: 065
  110. RITUXIMAB [Suspect]
     Active Substance: RITUXIMAB
     Dosage: 100 MG
     Route: 050
     Dates: start: 20210216, end: 20210216
  111. RITUXIMAB [Suspect]
     Active Substance: RITUXIMAB
     Dosage: 600 MILLIGRAM/SQ. METER, EVERY 3 WEEKS (TOTAL VOLUME PRIOR AE 560 MLDATE OF MOST RECENT DOSE PRIOR T
     Route: 042
     Dates: start: 20201124
  112. RITUXIMAB [Suspect]
     Active Substance: RITUXIMAB
     Dosage: 9 MILLIMETRE PER WEEK (3 ML, TIW) (CUMULATIVE DOSE TO FIRST REACTION: 34.714287 ML)
     Route: 065
     Dates: start: 20201221, end: 20201221
  113. RITUXIMAB [Suspect]
     Active Substance: RITUXIMAB
     Dosage: 3 ML (DURATION: 1 DAY; TIME INTERVAL: 0.33 WK )
     Route: 050
     Dates: start: 20201221, end: 20201221
  114. RITUXIMAB [Suspect]
     Active Substance: RITUXIMAB
     Dosage: 1800 MILLIGRAM/WEEK (600 MG, TIW) (CUMULATIVE DOSE TO FIRST REACTION:10800.0 MG)
     Route: 065
     Dates: start: 20210105, end: 20210216
  115. RITUXIMAB [Suspect]
     Active Substance: RITUXIMAB
     Dosage: 9 MILLIMETRE PER WEEK (3 ML, TIW) (CUMULATIVE DOSE TO FIRST REACTION: 108.0 ML)
     Route: 042
     Dates: start: 20210216, end: 20210216
  116. RITUXIMAB [Suspect]
     Active Substance: RITUXIMAB
     Dosage: 3 ML (DURATION: 1 DAY; TIME INTERVAL: 0.33 WK )
     Route: 050
     Dates: start: 20210216, end: 20210216
  117. RITUXIMAB [Suspect]
     Active Substance: RITUXIMAB
     Dosage: UNK (9 MG/M2, TOTAL VOLUME PRIOR AE 560 MLDATE OF MOST RECENT DOSE PRIOR TO FIRST EPISODE OF NEUTROP
     Route: 050
     Dates: start: 20201124
  118. RITUXIMAB [Suspect]
     Active Substance: RITUXIMAB
     Dosage: 600 MILLIGRAM, TIW
     Route: 042
     Dates: start: 20210105, end: 20210216
  119. RITUXIMAB [Suspect]
     Active Substance: RITUXIMAB
     Dosage: 600 MILLIGRAM, TIW
     Route: 042
     Dates: start: 20210105, end: 20210216
  120. RITUXIMAB [Suspect]
     Active Substance: RITUXIMAB
     Dosage: 3 ML, TIW, TIME INTERVAL: 0.33 WK
     Route: 042
     Dates: start: 20201221, end: 20201221
  121. RITUXIMAB [Suspect]
     Active Substance: RITUXIMAB
     Dosage: UNK (9 MG/M2, TOTAL VOLUME PRIOR AE 560 MLDATE OF MOST RECENT DOSE PRIOR TO FIRST EPISODE OF NEUTROP
     Route: 065
     Dates: start: 20201124
  122. RITUXIMAB [Suspect]
     Active Substance: RITUXIMAB
     Dosage: UNK
     Route: 065
  123. RITUXIMAB [Suspect]
     Active Substance: RITUXIMAB
     Dosage: UNK
     Route: 065
  124. RITUXIMAB [Suspect]
     Active Substance: RITUXIMAB
     Dosage: UNK
     Route: 065
  125. RITUXIMAB [Suspect]
     Active Substance: RITUXIMAB
     Dosage: UNK
     Route: 065
  126. RITUXIMAB [Suspect]
     Active Substance: RITUXIMAB
     Dosage: UNK
     Route: 065
  127. RITUXIMAB [Suspect]
     Active Substance: RITUXIMAB
     Dosage: UNK
     Route: 065
  128. RITUXIMAB [Suspect]
     Active Substance: RITUXIMAB
     Dosage: 2.5 MILLIGRAM, EVERY 3 WEEKS
     Route: 065
  129. RITUXIMAB [Suspect]
     Active Substance: RITUXIMAB
     Dosage: 1000 MILLIGRAM
     Route: 065
     Dates: start: 20201215
  130. RITUXIMAB [Suspect]
     Active Substance: RITUXIMAB
     Dosage: 1000 MILLIGRAM
     Route: 065
     Dates: start: 20210302
  131. RITUXIMAB [Suspect]
     Active Substance: RITUXIMAB
     Dosage: 20 MILLIGRAM
     Route: 065
     Dates: start: 20210209
  132. RITUXIMAB [Suspect]
     Active Substance: RITUXIMAB
     Dosage: 100 MILLIGRAM
     Route: 065
     Dates: start: 20210126
  133. RITUXIMAB [Suspect]
     Active Substance: RITUXIMAB
     Dosage: UNK
     Route: 065
  134. RITUXIMAB [Suspect]
     Active Substance: RITUXIMAB
     Dosage: UNK
     Route: 065
  135. RITUXIMAB [Suspect]
     Active Substance: RITUXIMAB
     Dosage: UNK
     Route: 065
  136. RITUXIMAB [Suspect]
     Active Substance: RITUXIMAB
     Dosage: UNK
     Route: 065
  137. RITUXIMAB [Suspect]
     Active Substance: RITUXIMAB
     Dosage: UNK
     Route: 065
  138. RITUXIMAB [Suspect]
     Active Substance: RITUXIMAB
     Dosage: UNK
     Route: 065
  139. RITUXIMAB [Suspect]
     Active Substance: RITUXIMAB
     Dosage: UNK
     Route: 065
  140. RITUXIMAB [Suspect]
     Active Substance: RITUXIMAB
     Dosage: UNK
     Route: 065
  141. RITUXIMAB [Suspect]
     Active Substance: RITUXIMAB
     Dosage: UNK
     Route: 065
  142. RITUXIMAB [Suspect]
     Active Substance: RITUXIMAB
     Dosage: UNK
     Route: 065
  143. RITUXIMAB [Suspect]
     Active Substance: RITUXIMAB
     Dosage: UNK
     Route: 065
  144. RITUXIMAB [Suspect]
     Active Substance: RITUXIMAB
     Dosage: UNK
     Route: 065
  145. RITUXIMAB [Suspect]
     Active Substance: RITUXIMAB
     Dosage: 375 MILLIGRAM/SQ. METER
     Route: 065
  146. VINCRISTINE [Suspect]
     Active Substance: VINCRISTINE
     Indication: Diffuse large B-cell lymphoma
     Dosage: 1.4 MILLIGRAM/SQ. METER IN 3 WEEK INTERVAL (TOTAL VOLUME: 50 ML DATE OF MOST RECENT DOSE PRIOR TO FI
     Route: 042
     Dates: start: 20201124
  147. VINCRISTINE [Suspect]
     Active Substance: VINCRISTINE
     Indication: Diffuse large B-cell lymphoma
     Dosage: 9 MG/M2, THREE TIMES IN WEEK, 2 MILLIGRAM/SQ. METER, TOTAL VOLUME: 50 ML DATE OF MOST RECENT DOSE PR
     Route: 042
     Dates: start: 20201124
  148. VINCRISTINE [Suspect]
     Active Substance: VINCRISTINE
     Dosage: 9 MG/M2, THREE TIMES IN WEEK, 2 MILLIGRAM/SQ. METER, TOTAL VOLUME: 50 ML DATE OF MOST RECENT DOSE PR
     Route: 042
     Dates: start: 20201124
  149. VINCRISTINE [Suspect]
     Active Substance: VINCRISTINE
     Dosage: 9 MG/M2, THREE TIMES IN WEEK, 2 MILLIGRAM/SQ. METER, TOTAL VOLUME: 50 ML DATE OF MOST RECENT DOSE PR
     Route: 042
     Dates: start: 20201124
  150. VINCRISTINE [Suspect]
     Active Substance: VINCRISTINE
     Dosage: 9 MG/M2, THREE TIMES IN WEEK, 2 MILLIGRAM/SQ. METER, TOTAL VOLUME: 50 ML DATE OF MOST RECENT DOSE PR
     Route: 042
     Dates: start: 20201124
  151. VINCRISTINE [Suspect]
     Active Substance: VINCRISTINE
     Dosage: 9 MG/M2, THREE TIMES IN WEEK, TOTAL VOLUME: 50 ML DATE OF MOST RECENT DOSE PRIOR TO FIRST EPISODE OF
     Route: 065
     Dates: start: 20201121
  152. VINCRISTINE [Suspect]
     Active Substance: VINCRISTINE
     Dosage: 9 MG/M2, THREE TIMES IN WEEK, TOTAL VOLUME: 50 ML DATE OF MOST RECENT DOSE PRIOR TO FIRST EPISODE OF
     Route: 065
     Dates: start: 20201121
  153. VINCRISTINE [Suspect]
     Active Substance: VINCRISTINE
     Dosage: 2 MILLIGRAM/SQ. METER, 3XW (TOTAL VOLUME: 50 MLDATE OF MOST RECENT DOSE PRIOR TO FIRST EPISODE OF
     Route: 042
     Dates: start: 20201124
  154. VINCRISTINE [Suspect]
     Active Substance: VINCRISTINE
     Dosage: UNK
     Route: 065
  155. VINCRISTINE [Suspect]
     Active Substance: VINCRISTINE
     Dosage: UNK
     Route: 065
  156. VINCRISTINE [Suspect]
     Active Substance: VINCRISTINE
     Dosage: UNK
     Route: 065
  157. VINCRISTINE [Suspect]
     Active Substance: VINCRISTINE
     Dosage: UNK
     Route: 065
  158. VINCRISTINE [Suspect]
     Active Substance: VINCRISTINE
     Dosage: UNK
     Route: 065
  159. VINCRISTINE [Suspect]
     Active Substance: VINCRISTINE
     Dosage: UNK
     Route: 065
  160. VINCRISTINE [Suspect]
     Active Substance: VINCRISTINE
     Dosage: UNK
     Route: 065
  161. VINCRISTINE [Suspect]
     Active Substance: VINCRISTINE
     Dosage: UNK
     Route: 065
  162. VINCRISTINE [Suspect]
     Active Substance: VINCRISTINE
     Dosage: UNK ROUTE OF ADMIN (FREE TEXT): UNKNOWN ROUTE
     Route: 065
  163. VINCRISTINE [Suspect]
     Active Substance: VINCRISTINE
     Dosage: UNK ROUTE OF ADMIN (FREE TEXT): UNKNOWN ROUTE
     Route: 065
  164. VINCRISTINE [Suspect]
     Active Substance: VINCRISTINE
     Dosage: UNK ROUTE OF ADMIN (FREE TEXT): UNKNOWN ROUTE
     Route: 065
  165. VINCRISTINE [Suspect]
     Active Substance: VINCRISTINE
     Dosage: UNK ROUTE OF ADMIN (FREE TEXT): UNKNOWN ROUTE
     Route: 065
  166. VINCRISTINE [Suspect]
     Active Substance: VINCRISTINE
     Dosage: 9 MG/M2, THREE TIMES IN WEEK, 2 MILLIGRAM/SQ. METER, TOTAL VOLUME: 50 ML DATE OF MOST RECENT DOSE PR
     Route: 065
     Dates: start: 20201124
  167. VINCRISTINE [Suspect]
     Active Substance: VINCRISTINE
     Dosage: UNK ROUTE OF ADMIN (FREE TEXT): UNKNOWN ROUTE
     Route: 065
  168. VINCRISTINE [Suspect]
     Active Substance: VINCRISTINE
     Dosage: UNK ROUTE OF ADMIN (FREE TEXT): UNKNOWN ROUTE
     Route: 065
  169. VINCRISTINE [Suspect]
     Active Substance: VINCRISTINE
     Dosage: 9 MG/M2, THREE TIMES IN WEEK, TOTAL VOLUME: 50 ML DATE OF MOST RECENT DOSE PRIOR TO FIRST EPISODE OF
     Route: 065
     Dates: start: 20201124
  170. VINCRISTINE [Suspect]
     Active Substance: VINCRISTINE
     Dosage: 9 MG/M2, THREE TIMES IN WEEK, TOTAL VOLUME: 50 ML DATE OF MOST RECENT DOSE PRIOR TO FIRST EPISODE OF
     Route: 042
     Dates: start: 20201124
  171. VINCRISTINE [Suspect]
     Active Substance: VINCRISTINE
     Dosage: 9 MG/M2, THREE TIMES IN WEEK, TOTAL VOLUME: 50 ML DATE OF MOST RECENT DOSE PRIOR TO FIRST EPISODE OF
     Route: 065
     Dates: start: 20201124
  172. VINCRISTINE [Suspect]
     Active Substance: VINCRISTINE
     Dosage: UNK ROUTE OF ADMIN (FREE TEXT): UNKNOWN ROUTE
     Route: 065
  173. VINCRISTINE [Suspect]
     Active Substance: VINCRISTINE
     Dosage: 9 MG/M2, THREE TIMES IN WEEK, TOTAL VOLUME: 50 ML DATE OF MOST RECENT DOSE PRIOR TO FIRST EPISODE OF
     Route: 042
     Dates: start: 20201124
  174. VINCRISTINE [Suspect]
     Active Substance: VINCRISTINE
     Dosage: UNK ROUTE OF ADMIN (FREE TEXT): UNKNOWN ROUTE
     Route: 065
  175. VINCRISTINE [Suspect]
     Active Substance: VINCRISTINE
     Dosage: 9 MG/M2, THREE TIMES IN WEEK, TOTAL VOLUME: 50 ML DATE OF MOST RECENT DOSE PRIOR TO FIRST EPISODE OF
     Route: 042
     Dates: start: 20201124
  176. VINCRISTINE [Suspect]
     Active Substance: VINCRISTINE
     Dosage: UNK ROUTE OF ADMIN (FREE TEXT): UNKNOWN ROUTE
     Route: 065
  177. VINCRISTINE [Suspect]
     Active Substance: VINCRISTINE
     Dosage: 9 MG/M2, THREE TIMES IN WEEK, TOTAL VOLUME: 50 ML DATE OF MOST RECENT DOSE PRIOR TO FIRST EPISODE OF
     Route: 042
     Dates: start: 20201124
  178. VINCRISTINE [Suspect]
     Active Substance: VINCRISTINE
     Dosage: UNK
     Route: 065
  179. VINCRISTINE [Suspect]
     Active Substance: VINCRISTINE
     Dosage: UNK
     Route: 065
  180. VINCRISTINE [Suspect]
     Active Substance: VINCRISTINE
     Dosage: UNK
     Route: 065
  181. VINCRISTINE [Suspect]
     Active Substance: VINCRISTINE
     Dosage: UNK
     Route: 065
  182. VINCRISTINE [Suspect]
     Active Substance: VINCRISTINE
     Dosage: UNK
     Route: 065
  183. VINCRISTINE [Suspect]
     Active Substance: VINCRISTINE
     Dosage: UNK
     Route: 065
  184. VINCRISTINE [Suspect]
     Active Substance: VINCRISTINE
     Dosage: UNK
     Route: 065
  185. VINCRISTINE [Suspect]
     Active Substance: VINCRISTINE
     Dosage: UNK
     Route: 065
  186. VINCRISTINE [Suspect]
     Active Substance: VINCRISTINE
     Dosage: 2 MG/M2, Q3W
     Route: 065
     Dates: start: 20201124
  187. VINCRISTINE [Suspect]
     Active Substance: VINCRISTINE
     Dosage: UNK
     Route: 065
  188. VINCRISTINE [Suspect]
     Active Substance: VINCRISTINE
     Dosage: UNK
     Route: 065
  189. VINCRISTINE [Suspect]
     Active Substance: VINCRISTINE
     Dosage: UNK
     Route: 065
  190. VINCRISTINE [Suspect]
     Active Substance: VINCRISTINE
     Dosage: UNK
     Route: 065
  191. VINCRISTINE [Suspect]
     Active Substance: VINCRISTINE
     Dosage: UNK
     Route: 065
  192. VINCRISTINE [Suspect]
     Active Substance: VINCRISTINE
     Dosage: UNK
     Route: 065
  193. VINCRISTINE [Suspect]
     Active Substance: VINCRISTINE
     Dosage: UNK
     Route: 065
  194. VINCRISTINE [Suspect]
     Active Substance: VINCRISTINE
     Dosage: UNK
     Route: 065
  195. VINCRISTINE [Suspect]
     Active Substance: VINCRISTINE
     Dosage: UNK
     Route: 065
  196. VINCRISTINE [Suspect]
     Active Substance: VINCRISTINE
     Dosage: UNK
  197. VINCRISTINE [Suspect]
     Active Substance: VINCRISTINE
     Dosage: 9 MILLIGRAM/SQ. METER, 3XW (9 MG/M2, THREE TIMES IN WEEK, TOTAL VOLUME: 50 ML DATE OF MOST RECENT
     Route: 042
     Dates: start: 20201124
  198. VINCRISTINE [Suspect]
     Active Substance: VINCRISTINE
     Dosage: 6 MG, MG/M2, OTAL VOLUME: 50 ML, DATE OF MOST RECENT DOSE PRIOR TO FIRST EPISODE OF NEUTROPENIA 24/N
     Dates: start: 20201124
  199. VINCRISTINE [Suspect]
     Active Substance: VINCRISTINE
     Dosage: 6 MG, MG/M2, OTAL VOLUME: 50 ML, DATE OF MOST RECENT DOSE PRIOR TO FIRST EPISODE OF NEUTROPENIA 24/N
     Dates: start: 20201124
  200. VINCRISTINE [Suspect]
     Active Substance: VINCRISTINE
     Dosage: 2 MG/M2, 3XW
     Route: 042
     Dates: start: 20201121
  201. VINCRISTINE [Suspect]
     Active Substance: VINCRISTINE
     Dosage: 9 MG/M2, 2 MILLIGRAM/SQ. METER, THREE TIMES IN WEEK, TOTAL VOLUME: 50 ML DATE OF MOST RECENT DOSE PR
     Route: 042
     Dates: start: 20201124
  202. VINCRISTINE [Suspect]
     Active Substance: VINCRISTINE
     Dosage: 9 MG/M2, THREE TIMES IN WEEK, TOTAL VOLUME: 50 ML DATE OF MOST RECENT DOSE PRIOR TO FIRST EPISODE OF
     Route: 042
     Dates: start: 20201124
  203. VINCRISTINE [Suspect]
     Active Substance: VINCRISTINE
     Dosage: 9 MG/M2, THREE TIMES IN WEEK, TOTAL VOLUME: 50 ML DATE OF MOST RECENT DOSE PRIOR TO FIRST EPISODE OF
     Route: 042
     Dates: start: 20201124
  204. VINCRISTINE [Suspect]
     Active Substance: VINCRISTINE
     Dosage: 9 MG/M2, THREE TIMES IN WEEK, TOTAL VOLUME: 50 ML DATE OF MOST RECENT DOSE PRIOR TO FIRST EPISODE OF
     Route: 042
     Dates: start: 20201124
  205. VINCRISTINE [Suspect]
     Active Substance: VINCRISTINE
     Dosage: 2 MG/M2, 3XW
     Route: 042
     Dates: start: 20201121
  206. VINCRISTINE [Suspect]
     Active Substance: VINCRISTINE
     Dosage: 9 MG/M2, THREE TIMES IN WEEK, TOTAL VOLUME: 50 ML DATE OF MOST RECENT DOSE PRIOR TO FIRST EPISODE OF
     Route: 042
     Dates: start: 20201124
  207. VINCRISTINE [Suspect]
     Active Substance: VINCRISTINE
     Dosage: 9 MG/M2, 2 MILLIGRAM/SQ. METER, THREE TIMES IN WEEK, TOTAL VOLUME: 50 ML DATE OF MOST RECENT DOSE PR
     Route: 042
     Dates: start: 20201124
  208. VINCRISTINE [Suspect]
     Active Substance: VINCRISTINE
     Dosage: UNK
  209. VINCRISTINE [Suspect]
     Active Substance: VINCRISTINE
     Dosage: UNK
  210. VINCRISTINE [Suspect]
     Active Substance: VINCRISTINE
     Dosage: UNK
  211. VINCRISTINE [Suspect]
     Active Substance: VINCRISTINE
     Dosage: UNK
  212. VINCRISTINE [Suspect]
     Active Substance: VINCRISTINE
     Dosage: UNK
  213. VINCRISTINE [Suspect]
     Active Substance: VINCRISTINE
     Dosage: UNK
  214. VINCRISTINE [Suspect]
     Active Substance: VINCRISTINE
     Dosage: UNK
  215. VINCRISTINE [Suspect]
     Active Substance: VINCRISTINE
     Dosage: UNK
  216. VINCRISTINE [Suspect]
     Active Substance: VINCRISTINE
     Dosage: UNK
  217. VINCRISTINE [Suspect]
     Active Substance: VINCRISTINE
     Dosage: UNK
  218. VINCRISTINE [Suspect]
     Active Substance: VINCRISTINE
     Indication: Diffuse large B-cell lymphoma
     Dosage: 2 MILLIGRAM/SQ. METER, EVERY 3 WEEKS (TOTAL VOLUME: 50 ML DATE OF MOST RECENT DOSE PRIOR TO FIRST EP
     Route: 065
     Dates: start: 20201124
  219. VINCRISTINE [Suspect]
     Active Substance: VINCRISTINE
     Dosage: 9 MG/M2, THREE TIMES IN WEEK, TOTAL VOLUME: 50 ML DATE OF MOST RECENT DOSE PRIOR TO FIRST EPISODE OF
     Route: 065
     Dates: start: 20201121
  220. VINCRISTINE [Suspect]
     Active Substance: VINCRISTINE
     Indication: Diffuse large B-cell lymphoma
     Dosage: UNK
     Route: 065
  221. VINCRISTINE [Suspect]
     Active Substance: VINCRISTINE
     Indication: Diffuse large B-cell lymphoma
     Dosage: UNK
     Route: 065
  222. VINCRISTINE [Suspect]
     Active Substance: VINCRISTINE
     Indication: Diffuse large B-cell lymphoma
     Dosage: UNK
     Route: 065
  223. VINCRISTINE [Suspect]
     Active Substance: VINCRISTINE
     Indication: Diffuse large B-cell lymphoma
     Dosage: UNK
     Route: 065
  224. VINCRISTINE [Suspect]
     Active Substance: VINCRISTINE
     Dosage: 6 MILLIGRAM/SQ. METER PER WEEK (TOTAL VOLUME: 50 MLDATE OF MOST RECENT DOSE PRIOR TO FIRST EPISODE O
     Route: 042
     Dates: start: 20201124
  225. VINCRISTINE [Suspect]
     Active Substance: VINCRISTINE
     Dosage: UNK
     Route: 065
  226. VINCRISTINE [Suspect]
     Active Substance: VINCRISTINE
     Dosage: UNK
     Route: 065
  227. VINCRISTINE [Suspect]
     Active Substance: VINCRISTINE
     Dosage: UNK
     Route: 065
  228. VINCRISTINE [Suspect]
     Active Substance: VINCRISTINE
     Dosage: UNK
     Route: 065
  229. VINCRISTINE [Suspect]
     Active Substance: VINCRISTINE
     Dosage: UNK ROUTE OF ADMIN (FREE TEXT): UNKNOWN ROUTE
     Route: 065
  230. VINCRISTINE [Suspect]
     Active Substance: VINCRISTINE
     Dosage: UNK
     Route: 065
  231. VINCRISTINE [Suspect]
     Active Substance: VINCRISTINE
     Dosage: UNK ROUTE OF ADMIN (FREE TEXT): UNKNOWN ROUTE
     Route: 065
  232. VINCRISTINE [Suspect]
     Active Substance: VINCRISTINE
     Dosage: UNK ROUTE OF ADMIN (FREE TEXT): UNKNOWN ROUTE
     Route: 065
  233. VINCRISTINE [Suspect]
     Active Substance: VINCRISTINE
     Dosage: UNK ROUTE OF ADMIN (FREE TEXT): UNKNOWN ROUTE
     Route: 065
  234. VINCRISTINE [Suspect]
     Active Substance: VINCRISTINE
     Dosage: 9 MILLIGRAM/SQ. METER (9 MG/M2, THREE TIMES IN WEEK, TOTAL VOLUME: 50 ML DATE OF MOST RECENT DOSE PR
     Route: 065
     Dates: start: 20201124
  235. VINCRISTINE [Suspect]
     Active Substance: VINCRISTINE
     Dosage: UNK ROUTE OF ADMIN (FREE TEXT): UNKNOWN ROUTE
     Route: 065
  236. VINCRISTINE [Suspect]
     Active Substance: VINCRISTINE
     Dosage: UNK ROUTE OF ADMIN (FREE TEXT): UNKNOWN ROUTE
     Route: 065
  237. VINCRISTINE [Suspect]
     Active Substance: VINCRISTINE
     Dosage: 9 MILLIGRAM/SQ. METER (9 MG/M2, THREE TIMES IN WEEK, TOTAL VOLUME: 50 ML DATE OF MOST RECENT DOSE PR
     Route: 065
     Dates: start: 20201124
  238. VINCRISTINE [Suspect]
     Active Substance: VINCRISTINE
     Dosage: 9 MILLIGRAM/SQ. METER (9 MG/M2, THREE TIMES IN WEEK, TOTAL VOLUME: 50 ML DATE OF MOST RECENT DOSE PR
     Route: 042
     Dates: start: 20201124
  239. VINCRISTINE [Suspect]
     Active Substance: VINCRISTINE
     Dosage: UNK ROUTE OF ADMIN (FREE TEXT): UNKNOWN ROUTE
     Route: 065
  240. VINCRISTINE [Suspect]
     Active Substance: VINCRISTINE
     Dosage: 9 MILLIGRAM/SQ. METER (9 MG/M2, THREE TIMES IN WEEK, TOTAL VOLUME: 50 ML DATE OF MOST RECENT DOSE PR
     Route: 042
     Dates: start: 20201124
  241. VINCRISTINE [Suspect]
     Active Substance: VINCRISTINE
     Dosage: UNK ROUTE OF ADMIN (FREE TEXT): UNKNOWN ROUTE
     Route: 065
  242. VINCRISTINE [Suspect]
     Active Substance: VINCRISTINE
     Dosage: 9 MILLIGRAM/SQ. METER (9 MG/M2, THREE TIMES IN WEEK, TOTAL VOLUME: 50 ML DATE OF MOST RECENT DOSE PR
     Route: 042
     Dates: start: 20201124
  243. VINCRISTINE [Suspect]
     Active Substance: VINCRISTINE
     Dosage: UNK ROUTE OF ADMIN (FREE TEXT): UNKNOWN ROUTE
     Route: 065
  244. VINCRISTINE [Suspect]
     Active Substance: VINCRISTINE
     Dosage: 9 MILLIGRAM/SQ. METER (9 MG/M2, THREE TIMES IN WEEK, TOTAL VOLUME: 50 ML DATE OF MOST RECENT DOSE PR
     Route: 042
     Dates: start: 20201124
  245. VINCRISTINE [Suspect]
     Active Substance: VINCRISTINE
     Dosage: UNK
     Route: 065
  246. VINCRISTINE [Suspect]
     Active Substance: VINCRISTINE
     Dosage: UNK
     Route: 065
  247. VINCRISTINE [Suspect]
     Active Substance: VINCRISTINE
     Dosage: UNK
     Route: 065
  248. VINCRISTINE [Suspect]
     Active Substance: VINCRISTINE
     Dosage: UNK
     Route: 065
  249. VINCRISTINE [Suspect]
     Active Substance: VINCRISTINE
     Dosage: UNK
     Route: 065
  250. VINCRISTINE [Suspect]
     Active Substance: VINCRISTINE
     Dosage: UNK
     Route: 065
  251. VINCRISTINE [Suspect]
     Active Substance: VINCRISTINE
     Dosage: UNK
     Route: 065
  252. VINCRISTINE [Suspect]
     Active Substance: VINCRISTINE
     Dosage: UNK
     Route: 065
  253. VINCRISTINE [Suspect]
     Active Substance: VINCRISTINE
     Dosage: 2 MILLIGRAM/SQ. METER, EVERY 3 WEEKS
     Route: 065
     Dates: start: 20201124
  254. VINCRISTINE [Suspect]
     Active Substance: VINCRISTINE
     Dosage: UNK
     Route: 065
  255. VINCRISTINE [Suspect]
     Active Substance: VINCRISTINE
     Dosage: UNK
     Route: 065
  256. VINCRISTINE [Suspect]
     Active Substance: VINCRISTINE
     Dosage: UNK
     Route: 065
  257. VINCRISTINE [Suspect]
     Active Substance: VINCRISTINE
     Dosage: UNK
     Route: 065
  258. VINCRISTINE [Suspect]
     Active Substance: VINCRISTINE
     Dosage: UNK
     Route: 065
  259. VINCRISTINE [Suspect]
     Active Substance: VINCRISTINE
     Dosage: UNK
     Route: 065
  260. VINCRISTINE [Suspect]
     Active Substance: VINCRISTINE
     Dosage: 27 MG/M2, (9 MILLIGRAM/SQ. METER, 3XW (9 MG/M2, THREE TIMES IN WEEK, TOTAL VOLUME: 50 ML DATE OF MOS
     Route: 042
     Dates: start: 20201124
  261. VINCRISTINE [Suspect]
     Active Substance: VINCRISTINE
     Dosage: UNK (6 MG, MG/M2, OTAL VOLUME: 50 ML, DATE OF MOST RECENT DOSE PRIOR TO FIRST EPISODE OF NEUTROPENIA
     Route: 065
     Dates: start: 20201124
  262. VINCRISTINE [Suspect]
     Active Substance: VINCRISTINE
     Dosage: UNK (6 MG, MG/M2, OTAL VOLUME: 50 ML, DATE OF MOST RECENT DOSE PRIOR TO FIRST EPISODE OF NEUTROPENIA
     Route: 065
     Dates: start: 20201124
  263. VINCRISTINE [Suspect]
     Active Substance: VINCRISTINE
     Dosage: 2 MG/M2, 3XW
     Route: 042
     Dates: start: 20201121
  264. VINCRISTINE [Suspect]
     Active Substance: VINCRISTINE
     Dosage: UNK (9 MG/M2, 2 MILLIGRAM/SQ. METER, THREE TIMES IN WEEK, TOTAL VOLUME: 50 ML DATE OF MOST RECENT DO
     Route: 042
     Dates: start: 20201124
  265. VINCRISTINE [Suspect]
     Active Substance: VINCRISTINE
     Dosage: UNK (9 MG/M2, THREE TIMES IN WEEK, TOTAL VOLUME: 50 ML DATE OF MOST RECENT DOSE PRIOR TO FIRST EPISO
     Route: 042
     Dates: start: 20201124
  266. VINCRISTINE [Suspect]
     Active Substance: VINCRISTINE
     Dosage: UNK (9 MG/M2, THREE TIMES IN WEEK, TOTAL VOLUME: 50 ML DATE OF MOST RECENT DOSE PRIOR TO FIRST EPISO
     Route: 042
     Dates: start: 20201124
  267. VINCRISTINE [Suspect]
     Active Substance: VINCRISTINE
     Dosage: UNK (9 MG/M2, THREE TIMES IN WEEK, TOTAL VOLUME: 50 ML DATE OF MOST RECENT DOSE PRIOR TO FIRST EPISO
     Route: 042
     Dates: start: 20201124
  268. VINCRISTINE [Suspect]
     Active Substance: VINCRISTINE
     Dosage: 2 MILLIGRAM/SQ. METER, EVERY 3 WEEKS
     Route: 042
     Dates: start: 20201121
  269. VINCRISTINE [Suspect]
     Active Substance: VINCRISTINE
     Dosage: UNK (9 MG/M2, THREE TIMES IN WEEK, TOTAL VOLUME: 50 ML DATE OF MOST RECENT DOSE PRIOR TO FIRST EPISO
     Route: 042
     Dates: start: 20201124
  270. VINCRISTINE [Suspect]
     Active Substance: VINCRISTINE
     Dosage: 9 MG/M2, THREE TIMES IN WEEK, TOTAL VOLUME: 50 ML DATE OF MOST RECENT DOSE PRIOR TO FIRST EPISODE OF
  271. GLOFITAMAB [Suspect]
     Active Substance: GLOFITAMAB
     Indication: Diffuse large B-cell lymphoma
     Dosage: UNK
     Route: 065
  272. GLOFITAMAB [Suspect]
     Active Substance: GLOFITAMAB
     Indication: Diffuse large B-cell lymphoma
     Dosage: UNK
     Route: 065
  273. GLOFITAMAB [Suspect]
     Active Substance: GLOFITAMAB
     Indication: Diffuse large B-cell lymphoma
     Dosage: UNK
     Route: 065
  274. GLOFITAMAB [Suspect]
     Active Substance: GLOFITAMAB
     Indication: Diffuse large B-cell lymphoma
     Dosage: UNK
     Route: 065
  275. GLOFITAMAB [Suspect]
     Active Substance: GLOFITAMAB
     Indication: Diffuse large B-cell lymphoma
     Dosage: 2.5 MILLIGRAM, Q3W (THE MOST RECENT DOSE OF RO7082859 (10 MG) WAS ADMINISTERED ON 30/DEC/2020
     Route: 042
     Dates: start: 20201222
  276. GLOFITAMAB [Suspect]
     Active Substance: GLOFITAMAB
     Dosage: 2.5 MILLIGRAM, EVERY 3 WEEKS (THE MOST RECENT DOSE OF RO7082859 (10 MG) WAS ADMINISTERED ON 30/DEC/2
     Route: 065
     Dates: start: 20201222
  277. GLOFITAMAB [Suspect]
     Active Substance: GLOFITAMAB
     Dosage: UNK
     Route: 065
  278. GLOFITAMAB [Suspect]
     Active Substance: GLOFITAMAB
     Dosage: UNK
     Route: 065
  279. GLOFITAMAB [Suspect]
     Active Substance: GLOFITAMAB
     Dosage: UNK
     Route: 065
  280. GLOFITAMAB [Suspect]
     Active Substance: GLOFITAMAB
     Dosage: UNK
     Route: 065
  281. GLOFITAMAB [Suspect]
     Active Substance: GLOFITAMAB
     Dosage: UNK
     Route: 065
  282. GLOFITAMAB [Suspect]
     Active Substance: GLOFITAMAB
     Dosage: UNK
     Route: 065
  283. GLOFITAMAB [Suspect]
     Active Substance: GLOFITAMAB
     Dosage: UNK
     Route: 065
  284. GLOFITAMAB [Suspect]
     Active Substance: GLOFITAMAB
     Dosage: UNK
     Route: 065
  285. GLOFITAMAB [Suspect]
     Active Substance: GLOFITAMAB
     Dosage: UNK
     Route: 065
  286. GLOFITAMAB [Suspect]
     Active Substance: GLOFITAMAB
     Dosage: UNK
     Route: 065
  287. GLOFITAMAB [Suspect]
     Active Substance: GLOFITAMAB
     Dosage: UNK
     Route: 065
  288. GLOFITAMAB [Suspect]
     Active Substance: GLOFITAMAB
     Dosage: UNK
     Route: 065
  289. GLOFITAMAB [Suspect]
     Active Substance: GLOFITAMAB
     Dosage: 2.5 MILLIGRAM, EVERY 3 WEEKS (2.5 MG, EVERY 3 WEEKS, THE MOST RECENT DOSE OF RO7082859 (10 MG) WAS A
     Route: 065
     Dates: start: 20201230
  290. GLOFITAMAB [Suspect]
     Active Substance: GLOFITAMAB
     Dosage: UNK
     Route: 065
  291. GLOFITAMAB [Suspect]
     Active Substance: GLOFITAMAB
     Dosage: UNK
     Route: 065
  292. GLOFITAMAB [Suspect]
     Active Substance: GLOFITAMAB
     Dosage: 2.5 MILLIGRAM/SQ. METER
     Route: 042
  293. GLOFITAMAB [Suspect]
     Active Substance: GLOFITAMAB
     Dosage: 2.5 MILLIGRAM, EVERY 3 WEEKS (2.5 MG, EVERY 3 WEEKS, THE MOST RECENT DOSE OF RO7082859 (10 MG) WAS A
     Route: 065
     Dates: start: 20201222
  294. GLOFITAMAB [Suspect]
     Active Substance: GLOFITAMAB
     Dosage: UNK
     Route: 065
  295. GLOFITAMAB [Suspect]
     Active Substance: GLOFITAMAB
     Dosage: UNK
     Route: 065
  296. GLOFITAMAB [Suspect]
     Active Substance: GLOFITAMAB
     Dosage: 2.5 MILLIGRAM/SQ. METER
     Route: 042
  297. GLOFITAMAB [Suspect]
     Active Substance: GLOFITAMAB
     Dosage: 2.5 MILLIGRAM, EVERY 3 WEEKS
     Route: 065
  298. GLOFITAMAB [Suspect]
     Active Substance: GLOFITAMAB
     Dosage: UNK
     Route: 065
  299. GLOFITAMAB [Suspect]
     Active Substance: GLOFITAMAB
     Dosage: UNK
     Route: 065
  300. GLOFITAMAB [Suspect]
     Active Substance: GLOFITAMAB
     Dosage: UNK
     Route: 065
  301. GLOFITAMAB [Suspect]
     Active Substance: GLOFITAMAB
     Dosage: UNK
     Route: 065
  302. GLOFITAMAB [Suspect]
     Active Substance: GLOFITAMAB
     Dosage: UNK
     Route: 065
  303. GLOFITAMAB [Suspect]
     Active Substance: GLOFITAMAB
     Dosage: UNK
     Route: 065
  304. GLOFITAMAB [Suspect]
     Active Substance: GLOFITAMAB
     Dosage: UNK
     Route: 065
  305. GLOFITAMAB [Suspect]
     Active Substance: GLOFITAMAB
     Dosage: UNK
     Route: 065
  306. GLOFITAMAB [Suspect]
     Active Substance: GLOFITAMAB
     Dosage: UNK
     Route: 065
  307. GLOFITAMAB [Suspect]
     Active Substance: GLOFITAMAB
     Dosage: UNK
     Route: 048
  308. GLOFITAMAB [Suspect]
     Active Substance: GLOFITAMAB
     Dosage: UNK
     Route: 042
  309. GLOFITAMAB [Suspect]
     Active Substance: GLOFITAMAB
     Dosage: UNK
     Route: 065
  310. GLOFITAMAB [Suspect]
     Active Substance: GLOFITAMAB
     Dosage: UNK
     Route: 042
  311. GLOFITAMAB [Suspect]
     Active Substance: GLOFITAMAB
     Dosage: UNK
     Route: 042
  312. GLOFITAMAB [Suspect]
     Active Substance: GLOFITAMAB
     Dosage: UNK
     Route: 065
  313. GLOFITAMAB [Suspect]
     Active Substance: GLOFITAMAB
     Dosage: UNK
     Route: 065
  314. GLOFITAMAB [Suspect]
     Active Substance: GLOFITAMAB
     Dosage: UNK
     Route: 065
  315. GLOFITAMAB [Suspect]
     Active Substance: GLOFITAMAB
     Dosage: UNK
     Route: 065
  316. GLOFITAMAB [Suspect]
     Active Substance: GLOFITAMAB
     Dosage: UNK
     Route: 065
  317. GLOFITAMAB [Suspect]
     Active Substance: GLOFITAMAB
     Dosage: UNK
     Route: 065
  318. GLOFITAMAB [Suspect]
     Active Substance: GLOFITAMAB
     Dosage: UNK
     Route: 065
  319. GLOFITAMAB [Suspect]
     Active Substance: GLOFITAMAB
     Dosage: UNK
     Route: 065
  320. GLOFITAMAB [Suspect]
     Active Substance: GLOFITAMAB
     Dosage: UNK
     Route: 065
  321. GLOFITAMAB [Suspect]
     Active Substance: GLOFITAMAB
     Dosage: UNK
  322. GLOFITAMAB [Suspect]
     Active Substance: GLOFITAMAB
     Dosage: UNK
  323. GLOFITAMAB [Suspect]
     Active Substance: GLOFITAMAB
     Dosage: UNK
  324. GLOFITAMAB [Suspect]
     Active Substance: GLOFITAMAB
     Dosage: UNK
  325. GLOFITAMAB [Suspect]
     Active Substance: GLOFITAMAB
     Dosage: 2.5 MG, EVERY 3 WEEKS, THE MOST RECENT DOSE OF RO7082859 (10 MG) WAS ADMINISTERED ON 30/DEC/2020 AT
  326. GLOFITAMAB [Suspect]
     Active Substance: GLOFITAMAB
     Dosage: UNK
  327. GLOFITAMAB [Suspect]
     Active Substance: GLOFITAMAB
     Dosage: UNK
  328. GLOFITAMAB [Suspect]
     Active Substance: GLOFITAMAB
     Dosage: UNK
  329. GLOFITAMAB [Suspect]
     Active Substance: GLOFITAMAB
     Dosage: UNK ROUTE OF ADMIN (FREE TEXT): UNKNOWN ROUTE
  330. GLOFITAMAB [Suspect]
     Active Substance: GLOFITAMAB
     Dosage: 2.5 MG, EVERY 3 WEEKS, THE MOST RECENT DOSE OF RO7082859 (10 MG) WAS ADMINISTERED ON 30/DEC/2020 AT
     Dates: start: 20201222
  331. GLOFITAMAB [Suspect]
     Active Substance: GLOFITAMAB
     Dosage: UNK ROUTE OF ADMIN (FREE TEXT): UNKNOWN ROUTE
  332. GLOFITAMAB [Suspect]
     Active Substance: GLOFITAMAB
     Dosage: UNK ROUTE OF ADMIN (FREE TEXT): UNKNOWN ROUTE
  333. GLOFITAMAB [Suspect]
     Active Substance: GLOFITAMAB
     Dosage: UNK ROUTE OF ADMIN (FREE TEXT): UNKNOWN ROUTE
  334. GLOFITAMAB [Suspect]
     Active Substance: GLOFITAMAB
     Dosage: 2.5 MG
  335. GLOFITAMAB [Suspect]
     Active Substance: GLOFITAMAB
     Dosage: UNK
  336. GLOFITAMAB [Suspect]
     Active Substance: GLOFITAMAB
     Dosage: UNK
  337. GLOFITAMAB [Suspect]
     Active Substance: GLOFITAMAB
     Dosage: UNK
  338. GLOFITAMAB [Suspect]
     Active Substance: GLOFITAMAB
     Dosage: UNK
  339. GLOFITAMAB [Suspect]
     Active Substance: GLOFITAMAB
     Dosage: UNK
  340. GLOFITAMAB [Suspect]
     Active Substance: GLOFITAMAB
     Dosage: 2.5 MG, EVERY 3 WEEKS, THE MOST RECENT DOSE OF RO7082859 (10 MG) WAS ADMINISTERED ON 30/DEC/2020 AT
  341. GLOFITAMAB [Suspect]
     Active Substance: GLOFITAMAB
     Dosage: UNK
  342. GLOFITAMAB [Suspect]
     Active Substance: GLOFITAMAB
     Dosage: UNK
     Route: 042
  343. GLOFITAMAB [Suspect]
     Active Substance: GLOFITAMAB
     Dosage: UNK
     Route: 042
  344. GLOFITAMAB [Suspect]
     Active Substance: GLOFITAMAB
     Dosage: UNK
  345. GLOFITAMAB [Suspect]
     Active Substance: GLOFITAMAB
     Dosage: UNK
     Route: 042
  346. GLOFITAMAB [Suspect]
     Active Substance: GLOFITAMAB
     Dosage: UNK
     Route: 042
  347. GLOFITAMAB [Suspect]
     Active Substance: GLOFITAMAB
     Dosage: UNK
     Route: 042
  348. GLOFITAMAB [Suspect]
     Active Substance: GLOFITAMAB
     Dosage: UNK
  349. GLOFITAMAB [Suspect]
     Active Substance: GLOFITAMAB
     Dosage: UNK
     Route: 042
  350. GLOFITAMAB [Suspect]
     Active Substance: GLOFITAMAB
     Dosage: UNK
  351. GLOFITAMAB [Suspect]
     Active Substance: GLOFITAMAB
     Dosage: UNK
     Route: 042
  352. GLOFITAMAB [Suspect]
     Active Substance: GLOFITAMAB
     Dosage: UNK
     Route: 042
  353. GLOFITAMAB [Suspect]
     Active Substance: GLOFITAMAB
     Dosage: UNK
  354. GLOFITAMAB [Suspect]
     Active Substance: GLOFITAMAB
     Dosage: UNK
     Route: 042
  355. GLOFITAMAB [Suspect]
     Active Substance: GLOFITAMAB
     Dosage: UNK
     Route: 042
  356. GLOFITAMAB [Suspect]
     Active Substance: GLOFITAMAB
     Dosage: UNK
     Route: 042
  357. GLOFITAMAB [Suspect]
     Active Substance: GLOFITAMAB
     Dosage: UNK
     Route: 042
  358. GLOFITAMAB [Suspect]
     Active Substance: GLOFITAMAB
     Dosage: UNK
     Route: 042
  359. GLOFITAMAB [Suspect]
     Active Substance: GLOFITAMAB
     Dosage: UNK
  360. GLOFITAMAB [Suspect]
     Active Substance: GLOFITAMAB
     Dosage: UNK
     Route: 042
  361. GLOFITAMAB [Suspect]
     Active Substance: GLOFITAMAB
     Dosage: UNK
     Route: 042
  362. GLOFITAMAB [Suspect]
     Active Substance: GLOFITAMAB
     Dosage: UNK
     Route: 042
  363. DOXORUBICIN HYDROCHLORIDE [Suspect]
     Active Substance: DOXORUBICIN HYDROCHLORIDE
     Indication: Diffuse large B-cell lymphoma
     Dosage: 50 MILLIGRAM/SQ. METER, 3XW (50 MG/M2, TIW (DATE OF MOST RECENT DOSE PRIOR TO FIRST EPISODE OF
     Route: 065
     Dates: start: 20201124
  364. DOXORUBICIN HYDROCHLORIDE [Suspect]
     Active Substance: DOXORUBICIN HYDROCHLORIDE
     Indication: Diffuse large B-cell lymphoma
     Dosage: UNK
     Route: 050
     Dates: start: 20201124
  365. DOXORUBICIN HYDROCHLORIDE [Suspect]
     Active Substance: DOXORUBICIN HYDROCHLORIDE
     Indication: Diffuse large B-cell lymphoma
     Dosage: UNK
     Route: 065
     Dates: start: 20201124
  366. DOXORUBICIN HYDROCHLORIDE [Suspect]
     Active Substance: DOXORUBICIN HYDROCHLORIDE
     Indication: Diffuse large B-cell lymphoma
  367. DOXORUBICIN HYDROCHLORIDE [Suspect]
     Active Substance: DOXORUBICIN HYDROCHLORIDE
     Indication: Diffuse large B-cell lymphoma
  368. BENDAMUSTINE [Suspect]
     Active Substance: BENDAMUSTINE
     Indication: Product used for unknown indication
     Dosage: UNK
     Route: 065
  369. BENDAMUSTINE [Suspect]
     Active Substance: BENDAMUSTINE
     Indication: Product used for unknown indication
     Dosage: UNK
     Route: 065
  370. BENDAMUSTINE [Suspect]
     Active Substance: BENDAMUSTINE
     Indication: Prophylaxis
     Dosage: UNK
     Route: 065
  371. BENDAMUSTINE [Suspect]
     Active Substance: BENDAMUSTINE
     Dosage: UNK
     Route: 065
  372. BENDAMUSTINE [Suspect]
     Active Substance: BENDAMUSTINE
     Dosage: UNK
     Route: 065
  373. BENDAMUSTINE [Suspect]
     Active Substance: BENDAMUSTINE
     Dosage: UNK
     Route: 065
  374. BENDAMUSTINE [Suspect]
     Active Substance: BENDAMUSTINE
     Dosage: UNK
     Route: 065
  375. BENDAMUSTINE [Suspect]
     Active Substance: BENDAMUSTINE
     Dosage: UNK
     Route: 065
  376. BENDAMUSTINE [Suspect]
     Active Substance: BENDAMUSTINE
     Dosage: UNK
     Route: 065
  377. BENDAMUSTINE [Suspect]
     Active Substance: BENDAMUSTINE
     Dosage: UNK
     Route: 065
  378. BENDAMUSTINE [Suspect]
     Active Substance: BENDAMUSTINE
     Dosage: UNK
     Route: 065
  379. BENDAMUSTINE [Suspect]
     Active Substance: BENDAMUSTINE
     Dosage: UNK
     Route: 065
  380. BENDAMUSTINE [Suspect]
     Active Substance: BENDAMUSTINE
     Dosage: UNK
     Route: 065
  381. BENDAMUSTINE [Suspect]
     Active Substance: BENDAMUSTINE
     Dosage: UNK
     Route: 065
  382. BENDAMUSTINE [Suspect]
     Active Substance: BENDAMUSTINE
     Dosage: UNK
     Route: 065
  383. BENDAMUSTINE [Suspect]
     Active Substance: BENDAMUSTINE
     Dosage: UNK
     Route: 065
  384. BENDAMUSTINE [Suspect]
     Active Substance: BENDAMUSTINE
     Dosage: UNK
     Route: 065
  385. BENDAMUSTINE [Suspect]
     Active Substance: BENDAMUSTINE
     Dosage: UNK
     Route: 065
  386. BENDAMUSTINE [Suspect]
     Active Substance: BENDAMUSTINE
     Dosage: UNK
     Route: 065
  387. BENDAMUSTINE [Suspect]
     Active Substance: BENDAMUSTINE
     Dosage: UNK
     Route: 065
  388. BENDAMUSTINE [Suspect]
     Active Substance: BENDAMUSTINE
     Dosage: UNK
  389. BENDAMUSTINE [Suspect]
     Active Substance: BENDAMUSTINE
     Dosage: UNK
  390. FILGRASTIM [Concomitant]
     Active Substance: FILGRASTIM
     Indication: Prophylaxis
     Dosage: UNK
     Route: 065
     Dates: start: 20201129, end: 20201206
  391. FILGRASTIM [Concomitant]
     Active Substance: FILGRASTIM
     Indication: Prophylaxis
     Dosage: UNK
     Route: 065
     Dates: start: 20201220
  392. FILGRASTIM [Concomitant]
     Active Substance: FILGRASTIM
     Indication: Prophylaxis
     Dosage: UNK
     Route: 065
     Dates: start: 20201220
  393. FILGRASTIM [Concomitant]
     Active Substance: FILGRASTIM
     Indication: Prophylaxis
     Dosage: UNK ROUTE OF ADMIN (FREE TEXT): UNKNOWN ROUTE
     Route: 065
     Dates: start: 20201220
  394. FILGRASTIM [Concomitant]
     Active Substance: FILGRASTIM
     Indication: Prophylaxis
     Dosage: UNK
     Route: 065
     Dates: start: 20201129, end: 20201206
  395. FILGRASTIM [Concomitant]
     Active Substance: FILGRASTIM
     Indication: Prophylaxis
     Dosage: UNK ROUTE OF ADMIN (FREE TEXT): UNKNOWN ROUTE
     Route: 065
     Dates: start: 20201129, end: 20201206
  396. FILGRASTIM [Concomitant]
     Active Substance: FILGRASTIM
     Dosage: UNK
     Route: 065
     Dates: start: 20201129, end: 20201206
  397. FILGRASTIM [Concomitant]
     Active Substance: FILGRASTIM
     Dosage: UNK
     Route: 065
     Dates: start: 20201129, end: 20201206
  398. FILGRASTIM [Concomitant]
     Active Substance: FILGRASTIM
     Dosage: UNK ROUTE OF ADMIN (FREE TEXT): UNKNOWN ROUTE
     Route: 065
     Dates: start: 20201220
  399. FILGRASTIM [Concomitant]
     Active Substance: FILGRASTIM
     Dosage: UNK ROUTE OF ADMIN (FREE TEXT): UNKNOWN ROUTE
     Route: 065
     Dates: start: 20201129, end: 20201206
  400. FILGRASTIM [Concomitant]
     Active Substance: FILGRASTIM
     Dosage: UNK ROUTE OF ADMIN (FREE TEXT): UNKNOWN ROUTE
     Route: 065
     Dates: start: 20201220
  401. FILGRASTIM [Concomitant]
     Active Substance: FILGRASTIM
     Dosage: UNK ROUTE OF ADMIN (FREE TEXT): UNKNOWN ROUTE
     Route: 065
     Dates: start: 20201220
  402. FILGRASTIM [Concomitant]
     Active Substance: FILGRASTIM
     Dosage: UNK ROUTE OF ADMIN (FREE TEXT): UNKNOWN ROUTE
     Route: 065
     Dates: start: 20201129, end: 20201206
  403. FILGRASTIM [Concomitant]
     Active Substance: FILGRASTIM
     Dosage: UNK
     Route: 065
     Dates: start: 20201206, end: 20201206
  404. FILGRASTIM [Concomitant]
     Active Substance: FILGRASTIM
     Dosage: UNK ROUTE OF ADMIN (FREE TEXT): UNKNOWN ROUTE
     Route: 065
     Dates: start: 20201220
  405. FILGRASTIM [Concomitant]
     Active Substance: FILGRASTIM
     Dosage: UNK ROUTE OF ADMIN (FREE TEXT): UNKNOWN ROUTE
     Route: 065
     Dates: start: 20201129, end: 20201206
  406. FILGRASTIM [Concomitant]
     Active Substance: FILGRASTIM
     Dosage: UNK ROUTE OF ADMIN (FREE TEXT): UNKNOWN ROUTE
     Route: 065
     Dates: start: 20201220
  407. FILGRASTIM [Concomitant]
     Active Substance: FILGRASTIM
     Dosage: UNK ROUTE OF ADMIN (FREE TEXT): UNKNOWN ROUTE
     Route: 065
     Dates: start: 20201220
  408. FILGRASTIM [Concomitant]
     Active Substance: FILGRASTIM
     Dosage: UNK ROUTE OF ADMIN (FREE TEXT): UNKNOWN ROUTE
     Route: 065
     Dates: start: 20201129, end: 20201206
  409. FILGRASTIM [Concomitant]
     Active Substance: FILGRASTIM
     Dosage: UNK ROUTE OF ADMIN (FREE TEXT): UNKNOWN ROUTE
     Route: 065
     Dates: start: 20201129, end: 20201206
  410. FILGRASTIM [Concomitant]
     Active Substance: FILGRASTIM
     Dosage: UNK ROUTE OF ADMIN (FREE TEXT): UNKNOWN ROUTE
     Route: 065
     Dates: start: 20201220
  411. FILGRASTIM [Concomitant]
     Active Substance: FILGRASTIM
     Dosage: UNK ROUTE OF ADMIN (FREE TEXT): UNKNOWN ROUTE
     Route: 065
     Dates: start: 20201129, end: 20201206
  412. FILGRASTIM [Concomitant]
     Active Substance: FILGRASTIM
     Dosage: UNK ROUTE OF ADMIN (FREE TEXT): UNKNOWN ROUTE
     Route: 065
     Dates: start: 20201129, end: 20201206
  413. FILGRASTIM [Concomitant]
     Active Substance: FILGRASTIM
     Dosage: UNK ROUTE OF ADMIN (FREE TEXT): UNKNOWN ROUTE
     Route: 065
     Dates: start: 20201129, end: 20201206
  414. FILGRASTIM [Concomitant]
     Active Substance: FILGRASTIM
     Dosage: UNK ROUTE OF ADMIN (FREE TEXT): UNKNOWN ROUTE
     Route: 065
     Dates: start: 20201220
  415. FILGRASTIM [Concomitant]
     Active Substance: FILGRASTIM
     Indication: Prophylaxis
     Dosage: UNK ROUTE OF ADMIN (FREE TEXT): UNKNOWN ROUTE
     Route: 065
     Dates: start: 20201220
  416. ALLOPURINOL [Concomitant]
     Active Substance: ALLOPURINOL
     Indication: Prophylaxis
     Dosage: UNK
     Route: 065
     Dates: start: 20201118
  417. ALLOPURINOL [Concomitant]
     Active Substance: ALLOPURINOL
     Indication: Prophylaxis
     Dosage: UNK
     Route: 065
     Dates: start: 20201118
  418. ALLOPURINOL [Concomitant]
     Active Substance: ALLOPURINOL
     Indication: Prophylaxis
     Dosage: UNK ROUTE OF ADMIN (FREE TEXT): UNKNOWN ROUTE
     Route: 065
     Dates: start: 20201118
  419. ALLOPURINOL [Concomitant]
     Active Substance: ALLOPURINOL
     Indication: Prophylaxis
     Dosage: UNK
     Route: 065
     Dates: start: 20201118
  420. ALLOPURINOL [Concomitant]
     Active Substance: ALLOPURINOL
     Indication: Prophylaxis
     Dosage: UNK
     Route: 065
     Dates: start: 20201118
  421. ALLOPURINOL [Concomitant]
     Active Substance: ALLOPURINOL
     Dosage: UNK ROUTE OF ADMIN (FREE TEXT): UNKNOWN ROUTE
     Route: 065
     Dates: start: 20201118
  422. ALLOPURINOL [Concomitant]
     Active Substance: ALLOPURINOL
     Dosage: UNK
     Route: 065
     Dates: start: 20201118
  423. ALLOPURINOL [Concomitant]
     Active Substance: ALLOPURINOL
     Dosage: UNK ROUTE OF ADMIN (FREE TEXT): UNKNOWN ROUTE
     Route: 065
     Dates: start: 20201118
  424. ALLOPURINOL [Concomitant]
     Active Substance: ALLOPURINOL
     Dosage: UNK ROUTE OF ADMIN (FREE TEXT): UNKNOWN ROUTE
     Route: 065
     Dates: start: 20201118
  425. ALLOPURINOL [Concomitant]
     Active Substance: ALLOPURINOL
     Dosage: UNK ROUTE OF ADMIN (FREE TEXT): UNKNOWN ROUTE
     Route: 065
     Dates: start: 20201118
  426. ALLOPURINOL [Concomitant]
     Active Substance: ALLOPURINOL
     Dosage: UNK ROUTE OF ADMIN (FREE TEXT): UNKNOWN ROUTE
     Route: 065
     Dates: start: 20201118
  427. ALLOPURINOL [Concomitant]
     Active Substance: ALLOPURINOL
     Dosage: UNK ROUTE OF ADMIN (FREE TEXT): UNKNOWN ROUTE
     Route: 065
     Dates: start: 20201118
  428. ALLOPURINOL [Concomitant]
     Active Substance: ALLOPURINOL
     Dosage: UNK ROUTE OF ADMIN (FREE TEXT): UNKNOWN ROUTE
     Route: 065
     Dates: start: 20201118
  429. CHLORPHENIRAMINE MALEATE [Concomitant]
     Active Substance: CHLORPHENIRAMINE MALEATE
     Indication: Prophylaxis
     Dosage: 10 MILLIGRAM, Q3W (DOSE LAST STUDY DRUG ADMIN PRIOR AE 1260 MG START AD END DATE OF MOST RECENT DO)
     Route: 050
     Dates: start: 20201124, end: 20201124
  430. CHLORPHENIRAMINE MALEATE [Concomitant]
     Active Substance: CHLORPHENIRAMINE MALEATE
     Indication: Rash maculo-papular
     Dosage: 10 MILLIGRAM
     Route: 065
     Dates: start: 20201215, end: 20201215
  431. CHLORPHENIRAMINE MALEATE [Concomitant]
     Active Substance: CHLORPHENIRAMINE MALEATE
     Indication: Rash maculo-papular
     Dosage: 10 MILLIGRAM
     Route: 065
     Dates: start: 20210126, end: 20210126
  432. CHLORPHENIRAMINE MALEATE [Concomitant]
     Active Substance: CHLORPHENIRAMINE MALEATE
     Indication: Rash maculo-papular
     Dosage: 10 MILLIGRAM
     Route: 065
     Dates: start: 20210302, end: 20210302
  433. CHLORPHENIRAMINE MALEATE [Concomitant]
     Active Substance: CHLORPHENIRAMINE MALEATE
     Dosage: UNK
     Route: 065
     Dates: start: 20210323, end: 20210323
  434. CHLORPHENIRAMINE MALEATE [Concomitant]
     Active Substance: CHLORPHENIRAMINE MALEATE
     Dosage: 10 MILLIGRAM
     Route: 065
     Dates: start: 20210216, end: 20210216
  435. CHLORPHENIRAMINE MALEATE [Concomitant]
     Active Substance: CHLORPHENIRAMINE MALEATE
     Dosage: 10 MILLIGRAM
     Route: 065
     Dates: start: 20210119, end: 20210119
  436. CHLORPHENIRAMINE MALEATE [Concomitant]
     Active Substance: CHLORPHENIRAMINE MALEATE
     Dosage: 10 MILLIGRAM
     Route: 065
     Dates: start: 20210309, end: 20210309
  437. CHLORPHENIRAMINE MALEATE [Concomitant]
     Active Substance: CHLORPHENIRAMINE MALEATE
     Dosage: UNK
     Route: 065
     Dates: start: 20201217
  438. CHLORPHENIRAMINE MALEATE [Concomitant]
     Active Substance: CHLORPHENIRAMINE MALEATE
     Dosage: 10 MILLIGRAM
     Route: 065
     Dates: start: 20210209, end: 20210209
  439. CHLORPHENIRAMINE MALEATE [Concomitant]
     Active Substance: CHLORPHENIRAMINE MALEATE
     Dosage: UNK
     Route: 065
     Dates: start: 20201217
  440. CHLORPHENIRAMINE MALEATE [Concomitant]
     Active Substance: CHLORPHENIRAMINE MALEATE
     Dosage: UNK ROUTE OF ADMIN (FREE TEXT): UNKNOWN ROUTE
     Route: 065
     Dates: start: 20201217
  441. CHLORPHENIRAMINE MALEATE [Concomitant]
     Active Substance: CHLORPHENIRAMINE MALEATE
     Dosage: 10 MILLIGRAM
     Route: 065
     Dates: start: 20210216, end: 20210216
  442. CHLORPHENIRAMINE MALEATE [Concomitant]
     Active Substance: CHLORPHENIRAMINE MALEATE
     Dosage: 10 MG
     Route: 065
     Dates: start: 20210216, end: 20210216
  443. CHLORPHENIRAMINE MALEATE [Concomitant]
     Active Substance: CHLORPHENIRAMINE MALEATE
     Dosage: 10 MILLIGRAM ROUTE OF ADMIN (FREE TEXT): UNKNOWN ROUTE
     Route: 065
     Dates: start: 20201217
  444. CHLORPHENIRAMINE MALEATE [Concomitant]
     Active Substance: CHLORPHENIRAMINE MALEATE
     Dosage: 10 MILLIGRAM ROUTE OF ADMIN (FREE TEXT): UNKNOWN ROUTE
     Route: 065
     Dates: start: 20201217
  445. CHLORPHENIRAMINE MALEATE [Concomitant]
     Active Substance: CHLORPHENIRAMINE MALEATE
     Dosage: 10 MILLIGRAM ROUTE OF ADMIN (FREE TEXT): UNKNOWN ROUTE
     Route: 065
     Dates: start: 20201217
  446. CHLORPHENIRAMINE MALEATE [Concomitant]
     Active Substance: CHLORPHENIRAMINE MALEATE
     Dosage: 10 MILLIGRAM ROUTE OF ADMIN (FREE TEXT): UNKNOWN ROUTE
     Route: 065
     Dates: start: 20201217
  447. CHLORPHENIRAMINE MALEATE [Concomitant]
     Active Substance: CHLORPHENIRAMINE MALEATE
     Dosage: 10 MILLIGRAM ROUTE OF ADMIN (FREE TEXT): UNKNOWN ROUTE
     Route: 065
     Dates: start: 20201217
  448. CHLORPHENIRAMINE MALEATE [Concomitant]
     Active Substance: CHLORPHENIRAMINE MALEATE
     Dosage: UNK
     Route: 042
     Dates: start: 20210323, end: 20210323
  449. CHLORPHENIRAMINE MALEATE [Concomitant]
     Active Substance: CHLORPHENIRAMINE MALEATE
     Dosage: 10 MILLIGRAM
     Route: 065
     Dates: start: 20210209, end: 20210209
  450. CHLORPHENIRAMINE MALEATE [Concomitant]
     Active Substance: CHLORPHENIRAMINE MALEATE
     Dosage: 10 MILLIGRAM
     Route: 065
     Dates: start: 20210119, end: 20210119
  451. CHLORPHENIRAMINE MALEATE [Concomitant]
     Active Substance: CHLORPHENIRAMINE MALEATE
     Dosage: 10 MILLIGRAM
     Route: 065
     Dates: start: 20210309, end: 20210309
  452. CHLORPHENIRAMINE MALEATE [Concomitant]
     Active Substance: CHLORPHENIRAMINE MALEATE
     Dosage: 10 MILLIGRAM  EVERY 3 WEEK, DOSE LAST STUDY DRUG ADMIN PRIOR AE 1260 MG START AD END DATE OF MOST RE
     Route: 065
     Dates: start: 20201124, end: 20201124
  453. CHLORPHENIRAMINE MALEATE [Concomitant]
     Active Substance: CHLORPHENIRAMINE MALEATE
     Dosage: 10 MILLIGRAM
     Route: 065
     Dates: start: 20210126, end: 20210126
  454. CHLORPHENIRAMINE MALEATE [Concomitant]
     Active Substance: CHLORPHENIRAMINE MALEATE
     Dosage: 10 MILLIGRAM 10 MG ROUTE OF ADMIN (FREE TEXT): UNKNOWN ROUTE
     Route: 065
     Dates: start: 20201215, end: 20201215
  455. CHLORPHENIRAMINE MALEATE [Concomitant]
     Active Substance: CHLORPHENIRAMINE MALEATE
     Dosage: 10 MILLIGRAM ROUTE OF ADMIN (FREE TEXT): UNKNOWN ROUTE
     Route: 065
     Dates: start: 20210216, end: 20210216
  456. CHLORPHENIRAMINE MALEATE [Concomitant]
     Active Substance: CHLORPHENIRAMINE MALEATE
     Dosage: 10 MILLIGRAM 10 MG ROUTE OF ADMIN (FREE TEXT): UNKNOWN ROUTE
     Route: 065
     Dates: start: 20201217
  457. CHLORPHENIRAMINE MALEATE [Concomitant]
     Active Substance: CHLORPHENIRAMINE MALEATE
     Dosage: 10 MILLIGRAM
     Route: 065
     Dates: start: 20210302, end: 20210302
  458. CHLORPHENIRAMINE MALEATE [Concomitant]
     Active Substance: CHLORPHENIRAMINE MALEATE
     Dosage: 10 MILLIGRAM
     Route: 065
     Dates: start: 20210126, end: 20210126
  459. CHLORPHENIRAMINE MALEATE [Concomitant]
     Active Substance: CHLORPHENIRAMINE MALEATE
     Dosage: 10 MILLIGRAM ROUTE OF ADMIN (FREE TEXT): UNKNOWN ROUTE
     Route: 065
     Dates: start: 20210126, end: 20210126
  460. CHLORPHENIRAMINE MALEATE [Concomitant]
     Active Substance: CHLORPHENIRAMINE MALEATE
     Dosage: 10 MILLIGRAM
     Route: 065
     Dates: start: 20210302, end: 20210302
  461. CHLORPHENIRAMINE MALEATE [Concomitant]
     Active Substance: CHLORPHENIRAMINE MALEATE
     Dosage: 10 MILLIGRAM 10 MG ROUTE OF ADMIN (FREE TEXT): UNKNOWN ROUTE
     Route: 065
     Dates: start: 20210302, end: 20210302
  462. CHLORPHENIRAMINE MALEATE [Concomitant]
     Active Substance: CHLORPHENIRAMINE MALEATE
     Dosage: 10 MILLIGRAM
     Route: 065
     Dates: start: 20210119, end: 20210119
  463. CHLORPHENIRAMINE MALEATE [Concomitant]
     Active Substance: CHLORPHENIRAMINE MALEATE
     Dosage: 10 MILLIGRAM 10 MG ROUTE OF ADMIN (FREE TEXT): UNKNOWN ROUTE
     Route: 065
     Dates: start: 20210119, end: 20210119
  464. CHLORPHENIRAMINE MALEATE [Concomitant]
     Active Substance: CHLORPHENIRAMINE MALEATE
     Dosage: 10 MILLIGRAM
     Route: 065
     Dates: start: 20210209, end: 20210209
  465. CHLORPHENIRAMINE MALEATE [Concomitant]
     Active Substance: CHLORPHENIRAMINE MALEATE
     Dosage: 10 MILLIGRAM 10 MG ROUTE OF ADMIN (FREE TEXT): UNKNOWN ROUTE
     Route: 065
     Dates: start: 20210209, end: 20210209
  466. CHLORPHENIRAMINE MALEATE [Concomitant]
     Active Substance: CHLORPHENIRAMINE MALEATE
     Dosage: 10 MILLIGRAM
     Route: 065
     Dates: start: 20210309, end: 20210309
  467. CHLORPHENIRAMINE MALEATE [Concomitant]
     Active Substance: CHLORPHENIRAMINE MALEATE
     Dosage: 10 MILLIGRAM 10 MG ROUTE OF ADMIN (FREE TEXT): UNKNOWN ROUTE
     Route: 065
     Dates: start: 20210309, end: 20210309
  468. CHLORPHENIRAMINE MALEATE [Concomitant]
     Active Substance: CHLORPHENIRAMINE MALEATE
     Dosage: 10 MILLIGRAM
     Route: 065
     Dates: start: 20201215, end: 20201215
  469. CHLORPHENIRAMINE MALEATE [Concomitant]
     Active Substance: CHLORPHENIRAMINE MALEATE
     Dosage: 10 MILLIGRAM 10 MG ROUTE OF ADMIN (FREE TEXT): UNKNOWN ROUTE
     Route: 065
     Dates: start: 20201215, end: 20201215
  470. CHLORPHENIRAMINE MALEATE [Concomitant]
     Active Substance: CHLORPHENIRAMINE MALEATE
     Dosage: UNK
     Route: 065
     Dates: start: 20210323, end: 20210323
  471. CHLORPHENIRAMINE MALEATE [Concomitant]
     Active Substance: CHLORPHENIRAMINE MALEATE
     Dosage: UNK ROUTE OF ADMIN (FREE TEXT): UNKNOWN ROUTE
     Route: 065
     Dates: start: 20210323, end: 20210323
  472. CHLORPHENIRAMINE MALEATE [Concomitant]
     Active Substance: CHLORPHENIRAMINE MALEATE
     Dosage: 10 MILLIGRAM
     Route: 065
     Dates: start: 20210216, end: 20210216
  473. CHLORPHENIRAMINE MALEATE [Concomitant]
     Active Substance: CHLORPHENIRAMINE MALEATE
     Dosage: 10 MILLIGRAM 10 MG ROUTE OF ADMIN (FREE TEXT): UNKNOWN ROUTE
     Route: 065
     Dates: start: 20210216, end: 20210216
  474. CHLORPHENIRAMINE MALEATE [Concomitant]
     Active Substance: CHLORPHENIRAMINE MALEATE
     Dosage: 10 MILLIGRAM, EVERY 3 WEEK, DOSE LAST STUDY DRUG ADMIN PRIOR AE 1260 MG START AD END DATE OF MOST RE
     Route: 065
     Dates: start: 20201124, end: 20201124
  475. CHLORPHENIRAMINE MALEATE [Concomitant]
     Active Substance: CHLORPHENIRAMINE MALEATE
     Dosage: 10 MILLIGRAM
     Route: 065
     Dates: start: 20201124, end: 20201124
  476. CHLORPHENIRAMINE MALEATE [Concomitant]
     Active Substance: CHLORPHENIRAMINE MALEATE
     Dosage: 10 MILLIGRAM
     Route: 065
     Dates: start: 20201217
  477. CHLORPHENIRAMINE MALEATE [Concomitant]
     Active Substance: CHLORPHENIRAMINE MALEATE
     Dosage: 10 MILLIGRAM
     Route: 065
     Dates: start: 20201217
  478. CHLORPHENIRAMINE MALEATE [Concomitant]
     Active Substance: CHLORPHENIRAMINE MALEATE
     Dosage: 10 MILLIGRAM, EVERY 3 WEEK, DOSE LAST STUDY DRUG ADMIN PRIOR AE 1260 MG START AD END DATE OF MOST RE
     Route: 065
     Dates: start: 20201124, end: 20201124
  479. CHLORPHENIRAMINE MALEATE [Concomitant]
     Active Substance: CHLORPHENIRAMINE MALEATE
     Dosage: 10 MG ROUTE OF ADMIN (FREE TEXT): UNKNOWN ROUTE
     Dates: start: 20210302, end: 20210302
  480. CHLORPHENIRAMINE MALEATE [Concomitant]
     Active Substance: CHLORPHENIRAMINE MALEATE
     Dosage: 10 MG ROUTE OF ADMIN (FREE TEXT): UNKNOWN ROUTE
     Dates: start: 20201217
  481. CHLORPHENIRAMINE MALEATE [Concomitant]
     Active Substance: CHLORPHENIRAMINE MALEATE
     Dosage: 10 MG ROUTE OF ADMIN (FREE TEXT): UNKNOWN ROUTE
     Dates: start: 20210209, end: 20210209
  482. CHLORPHENIRAMINE MALEATE [Concomitant]
     Active Substance: CHLORPHENIRAMINE MALEATE
     Dosage: 10 MG ROUTE OF ADMIN (FREE TEXT): UNKNOWN ROUTE
     Dates: start: 20210119, end: 20210119
  483. CHLORPHENIRAMINE MALEATE [Concomitant]
     Active Substance: CHLORPHENIRAMINE MALEATE
     Dosage: 10 MG ROUTE OF ADMIN (FREE TEXT): UNKNOWN ROUTE
     Dates: start: 20210126, end: 20210126
  484. CHLORPHENIRAMINE MALEATE [Concomitant]
     Active Substance: CHLORPHENIRAMINE MALEATE
     Dosage: 10 MG ROUTE OF ADMIN (FREE TEXT): UNKNOWN ROUTE
     Dates: start: 20210309, end: 20210309
  485. CHLORPHENIRAMINE MALEATE [Concomitant]
     Active Substance: CHLORPHENIRAMINE MALEATE
     Dosage: 10 MG ROUTE OF ADMIN (FREE TEXT): UNKNOWN ROUTE
     Dates: start: 20201215, end: 20201215
  486. CHLORPHENIRAMINE MALEATE [Concomitant]
     Active Substance: CHLORPHENIRAMINE MALEATE
     Dosage: 10 MG ROUTE OF ADMIN (FREE TEXT): UNKNOWN ROUTE
     Dates: start: 20210216, end: 20210216
  487. CHLORPHENIRAMINE MALEATE [Concomitant]
     Active Substance: CHLORPHENIRAMINE MALEATE
     Dosage: UNK ROUTE OF ADMIN (FREE TEXT): UNKNOWN ROUTE
     Dates: start: 20210323, end: 20210323
  488. CHLORPHENIRAMINE MALEATE [Concomitant]
     Active Substance: CHLORPHENIRAMINE MALEATE
     Dosage: 10 MG ROUTE OF ADMIN (FREE TEXT): UNKNOWN ROUTE
     Dates: start: 20210309, end: 20210309
  489. CHLORPHENIRAMINE MALEATE [Concomitant]
     Active Substance: CHLORPHENIRAMINE MALEATE
     Dosage: 10 MG ROUTE OF ADMIN (FREE TEXT): UNKNOWN ROUTE
     Dates: start: 20210309, end: 20210309
  490. CHLORPHENIRAMINE MALEATE [Concomitant]
     Active Substance: CHLORPHENIRAMINE MALEATE
     Dosage: 10 MG ROUTE OF ADMIN (FREE TEXT): UNKNOWN ROUTE
     Dates: start: 20210216, end: 20210216
  491. CHLORPHENIRAMINE MALEATE [Concomitant]
     Active Substance: CHLORPHENIRAMINE MALEATE
     Dosage: 10 MG ROUTE OF ADMIN (FREE TEXT): UNKNOWN ROUTE
     Dates: start: 20210216, end: 20210216
  492. CHLORPHENIRAMINE MALEATE [Concomitant]
     Active Substance: CHLORPHENIRAMINE MALEATE
     Dosage: 10 MG, EVERY 3 WEEK, DOSE LAST STUDY DRUG ADMIN PRIOR AE 1260 MG START AD END DATE OF MOST RECENT DO
     Dates: start: 20201124, end: 20201124
  493. CHLORPHENIRAMINE MALEATE [Concomitant]
     Active Substance: CHLORPHENIRAMINE MALEATE
     Dosage: 10 MG, EVERY 3 WEEK, DOSE LAST STUDY DRUG ADMIN PRIOR AE 1260 MG START AD END DATE OF MOST RECENT DO
     Dates: start: 20201124, end: 20201124
  494. CHLORPHENIRAMINE MALEATE [Concomitant]
     Active Substance: CHLORPHENIRAMINE MALEATE
     Dosage: 10 MG ROUTE OF ADMIN (FREE TEXT): UNKNOWN ROUTE
     Dates: start: 20210302, end: 20210302
  495. CHLORPHENIRAMINE MALEATE [Concomitant]
     Active Substance: CHLORPHENIRAMINE MALEATE
     Dosage: 10 MG ROUTE OF ADMIN (FREE TEXT): UNKNOWN ROUTE
     Dates: start: 20210302, end: 20210302
  496. CHLORPHENIRAMINE MALEATE [Concomitant]
     Active Substance: CHLORPHENIRAMINE MALEATE
     Dosage: 10 MG ROUTE OF ADMIN (FREE TEXT): UNKNOWN ROUTE
     Dates: start: 20210126, end: 20210126
  497. CHLORPHENIRAMINE MALEATE [Concomitant]
     Active Substance: CHLORPHENIRAMINE MALEATE
     Dosage: 10 MG ROUTE OF ADMIN (FREE TEXT): UNKNOWN ROUTE
     Dates: start: 20210126, end: 20210126
  498. CHLORPHENIRAMINE MALEATE [Concomitant]
     Active Substance: CHLORPHENIRAMINE MALEATE
     Dosage: 10 MG ROUTE OF ADMIN (FREE TEXT): UNKNOWN ROUTE
     Dates: start: 20210119, end: 20210119
  499. CHLORPHENIRAMINE MALEATE [Concomitant]
     Active Substance: CHLORPHENIRAMINE MALEATE
     Dosage: 10 MG ROUTE OF ADMIN (FREE TEXT): UNKNOWN ROUTE
     Dates: start: 20210119, end: 20210119
  500. CHLORPHENIRAMINE MALEATE [Concomitant]
     Active Substance: CHLORPHENIRAMINE MALEATE
     Dosage: 10 MG ROUTE OF ADMIN (FREE TEXT): UNKNOWN ROUTE
     Dates: start: 20201217
  501. CHLORPHENIRAMINE MALEATE [Concomitant]
     Active Substance: CHLORPHENIRAMINE MALEATE
     Dosage: 10 MG ROUTE OF ADMIN (FREE TEXT): UNKNOWN ROUTE
     Dates: start: 20201217
  502. CHLORPHENIRAMINE MALEATE [Concomitant]
     Active Substance: CHLORPHENIRAMINE MALEATE
     Dosage: UNK ROUTE OF ADMIN (FREE TEXT): UNKNOWN ROUTE
     Dates: start: 20210323, end: 20210323
  503. CHLORPHENIRAMINE MALEATE [Concomitant]
     Active Substance: CHLORPHENIRAMINE MALEATE
     Dosage: UNK ROUTE OF ADMIN (FREE TEXT): UNKNOWN ROUTE
     Dates: start: 20210323, end: 20210323
  504. CHLORPHENIRAMINE MALEATE [Concomitant]
     Active Substance: CHLORPHENIRAMINE MALEATE
     Dosage: 10 MG ROUTE OF ADMIN (FREE TEXT): UNKNOWN ROUTE
     Dates: start: 20210209, end: 20210209
  505. CHLORPHENIRAMINE MALEATE [Concomitant]
     Active Substance: CHLORPHENIRAMINE MALEATE
     Dosage: 10 MG ROUTE OF ADMIN (FREE TEXT): UNKNOWN ROUTE
     Dates: start: 20210209, end: 20210209
  506. CHLORPHENIRAMINE MALEATE [Concomitant]
     Active Substance: CHLORPHENIRAMINE MALEATE
     Dosage: 10 MG ROUTE OF ADMIN (FREE TEXT): UNKNOWN ROUTE
     Dates: start: 20201215, end: 20201215
  507. CHLORPHENIRAMINE MALEATE [Concomitant]
     Active Substance: CHLORPHENIRAMINE MALEATE
     Dosage: 10 MG ROUTE OF ADMIN (FREE TEXT): UNKNOWN ROUTE
     Dates: start: 20201215, end: 20201215
  508. CHLORPHENIRAMINE MALEATE [Concomitant]
     Active Substance: CHLORPHENIRAMINE MALEATE
     Dosage: 10 MG ROUTE OF ADMIN (FREE TEXT): UNKNOWN ROUTE
     Dates: start: 20210119, end: 20210119
  509. CHLORPHENIRAMINE MALEATE [Concomitant]
     Active Substance: CHLORPHENIRAMINE MALEATE
     Dosage: 10 MG ROUTE OF ADMIN (FREE TEXT): UNKNOWN ROUTE
     Dates: start: 20210119, end: 20210119
  510. CHLORPHENIRAMINE MALEATE [Concomitant]
     Active Substance: CHLORPHENIRAMINE MALEATE
     Dosage: 10 MG ROUTE OF ADMIN (FREE TEXT): UNKNOWN ROUTE
     Dates: start: 20210216, end: 20210216
  511. CHLORPHENIRAMINE MALEATE [Concomitant]
     Active Substance: CHLORPHENIRAMINE MALEATE
     Dosage: 10 MG ROUTE OF ADMIN (FREE TEXT): UNKNOWN ROUTE
     Dates: start: 20210216, end: 20210216
  512. CHLORPHENIRAMINE MALEATE [Concomitant]
     Active Substance: CHLORPHENIRAMINE MALEATE
     Dosage: 10 MG ROUTE OF ADMIN (FREE TEXT): UNKNOWN ROUTE
     Dates: start: 20201217
  513. CHLORPHENIRAMINE MALEATE [Concomitant]
     Active Substance: CHLORPHENIRAMINE MALEATE
     Dosage: 10 MG ROUTE OF ADMIN (FREE TEXT): UNKNOWN ROUTE
     Dates: start: 20201217
  514. CHLORPHENIRAMINE MALEATE [Concomitant]
     Active Substance: CHLORPHENIRAMINE MALEATE
     Dosage: 10 MG ROUTE OF ADMIN (FREE TEXT): UNKNOWN ROUTE
     Dates: start: 20210302, end: 20210302
  515. CHLORPHENIRAMINE MALEATE [Concomitant]
     Active Substance: CHLORPHENIRAMINE MALEATE
     Dosage: 10 MG ROUTE OF ADMIN (FREE TEXT): UNKNOWN ROUTE
     Dates: start: 20210302, end: 20210302
  516. CHLORPHENIRAMINE MALEATE [Concomitant]
     Active Substance: CHLORPHENIRAMINE MALEATE
     Dosage: 10 MG ROUTE OF ADMIN (FREE TEXT): UNKNOWN ROUTE
     Dates: start: 20201215, end: 20201215
  517. CHLORPHENIRAMINE MALEATE [Concomitant]
     Active Substance: CHLORPHENIRAMINE MALEATE
     Dosage: 10 MG ROUTE OF ADMIN (FREE TEXT): UNKNOWN ROUTE
     Dates: start: 20201215, end: 20201215
  518. CHLORPHENIRAMINE MALEATE [Concomitant]
     Active Substance: CHLORPHENIRAMINE MALEATE
     Dosage: 10 MG, EVERY 3 WEEK, DOSE LAST STUDY DRUG ADMIN PRIOR AE 1260 MG START AD END DATE OF MOST RECENT DO
     Dates: start: 20201124, end: 20201124
  519. CHLORPHENIRAMINE MALEATE [Concomitant]
     Active Substance: CHLORPHENIRAMINE MALEATE
     Dosage: 10 MG, EVERY 3 WEEK, DOSE LAST STUDY DRUG ADMIN PRIOR AE 1260 MG START AD END DATE OF MOST RECENT DO
     Dates: start: 20201124, end: 20201124
  520. CHLORPHENIRAMINE MALEATE [Concomitant]
     Active Substance: CHLORPHENIRAMINE MALEATE
     Dosage: UNK ROUTE OF ADMIN (FREE TEXT): UNKNOWN ROUTE
     Dates: start: 20210323, end: 20210323
  521. CHLORPHENIRAMINE MALEATE [Concomitant]
     Active Substance: CHLORPHENIRAMINE MALEATE
     Dosage: UNK ROUTE OF ADMIN (FREE TEXT): UNKNOWN ROUTE
     Dates: start: 20210323, end: 20210323
  522. CHLORPHENIRAMINE MALEATE [Concomitant]
     Active Substance: CHLORPHENIRAMINE MALEATE
     Dosage: 10 MG ROUTE OF ADMIN (FREE TEXT): UNKNOWN ROUTE
     Dates: start: 20210309, end: 20210309
  523. CHLORPHENIRAMINE MALEATE [Concomitant]
     Active Substance: CHLORPHENIRAMINE MALEATE
     Dosage: 10 MG ROUTE OF ADMIN (FREE TEXT): UNKNOWN ROUTE
     Dates: start: 20210309, end: 20210309
  524. CHLORPHENIRAMINE MALEATE [Concomitant]
     Active Substance: CHLORPHENIRAMINE MALEATE
     Dosage: 10 MG ROUTE OF ADMIN (FREE TEXT): UNKNOWN ROUTE
     Dates: start: 20210209, end: 20210209
  525. CHLORPHENIRAMINE MALEATE [Concomitant]
     Active Substance: CHLORPHENIRAMINE MALEATE
     Dosage: 10 MG ROUTE OF ADMIN (FREE TEXT): UNKNOWN ROUTE
     Dates: start: 20210209, end: 20210209
  526. CHLORPHENIRAMINE MALEATE [Concomitant]
     Active Substance: CHLORPHENIRAMINE MALEATE
     Dosage: 10 MG ROUTE OF ADMIN (FREE TEXT): UNKNOWN ROUTE
     Dates: start: 20210126, end: 20210126
  527. CHLORPHENIRAMINE MALEATE [Concomitant]
     Active Substance: CHLORPHENIRAMINE MALEATE
     Dosage: 10 MG ROUTE OF ADMIN (FREE TEXT): UNKNOWN ROUTE
     Dates: start: 20210126, end: 20210126
  528. CHLORPHENIRAMINE MALEATE [Concomitant]
     Active Substance: CHLORPHENIRAMINE MALEATE
     Dosage: 10 MG, DURATION: 1 DAY;
     Dates: start: 20210206, end: 20210206
  529. CHLORPHENIRAMINE MALEATE [Concomitant]
     Active Substance: CHLORPHENIRAMINE MALEATE
     Dosage: 10 MG, DURATION: 1 DAY;
     Dates: start: 20210206, end: 20210206
  530. CHLORPHENIRAMINE MALEATE [Concomitant]
     Active Substance: CHLORPHENIRAMINE MALEATE
     Dosage: UNK
  531. CHLORPHENIRAMINE MALEATE [Concomitant]
     Active Substance: CHLORPHENIRAMINE MALEATE
     Dosage: UNK
  532. CHLORPHENIRAMINE MALEATE [Concomitant]
     Active Substance: CHLORPHENIRAMINE MALEATE
     Dosage: 10 MILLIGRAM (10 MG)
     Dates: start: 20201217
  533. CHLORPHENIRAMINE MALEATE [Concomitant]
     Active Substance: CHLORPHENIRAMINE MALEATE
     Dosage: UNK
  534. CHLORPHENIRAMINE MALEATE [Concomitant]
     Active Substance: CHLORPHENIRAMINE MALEATE
     Dosage: UNK
  535. CHLORPHENIRAMINE MALEATE [Concomitant]
     Active Substance: CHLORPHENIRAMINE MALEATE
     Indication: Rash maculo-papular
     Dosage: 10 MILLIGRAM
     Route: 065
     Dates: start: 20210126, end: 20210126
  536. CHLORPHENIRAMINE MALEATE [Concomitant]
     Active Substance: CHLORPHENIRAMINE MALEATE
     Indication: Prophylaxis
     Dosage: 10 MILLIGRAM DURATION: 1 DAY;
     Route: 065
     Dates: start: 20210323, end: 20210323
  537. CHLORPHENIRAMINE MALEATE [Concomitant]
     Active Substance: CHLORPHENIRAMINE MALEATE
     Indication: Prophylaxis
  538. CHLORPHENIRAMINE MALEATE [Concomitant]
     Active Substance: CHLORPHENIRAMINE MALEATE
     Indication: Rash maculo-papular
     Dosage: 10 MILLIGRAM
     Route: 065
     Dates: start: 20210302, end: 20210302
  539. CHLORPHENIRAMINE MALEATE [Concomitant]
     Active Substance: CHLORPHENIRAMINE MALEATE
     Indication: Prophylaxis
     Dosage: 10 MILLIGRAM
     Route: 065
     Dates: start: 20210209, end: 20210209
  540. CHLORPHENIRAMINE MALEATE [Concomitant]
     Active Substance: CHLORPHENIRAMINE MALEATE
     Indication: Rash maculo-papular
     Dosage: UNK
     Route: 065
     Dates: start: 20210323, end: 20210323
  541. CHLORPHENIRAMINE MALEATE [Concomitant]
     Active Substance: CHLORPHENIRAMINE MALEATE
     Indication: Prophylaxis
     Dosage: 10 MILLIGRAM 3 TIMES A WEEK, DOSE LAST STUDY DRUG ADMIN PRIOR AE 1260 MGSTART AD END DATE OF MOST RE
     Route: 065
     Dates: start: 20201124, end: 20201124
  542. CHLORPHENIRAMINE MALEATE [Concomitant]
     Active Substance: CHLORPHENIRAMINE MALEATE
     Indication: Rash maculo-papular
     Dosage: 10 MILLIGRAM
     Route: 065
     Dates: start: 20210216, end: 20210216
  543. CHLORPHENIRAMINE MALEATE [Concomitant]
     Active Substance: CHLORPHENIRAMINE MALEATE
     Indication: Prophylaxis
     Dosage: 10 MG ROUTE OF ADMIN (FREE TEXT): UNKNOWN ROUTE
     Route: 065
     Dates: start: 20210302, end: 20210302
  544. CHLORPHENIRAMINE MALEATE [Concomitant]
     Active Substance: CHLORPHENIRAMINE MALEATE
     Indication: Rash maculo-papular
     Dosage: 10 MILLIGRAM
     Route: 065
     Dates: start: 20210119, end: 20210119
  545. CHLORPHENIRAMINE MALEATE [Concomitant]
     Active Substance: CHLORPHENIRAMINE MALEATE
     Indication: Prophylaxis
     Dosage: 10 MILLIGRAM ROUTE OF ADMIN (FREE TEXT): UNKNOWN ROUTE
     Route: 065
     Dates: start: 20201215, end: 20201215
  546. CHLORPHENIRAMINE MALEATE [Concomitant]
     Active Substance: CHLORPHENIRAMINE MALEATE
     Indication: Rash maculo-papular
     Dosage: 10 MILLIGRAM
     Route: 065
     Dates: start: 20210309, end: 20210309
  547. CHLORPHENIRAMINE MALEATE [Concomitant]
     Active Substance: CHLORPHENIRAMINE MALEATE
     Indication: Prophylaxis
     Dosage: 10 MILLIGRAM
     Route: 065
     Dates: start: 20210209, end: 20210209
  548. CHLORPHENIRAMINE MALEATE [Concomitant]
     Active Substance: CHLORPHENIRAMINE MALEATE
     Indication: Rash maculo-papular
     Dosage: 10 MILLIGRAM
     Route: 065
     Dates: start: 20210309, end: 20210309
  549. CHLORPHENIRAMINE MALEATE [Concomitant]
     Active Substance: CHLORPHENIRAMINE MALEATE
     Dosage: 10 MILLIGRAM
     Route: 065
     Dates: start: 20201215, end: 20201215
  550. CHLORPHENIRAMINE MALEATE [Concomitant]
     Active Substance: CHLORPHENIRAMINE MALEATE
     Dosage: 10 MILLIGRAM
     Route: 065
     Dates: start: 20201215, end: 20201215
  551. CHLORPHENIRAMINE MALEATE [Concomitant]
     Active Substance: CHLORPHENIRAMINE MALEATE
     Dosage: UNK
     Route: 065
     Dates: start: 20210323, end: 20210323
  552. CHLORPHENIRAMINE MALEATE [Concomitant]
     Active Substance: CHLORPHENIRAMINE MALEATE
     Dosage: UNK
     Route: 065
     Dates: start: 20210323, end: 20210323
  553. CHLORPHENIRAMINE MALEATE [Concomitant]
     Active Substance: CHLORPHENIRAMINE MALEATE
     Dosage: 10 MILLIGRAM
     Route: 065
     Dates: start: 20210216, end: 20210216
  554. CHLORPHENIRAMINE MALEATE [Concomitant]
     Active Substance: CHLORPHENIRAMINE MALEATE
     Dosage: 10 MILLIGRAM
     Route: 065
     Dates: start: 20210216, end: 20210216
  555. CHLORPHENIRAMINE MALEATE [Concomitant]
     Active Substance: CHLORPHENIRAMINE MALEATE
     Dosage: 10 MILLIGRAM, EVERY 3 WEEKS (10 MG, EVERY 3 WEEK, DOSE LAST STUDY DRUG ADMIN PRIOR AE 1260 MG START
     Route: 065
     Dates: start: 20201124, end: 20201124
  556. CHLORPHENIRAMINE MALEATE [Concomitant]
     Active Substance: CHLORPHENIRAMINE MALEATE
     Dosage: 10 MILLIGRAM, EVERY 3 WEEKS (10 MG, EVERY 3 WEEK, DOSE LAST STUDY DRUG ADMIN PRIOR AE 1260 MG START
     Route: 065
     Dates: start: 20201124, end: 20201124
  557. CHLORPHENIRAMINE MALEATE [Concomitant]
     Active Substance: CHLORPHENIRAMINE MALEATE
     Dosage: 10 MILLIGRAM
     Route: 065
     Dates: start: 20201217
  558. CHLORPHENIRAMINE MALEATE [Concomitant]
     Active Substance: CHLORPHENIRAMINE MALEATE
     Dosage: 10 MILLIGRAM
     Route: 065
     Dates: start: 20201217
  559. CHLORPHENIRAMINE MALEATE [Concomitant]
     Active Substance: CHLORPHENIRAMINE MALEATE
     Dosage: 10 MILLIGRAM, EVERY 3 WEEKS (10 MG, EVERY 3 WEEK, DOSE LAST STUDY DRUG ADMIN PRIOR AE 1260 MG START
     Route: 065
     Dates: start: 20201124, end: 20201124
  560. CHLORPHENIRAMINE MALEATE [Concomitant]
     Active Substance: CHLORPHENIRAMINE MALEATE
     Dosage: 10 MILLIGRAM
     Route: 065
     Dates: start: 20210302, end: 20210302
  561. CHLORPHENIRAMINE MALEATE [Concomitant]
     Active Substance: CHLORPHENIRAMINE MALEATE
     Dosage: 10 MILLIGRAM
     Route: 065
     Dates: start: 20201217
  562. CHLORPHENIRAMINE MALEATE [Concomitant]
     Active Substance: CHLORPHENIRAMINE MALEATE
     Dosage: 10 MILLIGRAM
     Route: 065
     Dates: start: 20210209, end: 20210209
  563. CHLORPHENIRAMINE MALEATE [Concomitant]
     Active Substance: CHLORPHENIRAMINE MALEATE
     Dosage: 10 MILLIGRAM
     Route: 065
     Dates: start: 20210119, end: 20210119
  564. CHLORPHENIRAMINE MALEATE [Concomitant]
     Active Substance: CHLORPHENIRAMINE MALEATE
     Dosage: 10 MILLIGRAM
     Route: 065
     Dates: start: 20210126, end: 20210126
  565. CHLORPHENIRAMINE MALEATE [Concomitant]
     Active Substance: CHLORPHENIRAMINE MALEATE
     Dosage: 10 MILLIGRAM
     Route: 065
     Dates: start: 20210309, end: 20210309
  566. CHLORPHENIRAMINE MALEATE [Concomitant]
     Active Substance: CHLORPHENIRAMINE MALEATE
     Dosage: 10 MILLIGRAM
     Route: 065
     Dates: start: 20201215, end: 20201215
  567. CHLORPHENIRAMINE MALEATE [Concomitant]
     Active Substance: CHLORPHENIRAMINE MALEATE
     Dosage: UNK
     Route: 065
     Dates: start: 20210216, end: 20210216
  568. CHLORPHENIRAMINE MALEATE [Concomitant]
     Active Substance: CHLORPHENIRAMINE MALEATE
     Dosage: UNK
     Route: 065
     Dates: start: 20210323, end: 20210323
  569. CHLORPHENIRAMINE MALEATE [Concomitant]
     Active Substance: CHLORPHENIRAMINE MALEATE
     Dosage: 10 MILLIGRAM
     Route: 065
     Dates: start: 20210309, end: 20210309
  570. CHLORPHENIRAMINE MALEATE [Concomitant]
     Active Substance: CHLORPHENIRAMINE MALEATE
     Dosage: 10 MILLIGRAM
     Route: 065
     Dates: start: 20210216, end: 20210216
  571. CHLORPHENIRAMINE MALEATE [Concomitant]
     Active Substance: CHLORPHENIRAMINE MALEATE
     Dosage: 10 MILLIGRAM
     Route: 065
     Dates: start: 20210216, end: 20210216
  572. CHLORPHENIRAMINE MALEATE [Concomitant]
     Active Substance: CHLORPHENIRAMINE MALEATE
     Dosage: 10 MILLIGRAM, EVERY 3 WEEKS (10 MG, EVERY 3 WEEK, DOSE LAST STUDY DRUG ADMIN PRIOR AE 1260 MG START
     Route: 065
     Dates: start: 20201124, end: 20201124
  573. CHLORPHENIRAMINE MALEATE [Concomitant]
     Active Substance: CHLORPHENIRAMINE MALEATE
     Dosage: 10 MILLIGRAM, EVERY 3 WEEKS
     Route: 065
     Dates: start: 20201124, end: 20201124
  574. CHLORPHENIRAMINE MALEATE [Concomitant]
     Active Substance: CHLORPHENIRAMINE MALEATE
     Dosage: 10 MILLIGRAM
     Route: 065
     Dates: start: 20210302, end: 20210302
  575. CHLORPHENIRAMINE MALEATE [Concomitant]
     Active Substance: CHLORPHENIRAMINE MALEATE
     Dosage: 10 MILLIGRAM
     Route: 065
     Dates: start: 20210302, end: 20210302
  576. CHLORPHENIRAMINE MALEATE [Concomitant]
     Active Substance: CHLORPHENIRAMINE MALEATE
     Dosage: 10 MILLIGRAM
     Route: 065
     Dates: start: 20210126, end: 20210126
  577. CHLORPHENIRAMINE MALEATE [Concomitant]
     Active Substance: CHLORPHENIRAMINE MALEATE
     Dosage: 10 MILLIGRAM
     Route: 065
     Dates: start: 20210126, end: 20210126
  578. CHLORPHENIRAMINE MALEATE [Concomitant]
     Active Substance: CHLORPHENIRAMINE MALEATE
     Dosage: 10 MILLIGRAM
     Route: 065
     Dates: start: 20210119, end: 20210119
  579. CHLORPHENIRAMINE MALEATE [Concomitant]
     Active Substance: CHLORPHENIRAMINE MALEATE
     Dosage: 10 MILLIGRAM
     Route: 065
     Dates: start: 20210119, end: 20210119
  580. CHLORPHENIRAMINE MALEATE [Concomitant]
     Active Substance: CHLORPHENIRAMINE MALEATE
     Dosage: 10 MILLIGRAM
     Route: 065
     Dates: start: 20201217
  581. CHLORPHENIRAMINE MALEATE [Concomitant]
     Active Substance: CHLORPHENIRAMINE MALEATE
     Dosage: 10 MILLIGRAM
     Route: 065
     Dates: start: 20201217
  582. CHLORPHENIRAMINE MALEATE [Concomitant]
     Active Substance: CHLORPHENIRAMINE MALEATE
     Dosage: UNK
     Route: 065
     Dates: start: 20210323, end: 20210323
  583. CHLORPHENIRAMINE MALEATE [Concomitant]
     Active Substance: CHLORPHENIRAMINE MALEATE
     Dosage: UNK
     Route: 065
     Dates: start: 20210323, end: 20210323
  584. CHLORPHENIRAMINE MALEATE [Concomitant]
     Active Substance: CHLORPHENIRAMINE MALEATE
     Dosage: 10 MILLIGRAM
     Route: 065
     Dates: start: 20210209, end: 20210209
  585. CHLORPHENIRAMINE MALEATE [Concomitant]
     Active Substance: CHLORPHENIRAMINE MALEATE
     Dosage: 10 MILLIGRAM
     Route: 065
     Dates: start: 20210209, end: 20210209
  586. CHLORPHENIRAMINE MALEATE [Concomitant]
     Active Substance: CHLORPHENIRAMINE MALEATE
     Dosage: 10 MILLIGRAM
     Route: 065
     Dates: start: 20201215, end: 20201215
  587. CHLORPHENIRAMINE MALEATE [Concomitant]
     Active Substance: CHLORPHENIRAMINE MALEATE
     Dosage: 10 MILLIGRAM
     Route: 065
     Dates: start: 20201215, end: 20201215
  588. CHLORPHENIRAMINE MALEATE [Concomitant]
     Active Substance: CHLORPHENIRAMINE MALEATE
     Dosage: 10 MILLIGRAM
     Route: 065
     Dates: start: 20210119, end: 20210119
  589. CHLORPHENIRAMINE MALEATE [Concomitant]
     Active Substance: CHLORPHENIRAMINE MALEATE
     Dosage: 10 MILLIGRAM
     Route: 065
     Dates: start: 20210216, end: 20210216
  590. CHLORPHENIRAMINE MALEATE [Concomitant]
     Active Substance: CHLORPHENIRAMINE MALEATE
     Dosage: 10 MILLIGRAM
     Route: 065
     Dates: start: 20201217
  591. CHLORPHENIRAMINE MALEATE [Concomitant]
     Active Substance: CHLORPHENIRAMINE MALEATE
     Dosage: 10 MILLIGRAM
     Route: 065
     Dates: start: 20210302, end: 20210302
  592. CHLORPHENIRAMINE MALEATE [Concomitant]
     Active Substance: CHLORPHENIRAMINE MALEATE
     Dosage: 10 MILLIGRAM
     Route: 065
     Dates: start: 20201215, end: 20201215
  593. CHLORPHENIRAMINE MALEATE [Concomitant]
     Active Substance: CHLORPHENIRAMINE MALEATE
     Dosage: 10 MILLIGRAM, EVERY 3 WEEKS (10 MG, EVERY 3 WEEK, DOSE LAST STUDY DRUG ADMIN PRIOR AE 1260 MG START
     Route: 065
     Dates: start: 20201124, end: 20201124
  594. CHLORPHENIRAMINE MALEATE [Concomitant]
     Active Substance: CHLORPHENIRAMINE MALEATE
     Dosage: UNK
     Route: 065
     Dates: start: 20210323, end: 20210323
  595. CHLORPHENIRAMINE MALEATE [Concomitant]
     Active Substance: CHLORPHENIRAMINE MALEATE
     Dosage: 10 MILLIGRAM
     Route: 065
     Dates: start: 20210309, end: 20210309
  596. CHLORPHENIRAMINE MALEATE [Concomitant]
     Active Substance: CHLORPHENIRAMINE MALEATE
     Dosage: 10 MG ROUTE OF ADMIN (FREE TEXT): UNKNOWN ROUTE
     Dates: start: 20201217
  597. CHLORPHENIRAMINE MALEATE [Concomitant]
     Active Substance: CHLORPHENIRAMINE MALEATE
     Indication: Rash maculo-papular
     Dosage: UNK
     Route: 065
     Dates: start: 20201217
  598. CHLORPHENIRAMINE MALEATE [Concomitant]
     Active Substance: CHLORPHENIRAMINE MALEATE
     Indication: Prophylaxis
     Dosage: 10 MILLIGRAM
     Route: 065
     Dates: start: 20210309, end: 20210309
  599. CHLORPHENIRAMINE MALEATE [Concomitant]
     Active Substance: CHLORPHENIRAMINE MALEATE
     Indication: Rash maculo-papular
     Dosage: 10 MILLIGRAM
     Route: 065
     Dates: start: 20210209, end: 20210209
  600. CHLORPHENIRAMINE MALEATE [Concomitant]
     Active Substance: CHLORPHENIRAMINE MALEATE
     Indication: Prophylaxis
     Dosage: 10 MG ROUTE OF ADMIN (FREE TEXT): UNKNOWN ROUTE
     Route: 065
     Dates: start: 20210119, end: 20210119
  601. CHLORPHENIRAMINE MALEATE [Concomitant]
     Active Substance: CHLORPHENIRAMINE MALEATE
     Indication: Prophylaxis
     Dosage: 10 MILLIGRAM
     Route: 065
     Dates: start: 20201215, end: 20201215
  602. CHLORPHENIRAMINE MALEATE [Concomitant]
     Active Substance: CHLORPHENIRAMINE MALEATE
     Dosage: 10 MILLIGRAM
     Route: 065
     Dates: start: 20210126, end: 20210126
  603. CODEINE [Concomitant]
     Active Substance: CODEINE
     Indication: Pain
     Dosage: 30 MILLIGRAM, PRN (AS NECESSARY)
     Route: 065
     Dates: start: 20201224, end: 20201224
  604. CODEINE [Concomitant]
     Active Substance: CODEINE
     Dosage: 30 MG, AS NECESSARY ROUTE OF ADMIN (FREE TEXT): UNKNOWN ROUTE
     Route: 065
     Dates: start: 20201123
  605. CODEINE [Concomitant]
     Active Substance: CODEINE
     Indication: Pain
     Dosage: UNK
     Route: 065
     Dates: start: 20201123
  606. CODEINE [Concomitant]
     Active Substance: CODEINE
     Indication: Pain
     Dosage: 30 MILLIGRAM, PRN (AS NECESSARY)
     Route: 065
     Dates: start: 20201224, end: 20201224
  607. CODEINE [Concomitant]
     Active Substance: CODEINE
     Indication: Pain
     Dosage: UNK
     Route: 065
     Dates: start: 20201123
  608. CODEINE [Concomitant]
     Active Substance: CODEINE
     Indication: Pain
     Dosage: UNK ROUTE OF ADMIN (FREE TEXT): UNKNOWN ROUTE
     Route: 065
     Dates: start: 20201123
  609. CODEINE [Concomitant]
     Active Substance: CODEINE
     Indication: Pain
     Dosage: 30 MILLIGRAM, PRN (30 MG, AS NECESSARY)
     Route: 065
     Dates: start: 20201224, end: 20201224
  610. CODEINE [Concomitant]
     Active Substance: CODEINE
     Dosage: 30 MILLIGRAM, PRN (30 MG, AS NECESSARY ROUTE OF ADMIN (FREE TEXT): UNKNOWN ROUTE)
     Route: 065
     Dates: start: 20201224, end: 20201224
  611. CODEINE [Concomitant]
     Active Substance: CODEINE
     Dosage: UNK
     Route: 065
     Dates: start: 20201123
  612. CODEINE [Concomitant]
     Active Substance: CODEINE
     Dosage: 30 MILLIGRAM, PRN (30 MG, AS NECESSARY ROUTE OF ADMIN (FREE TEXT): UNKNOWN ROUTE)
     Route: 065
     Dates: start: 20201224, end: 20201224
  613. CODEINE [Concomitant]
     Active Substance: CODEINE
     Dosage: UNK
     Route: 065
     Dates: start: 20201123
  614. CODEINE [Concomitant]
     Active Substance: CODEINE
     Dosage: 30 MILLIGRAM, PRN
     Route: 065
     Dates: start: 20201224, end: 20201224
  615. CODEINE [Concomitant]
     Active Substance: CODEINE
     Dosage: 30 MILLIGRAM, PRN
     Route: 065
     Dates: start: 20201224, end: 20201224
  616. CODEINE [Concomitant]
     Active Substance: CODEINE
     Dosage: 30 MILLIGRAM, PRN
     Route: 065
     Dates: start: 20201224, end: 20201224
  617. CODEINE [Concomitant]
     Active Substance: CODEINE
     Dosage: 30 MILLIGRAM, PRN
     Route: 065
     Dates: start: 20201224, end: 20201224
  618. CODEINE [Concomitant]
     Active Substance: CODEINE
     Dosage: 30 MILLIGRAM, PRN
     Route: 065
     Dates: start: 20201224, end: 20201224
  619. CODEINE [Concomitant]
     Active Substance: CODEINE
     Dosage: 30 MILLIGRAM, PRN
     Route: 065
     Dates: start: 20201224, end: 20201224
  620. CODEINE [Concomitant]
     Active Substance: CODEINE
     Dosage: 30 MILLIGRAM, PRN
     Route: 065
     Dates: start: 20201224, end: 20201224
  621. CODEINE [Concomitant]
     Active Substance: CODEINE
     Dosage: 30 MILLIGRAM, PRN
     Route: 065
     Dates: start: 20201224, end: 20201224
  622. CODEINE [Concomitant]
     Active Substance: CODEINE
     Dosage: 30 MILLIGRAM, PRN
     Route: 065
     Dates: start: 20201224, end: 20201224
  623. CODEINE [Concomitant]
     Active Substance: CODEINE
     Dosage: 30 MILLIGRAM, PRN
     Route: 065
     Dates: start: 20201224, end: 20201224
  624. CODEINE [Concomitant]
     Active Substance: CODEINE
     Dosage: 30 MILLIGRAM, PRN
     Route: 065
     Dates: start: 20201224, end: 20201224
  625. CODEINE [Concomitant]
     Active Substance: CODEINE
     Dosage: 30 MILLIGRAM, PRN
     Route: 065
     Dates: start: 20201224, end: 20201224
  626. CODEINE [Concomitant]
     Active Substance: CODEINE
     Dosage: UNK
     Route: 065
     Dates: start: 20201123
  627. CODEINE [Concomitant]
     Active Substance: CODEINE
     Dosage: UNK
     Route: 065
     Dates: start: 20201123
  628. CODEINE [Concomitant]
     Active Substance: CODEINE
     Dosage: 30 MG, AS NECESSARY ROUTE OF ADMIN (FREE TEXT): UNKNOWN ROUTE
     Route: 065
     Dates: start: 20201224, end: 20201224
  629. CODEINE [Concomitant]
     Active Substance: CODEINE
     Dosage: 30 MG, AS NECESSARY ROUTE OF ADMIN (FREE TEXT): UNKNOWN ROUTE
     Route: 065
     Dates: start: 20201224, end: 20201224
  630. CODEINE [Concomitant]
     Active Substance: CODEINE
     Dosage: 30 MG, AS NECESSARY ROUTE OF ADMIN (FREE TEXT): UNKNOWN ROUTE
     Route: 065
     Dates: start: 20201224, end: 20201224
  631. CODEINE [Concomitant]
     Active Substance: CODEINE
     Dosage: 30 MG, AS NECESSARY ROUTE OF ADMIN (FREE TEXT): UNKNOWN ROUTE
     Route: 065
     Dates: start: 20201224, end: 20201224
  632. CODEINE [Concomitant]
     Active Substance: CODEINE
     Dosage: 30 MG, AS NECESSARY ROUTE OF ADMIN (FREE TEXT): UNKNOWN ROUTE
     Route: 065
     Dates: start: 20201224, end: 20201224
  633. CODEINE [Concomitant]
     Active Substance: CODEINE
     Dosage: 30 MG, AS NECESSARY ROUTE OF ADMIN (FREE TEXT): UNKNOWN ROUTE
     Route: 065
     Dates: start: 20201224, end: 20201224
  634. CODEINE [Concomitant]
     Active Substance: CODEINE
     Dosage: 30 MG, AS NECESSARY ROUTE OF ADMIN (FREE TEXT): UNKNOWN ROUTE
     Route: 065
     Dates: start: 20201224, end: 20201224
  635. CODEINE [Concomitant]
     Active Substance: CODEINE
     Dosage: 30 MG, AS NECESSARY ROUTE OF ADMIN (FREE TEXT): UNKNOWN ROUTE
     Route: 065
     Dates: start: 20201224, end: 20201224
  636. CODEINE [Concomitant]
     Active Substance: CODEINE
     Dosage: 30 MG, AS NECESSARY
     Route: 065
     Dates: start: 20201224, end: 20201224
  637. CODEINE [Concomitant]
     Active Substance: CODEINE
     Dosage: 30 MG, AS NECESSARY ROUTE OF ADMIN (FREE TEXT): UNKNOWN ROUTE
     Route: 065
     Dates: start: 20201224, end: 20201224
  638. CODEINE [Concomitant]
     Active Substance: CODEINE
     Dosage: 30 MG, AS NECESSARY ROUTE OF ADMIN (FREE TEXT): UNKNOWN ROUTE
     Route: 065
     Dates: start: 20201224, end: 20201224
  639. CODEINE [Concomitant]
     Active Substance: CODEINE
     Dosage: 30 MG, AS NECESSARY ROUTE OF ADMIN (FREE TEXT): UNKNOWN ROUTE
     Route: 065
     Dates: start: 20201224, end: 20201224
  640. CODEINE [Concomitant]
     Active Substance: CODEINE
     Dosage: 30 MG, AS NECESSARY ROUTE OF ADMIN (FREE TEXT): UNKNOWN ROUTE
     Route: 065
     Dates: start: 20201224, end: 20201224
  641. CODEINE [Concomitant]
     Active Substance: CODEINE
     Dosage: 30 MG, AS NECESSARY ROUTE OF ADMIN (FREE TEXT): UNKNOWN ROUTE
     Route: 065
     Dates: start: 20201224, end: 20201224
  642. CODEINE [Concomitant]
     Active Substance: CODEINE
     Dosage: 30 MG, AS NECESSARY ROUTE OF ADMIN (FREE TEXT): UNKNOWN ROUTE
     Route: 065
     Dates: start: 20201224, end: 20201224
  643. SARS-CoV-2 vaccine [Concomitant]
     Indication: COVID-19 immunisation
     Dosage: UNK (PFIZER)
     Route: 065
     Dates: start: 20210428, end: 20210428
  644. SARS-CoV-2 vaccine [Concomitant]
     Indication: Product used for unknown indication
     Dosage: UNK
     Route: 065
  645. SARS-CoV-2 vaccine [Concomitant]
     Indication: Product used for unknown indication
     Dosage: UNK
     Route: 065
  646. SARS-CoV-2 vaccine [Concomitant]
     Indication: Product used for unknown indication
  647. SARS-CoV-2 vaccine [Concomitant]
     Indication: Product used for unknown indication
  648. DEXAMETHASONE [Concomitant]
     Active Substance: DEXAMETHASONE
     Indication: Product used for unknown indication
     Dosage: 20 MILLIGRAM, UNK
     Route: 042
     Dates: start: 20210209, end: 20210209
  649. DEXAMETHASONE [Concomitant]
     Active Substance: DEXAMETHASONE
     Indication: Product used for unknown indication
     Dosage: 20 MILLIGRAM, UNK
     Route: 042
     Dates: start: 20210302, end: 20210302
  650. DEXAMETHASONE [Concomitant]
     Active Substance: DEXAMETHASONE
     Indication: Product used for unknown indication
     Dosage: 20 MILLIGRAM, UNK
     Route: 042
     Dates: start: 20210119, end: 20210119
  651. DEXAMETHASONE [Concomitant]
     Active Substance: DEXAMETHASONE
     Indication: Product used for unknown indication
     Dosage: 20 MG, DURATION: 1 DAY;
     Route: 042
     Dates: start: 20210323, end: 20210323
  652. DEXAMETHASONE [Concomitant]
     Active Substance: DEXAMETHASONE
     Indication: Product used for unknown indication
     Dosage: 20 MG
     Route: 065
     Dates: start: 20210323, end: 20210323
  653. DEXAMETHASONE [Concomitant]
     Active Substance: DEXAMETHASONE
     Dosage: 20 MG
     Route: 065
     Dates: start: 20210323, end: 20210323
  654. DEXAMETHASONE [Concomitant]
     Active Substance: DEXAMETHASONE
     Dosage: 20 MILLIGRAM, DURATION: 1 DAY;
     Route: 065
     Dates: start: 20210119, end: 20210119
  655. DEXAMETHASONE [Concomitant]
     Active Substance: DEXAMETHASONE
     Dosage: 20 MILLIGRAM, DURATION: 1 DAY;
     Route: 065
     Dates: start: 20210209, end: 20210209
  656. DEXAMETHASONE [Concomitant]
     Active Substance: DEXAMETHASONE
     Dosage: 20 MILLIGRAM, DURATION: 1 DAY;
     Route: 065
     Dates: start: 20210302, end: 20210302
  657. DEXAMETHASONE [Concomitant]
     Active Substance: DEXAMETHASONE
     Dosage: 20 MG
     Route: 065
     Dates: start: 20210323, end: 20210323
  658. DEXAMETHASONE [Concomitant]
     Active Substance: DEXAMETHASONE
     Dosage: 20 MILLIGRAM,DURATION: 1 DAY
     Route: 065
     Dates: start: 20210119, end: 20210119
  659. DEXAMETHASONE [Concomitant]
     Active Substance: DEXAMETHASONE
     Dosage: 20 MILLIGRAM,DURATION: 1 DAY
     Route: 065
     Dates: start: 20210119, end: 20210119
  660. DEXAMETHASONE [Concomitant]
     Active Substance: DEXAMETHASONE
     Dosage: 20 MILLIGRAM,DURATION: 1 DAY
     Route: 065
     Dates: start: 20210209, end: 20210209
  661. DEXAMETHASONE [Concomitant]
     Active Substance: DEXAMETHASONE
     Dosage: 20 MILLIGRAM, DURATION: 1 DAY
     Route: 065
     Dates: start: 20210209, end: 20210209
  662. DEXAMETHASONE [Concomitant]
     Active Substance: DEXAMETHASONE
     Dosage: 20 MILLIGRAM, DURATION: 1 DAY
     Route: 065
     Dates: start: 20210302, end: 20210302
  663. DEXAMETHASONE [Concomitant]
     Active Substance: DEXAMETHASONE
     Dosage: 20 MILLIGRAM, DURATION: 1 DAY
     Route: 065
     Dates: start: 20210302, end: 20210302
  664. DEXAMETHASONE [Concomitant]
     Active Substance: DEXAMETHASONE
     Dosage: 20 MG
     Route: 065
     Dates: start: 20210323, end: 20210323
  665. DEXAMETHASONE [Concomitant]
     Active Substance: DEXAMETHASONE
     Dosage: 20 MG
     Route: 065
     Dates: start: 20210323, end: 20210323
  666. DEXAMETHASONE [Concomitant]
     Active Substance: DEXAMETHASONE
     Dosage: 20 MG
     Route: 065
     Dates: start: 20210323, end: 20210323
  667. DEXAMETHASONE [Concomitant]
     Active Substance: DEXAMETHASONE
     Dosage: 20 MILLIGRAM, DURATION: 1 DAY
     Route: 065
     Dates: start: 20210209, end: 20210209
  668. DEXAMETHASONE [Concomitant]
     Active Substance: DEXAMETHASONE
     Dosage: 20 MILLIGRAM, DURATION: 1 DAY
     Route: 065
     Dates: start: 20210119, end: 20210119
  669. DEXAMETHASONE [Concomitant]
     Active Substance: DEXAMETHASONE
     Dosage: 20 MILLIGRAM
     Route: 065
     Dates: start: 20210119, end: 20210119
  670. DEXAMETHASONE [Concomitant]
     Active Substance: DEXAMETHASONE
     Dosage: 20 MILLIGRAM
     Route: 065
     Dates: start: 20210119, end: 20210119
  671. DEXAMETHASONE [Concomitant]
     Active Substance: DEXAMETHASONE
     Dosage: 20 MILLIGRAM, DURATION: 1 DAY
     Route: 065
     Dates: start: 20210323, end: 20210323
  672. DEXAMETHASONE [Concomitant]
     Active Substance: DEXAMETHASONE
     Dosage: 20 MILLIGRAM
     Route: 065
     Dates: start: 20200323, end: 20200323
  673. DEXAMETHASONE [Concomitant]
     Active Substance: DEXAMETHASONE
     Dosage: 20 MILLIGRAM
     Route: 065
     Dates: start: 20210209, end: 20210209
  674. DEXAMETHASONE [Concomitant]
     Active Substance: DEXAMETHASONE
     Dosage: 20 MILLIGRAM
     Route: 065
     Dates: start: 20210209, end: 20210209
  675. DEXAMETHASONE [Concomitant]
     Active Substance: DEXAMETHASONE
     Dosage: 20 MILLIGRAM, DURATION: 1 DAY
     Route: 065
     Dates: start: 20210302, end: 20210302
  676. DEXAMETHASONE [Concomitant]
     Active Substance: DEXAMETHASONE
     Dosage: 20 MILLIGRAM
     Route: 065
     Dates: start: 20210302, end: 20210302
  677. DEXAMETHASONE [Concomitant]
     Active Substance: DEXAMETHASONE
     Dosage: 20 MILLIGRAM
     Route: 065
     Dates: start: 20210119, end: 20210119
  678. DEXAMETHASONE [Concomitant]
     Active Substance: DEXAMETHASONE
     Dosage: 20 MILLIGRAM, DURATION: 1 DAY
     Route: 065
     Dates: start: 20210323, end: 20210323
  679. DEXAMETHASONE [Concomitant]
     Active Substance: DEXAMETHASONE
     Dosage: 20 MILLIGRAM
     Route: 065
     Dates: start: 20210302, end: 20210302
  680. DEXAMETHASONE [Concomitant]
     Active Substance: DEXAMETHASONE
     Dosage: 20 MILLIGRAM
     Route: 065
     Dates: start: 20210209, end: 20210209
  681. DEXAMETHASONE [Concomitant]
     Active Substance: DEXAMETHASONE
     Dosage: 20 MILLIGRAM
     Route: 065
     Dates: start: 20210302, end: 20210302
  682. DEXAMETHASONE [Concomitant]
     Active Substance: DEXAMETHASONE
     Dosage: 20 MILLIGRAM (20 MG ROUTE OF ADMIN (FREE TEXT): UNKNOWN ROUTE )
     Route: 065
     Dates: start: 20210302, end: 20210302
  683. DEXAMETHASONE [Concomitant]
     Active Substance: DEXAMETHASONE
     Dosage: 20 MILLIGRAM (20 MG ROUTE OF ADMIN (FREE TEXT): UNKNOWN ROUTE )
     Route: 065
     Dates: start: 20210302, end: 20210302
  684. DEXAMETHASONE [Concomitant]
     Active Substance: DEXAMETHASONE
     Dosage: 20 MILLIGRAM (20 MG ROUTE OF ADMIN (FREE TEXT): UNKNOWN ROUTE )
     Route: 065
     Dates: start: 20210209, end: 20210209
  685. DEXAMETHASONE [Concomitant]
     Active Substance: DEXAMETHASONE
     Dosage: 20 MILLIGRAM (20 MG ROUTE OF ADMIN (FREE TEXT): UNKNOWN ROUTE )
     Route: 065
     Dates: start: 20210209, end: 20210209
  686. DEXAMETHASONE [Concomitant]
     Active Substance: DEXAMETHASONE
     Dosage: 20 MILLIGRAM
     Route: 065
     Dates: start: 20210119, end: 20210119
  687. DEXAMETHASONE [Concomitant]
     Active Substance: DEXAMETHASONE
     Dosage: 20 MILLIGRAM
     Route: 065
     Dates: start: 20210119, end: 20210119
  688. DEXAMETHASONE [Concomitant]
     Active Substance: DEXAMETHASONE
     Dosage: 20 MILLIGRAM (20 MG ROUTE OF ADMIN (FREE TEXT): UNKNOWN ROUTE )
     Route: 065
     Dates: start: 20210209, end: 20210209
  689. DEXAMETHASONE [Concomitant]
     Active Substance: DEXAMETHASONE
     Dosage: 20 MILLIGRAM (20 MG ROUTE OF ADMIN (FREE TEXT): UNKNOWN ROUTE )
     Route: 065
     Dates: start: 20210209, end: 20210209
  690. DEXAMETHASONE [Concomitant]
     Active Substance: DEXAMETHASONE
     Dosage: 20 MG
     Route: 065
     Dates: start: 20210323, end: 20210323
  691. DEXAMETHASONE [Concomitant]
     Active Substance: DEXAMETHASONE
     Dosage: 20 MG
     Route: 065
     Dates: start: 20210323, end: 20210323
  692. DEXAMETHASONE [Concomitant]
     Active Substance: DEXAMETHASONE
     Dosage: 20 MILLIGRAM (20 MG ROUTE OF ADMIN (FREE TEXT): UNKNOWN ROUTE )
     Route: 065
     Dates: start: 20210302, end: 20210302
  693. DEXAMETHASONE [Concomitant]
     Active Substance: DEXAMETHASONE
     Dosage: 20 MILLIGRAM (20 MG ROUTE OF ADMIN (FREE TEXT): UNKNOWN ROUTE )
     Route: 065
     Dates: start: 20210302, end: 20210302
  694. DEXAMETHASONE [Concomitant]
     Active Substance: DEXAMETHASONE
     Dosage: 20 MILLIGRAM (20 MG ROUTE OF ADMIN (FREE TEXT): UNKNOWN ROUTE )
     Route: 065
     Dates: start: 20210119, end: 20210119
  695. DEXAMETHASONE [Concomitant]
     Active Substance: DEXAMETHASONE
     Dosage: 20 MILLIGRAM (20 MG ROUTE OF ADMIN (FREE TEXT): UNKNOWN ROUTE )
     Route: 065
     Dates: start: 20210209, end: 20210209
  696. DEXAMETHASONE [Concomitant]
     Active Substance: DEXAMETHASONE
     Dosage: 20 MILLIGRAM (20 MG ROUTE OF ADMIN (FREE TEXT): UNKNOWN ROUTE )
     Route: 065
     Dates: start: 20210119, end: 20210119
  697. DEXAMETHASONE [Concomitant]
     Active Substance: DEXAMETHASONE
     Dosage: 20 MILLIGRAM (20 MG ROUTE OF ADMIN (FREE TEXT): UNKNOWN ROUTE )
     Route: 065
     Dates: start: 20210209, end: 20210209
  698. DEXAMETHASONE [Concomitant]
     Active Substance: DEXAMETHASONE
     Dosage: 20 MG ROUTE OF ADMIN (FREE TEXT): UNKNOWN ROUTE
     Dates: start: 20210119, end: 20210119
  699. DEXAMETHASONE [Concomitant]
     Active Substance: DEXAMETHASONE
     Dosage: 20 MG
     Dates: start: 20210209, end: 20210209
  700. DEXAMETHASONE [Concomitant]
     Active Substance: DEXAMETHASONE
     Dosage: 20 MG
     Dates: start: 20210302, end: 20210302
  701. DEXAMETHASONE [Concomitant]
     Active Substance: DEXAMETHASONE
     Dosage: 20 MG ROUTE OF ADMIN (FREE TEXT): UNKNOWN ROUTE
     Dates: start: 20210323, end: 20210323
  702. DEXAMETHASONE [Concomitant]
     Active Substance: DEXAMETHASONE
     Dosage: 20 MG
     Dates: start: 20210119, end: 20210119
  703. DEXAMETHASONE [Concomitant]
     Active Substance: DEXAMETHASONE
     Dosage: 20 MG ROUTE OF ADMIN (FREE TEXT): UNKNOWN ROUTE
     Dates: start: 20210119, end: 20210119
  704. DEXAMETHASONE [Concomitant]
     Active Substance: DEXAMETHASONE
     Dosage: 20 MG
     Dates: start: 20210209, end: 20210209
  705. DEXAMETHASONE [Concomitant]
     Active Substance: DEXAMETHASONE
     Dosage: 20 MG ROUTE OF ADMIN (FREE TEXT): UNKNOWN ROUTE
     Dates: start: 20210209, end: 20210209
  706. DEXAMETHASONE [Concomitant]
     Active Substance: DEXAMETHASONE
     Dosage: 20 MG
     Dates: start: 20210302, end: 20210302
  707. DEXAMETHASONE [Concomitant]
     Active Substance: DEXAMETHASONE
     Dosage: 20 MG ROUTE OF ADMIN (FREE TEXT): UNKNOWN ROUTE
     Dates: start: 20210302, end: 20210302
  708. DEXAMETHASONE [Concomitant]
     Active Substance: DEXAMETHASONE
     Dosage: 20 MG
     Dates: start: 20210323, end: 20210323
  709. DEXAMETHASONE [Concomitant]
     Active Substance: DEXAMETHASONE
     Dosage: 20 MG ROUTE OF ADMIN (FREE TEXT): UNKNOWN ROUTE
     Dates: start: 20210323, end: 20210323
  710. DEXAMETHASONE [Concomitant]
     Active Substance: DEXAMETHASONE
     Dosage: 20 MG ROUTE OF ADMIN (FREE TEXT): UNKNOWN ROUTE
     Dates: start: 20210323, end: 20210323
  711. DEXAMETHASONE [Concomitant]
     Active Substance: DEXAMETHASONE
     Dosage: 20 MG ROUTE OF ADMIN (FREE TEXT): UNKNOWN ROUTE
     Dates: start: 20210209, end: 20210209
  712. DEXAMETHASONE [Concomitant]
     Active Substance: DEXAMETHASONE
     Dosage: 20 MG ROUTE OF ADMIN (FREE TEXT): UNKNOWN ROUTE
     Dates: start: 20210119, end: 20210119
  713. DEXAMETHASONE [Concomitant]
     Active Substance: DEXAMETHASONE
     Dosage: 20 MG ROUTE OF ADMIN (FREE TEXT): UNKNOWN ROUTE
     Dates: start: 20210302, end: 20210302
  714. DEXAMETHASONE [Concomitant]
     Active Substance: DEXAMETHASONE
     Dosage: 20 MG ROUTE OF ADMIN (FREE TEXT): UNKNOWN ROUTE
     Dates: start: 20210119, end: 20210119
  715. DEXAMETHASONE [Concomitant]
     Active Substance: DEXAMETHASONE
     Dosage: 20 MG ROUTE OF ADMIN (FREE TEXT): UNKNOWN ROUTE
     Dates: start: 20210119, end: 20210119
  716. DEXAMETHASONE [Concomitant]
     Active Substance: DEXAMETHASONE
     Dosage: 20 MG ROUTE OF ADMIN (FREE TEXT): UNKNOWN ROUTE
     Dates: start: 20210323, end: 20210323
  717. DEXAMETHASONE [Concomitant]
     Active Substance: DEXAMETHASONE
     Dosage: 20 MG ROUTE OF ADMIN (FREE TEXT): UNKNOWN ROUTE
     Dates: start: 20210323, end: 20210323
  718. DEXAMETHASONE [Concomitant]
     Active Substance: DEXAMETHASONE
     Dosage: 20 MG ROUTE OF ADMIN (FREE TEXT): UNKNOWN ROUTE
     Dates: start: 20210209, end: 20210209
  719. DEXAMETHASONE [Concomitant]
     Active Substance: DEXAMETHASONE
     Dosage: 20 MG ROUTE OF ADMIN (FREE TEXT): UNKNOWN ROUTE
     Dates: start: 20210209, end: 20210209
  720. DEXAMETHASONE [Concomitant]
     Active Substance: DEXAMETHASONE
     Dosage: 20 MG ROUTE OF ADMIN (FREE TEXT): UNKNOWN ROUTE
     Dates: start: 20210302, end: 20210302
  721. DEXAMETHASONE [Concomitant]
     Active Substance: DEXAMETHASONE
     Dosage: 20 MG ROUTE OF ADMIN (FREE TEXT): UNKNOWN ROUTE
     Dates: start: 20210302, end: 20210302
  722. DEXAMETHASONE [Concomitant]
     Active Substance: DEXAMETHASONE
     Dosage: 20 MG ROUTE OF ADMIN (FREE TEXT): UNKNOWN ROUTE
     Dates: start: 20210119, end: 20210119
  723. DEXAMETHASONE [Concomitant]
     Active Substance: DEXAMETHASONE
     Dosage: 20 MG ROUTE OF ADMIN (FREE TEXT): UNKNOWN ROUTE
     Dates: start: 20210119, end: 20210119
  724. DEXAMETHASONE [Concomitant]
     Active Substance: DEXAMETHASONE
     Dosage: 20 MG ROUTE OF ADMIN (FREE TEXT): UNKNOWN ROUTE
     Dates: start: 20210323, end: 20210323
  725. DEXAMETHASONE [Concomitant]
     Active Substance: DEXAMETHASONE
     Dosage: 20 MG ROUTE OF ADMIN (FREE TEXT): UNKNOWN ROUTE
     Dates: start: 20210323, end: 20210323
  726. DEXAMETHASONE [Concomitant]
     Active Substance: DEXAMETHASONE
     Dosage: 20 MG ROUTE OF ADMIN (FREE TEXT): UNKNOWN ROUTE
     Dates: start: 20210302, end: 20210302
  727. DEXAMETHASONE [Concomitant]
     Active Substance: DEXAMETHASONE
     Dosage: 20 MG ROUTE OF ADMIN (FREE TEXT): UNKNOWN ROUTE
     Dates: start: 20210302, end: 20210302
  728. DEXAMETHASONE [Concomitant]
     Active Substance: DEXAMETHASONE
     Dosage: 20 MG ROUTE OF ADMIN (FREE TEXT): UNKNOWN ROUTE
     Dates: start: 20210209, end: 20210209
  729. DEXAMETHASONE [Concomitant]
     Active Substance: DEXAMETHASONE
     Dosage: 20 MG ROUTE OF ADMIN (FREE TEXT): UNKNOWN ROUTE
     Dates: start: 20210209, end: 20210209
  730. DEXAMETHASONE [Concomitant]
     Active Substance: DEXAMETHASONE
     Dosage: 20 MG
     Dates: start: 20210119, end: 20210119
  731. DEXAMETHASONE [Concomitant]
     Active Substance: DEXAMETHASONE
     Dosage: 20 MG
     Dates: start: 20210119, end: 20210119
  732. DEXAMETHASONE [Concomitant]
     Active Substance: DEXAMETHASONE
     Dosage: 20 MG ROUTE OF ADMIN (FREE TEXT): UNKNOWN ROUTE
     Dates: start: 20210209, end: 20210209
  733. DEXAMETHASONE [Concomitant]
     Active Substance: DEXAMETHASONE
     Dosage: 20 MG ROUTE OF ADMIN (FREE TEXT): UNKNOWN ROUTE
     Dates: start: 20210209, end: 20210209
  734. DEXAMETHASONE [Concomitant]
     Active Substance: DEXAMETHASONE
     Dosage: 20 MG ROUTE OF ADMIN (FREE TEXT): UNKNOWN ROUTE
     Dates: start: 20210323, end: 20210323
  735. DEXAMETHASONE [Concomitant]
     Active Substance: DEXAMETHASONE
     Dosage: 20 MG ROUTE OF ADMIN (FREE TEXT): UNKNOWN ROUTE
     Dates: start: 20210323, end: 20210323
  736. DEXAMETHASONE [Concomitant]
     Active Substance: DEXAMETHASONE
     Dosage: 20 MG ROUTE OF ADMIN (FREE TEXT): UNKNOWN ROUTE
     Dates: start: 20210302, end: 20210302
  737. DEXAMETHASONE [Concomitant]
     Active Substance: DEXAMETHASONE
     Dosage: 20 MG ROUTE OF ADMIN (FREE TEXT): UNKNOWN ROUTE
     Dates: start: 20210302, end: 20210302
  738. DEXAMETHASONE [Concomitant]
     Active Substance: DEXAMETHASONE
     Dosage: 20 MG ROUTE OF ADMIN (FREE TEXT): UNKNOWN ROUTE
     Dates: start: 20210119, end: 20210119
  739. DEXAMETHASONE [Concomitant]
     Active Substance: DEXAMETHASONE
     Dosage: 20 MG ROUTE OF ADMIN (FREE TEXT): UNKNOWN ROUTE
     Dates: start: 20210209, end: 20210209
  740. DEXAMETHASONE [Concomitant]
     Active Substance: DEXAMETHASONE
     Dosage: 20 MG ROUTE OF ADMIN (FREE TEXT): UNKNOWN ROUTE
     Dates: start: 20210119, end: 20210119
  741. DEXAMETHASONE [Concomitant]
     Active Substance: DEXAMETHASONE
     Dosage: 20 MG ROUTE OF ADMIN (FREE TEXT): UNKNOWN ROUTE
     Dates: start: 20210209, end: 20210209
  742. DEXAMETHASONE [Concomitant]
     Active Substance: DEXAMETHASONE
     Dosage: 20 MG ROUTE OF ADMIN (FREE TEXT): UNKNOWN ROUTE
     Dates: start: 20210119, end: 20210119
  743. DEXAMETHASONE [Concomitant]
     Active Substance: DEXAMETHASONE
     Dosage: 20 MG ROUTE OF ADMIN (FREE TEXT): UNKNOWN ROUTE
     Dates: start: 20210119, end: 20210119
  744. DEXAMETHASONE [Concomitant]
     Active Substance: DEXAMETHASONE
     Dosage: 20 MG
     Dates: start: 20210209, end: 20210209
  745. DEXAMETHASONE [Concomitant]
     Active Substance: DEXAMETHASONE
     Dosage: 20 MG
     Dates: start: 20210209, end: 20210209
  746. DEXAMETHASONE [Concomitant]
     Active Substance: DEXAMETHASONE
     Dosage: 20 MG
     Dates: start: 20210323, end: 20210323
  747. DEXAMETHASONE [Concomitant]
     Active Substance: DEXAMETHASONE
     Dosage: 20 MG ROUTE OF ADMIN (FREE TEXT): UNKNOWN ROUTE
     Dates: start: 20210119, end: 20210119
  748. DEXAMETHASONE [Concomitant]
     Active Substance: DEXAMETHASONE
     Dosage: 20 MG ROUTE OF ADMIN (FREE TEXT): UNKNOWN ROUTE
     Dates: start: 20210119, end: 20210119
  749. DEXAMETHASONE [Concomitant]
     Active Substance: DEXAMETHASONE
     Dosage: 20 MG
     Dates: start: 20210323, end: 20210323
  750. DEXAMETHASONE [Concomitant]
     Active Substance: DEXAMETHASONE
     Dosage: 20 MG ROUTE OF ADMIN (FREE TEXT): UNKNOWN ROUTE
     Dates: start: 20210302, end: 20210302
  751. DEXAMETHASONE [Concomitant]
     Active Substance: DEXAMETHASONE
     Dosage: 20 MG ROUTE OF ADMIN (FREE TEXT): UNKNOWN ROUTE
     Dates: start: 20210302, end: 20210302
  752. DEXAMETHASONE [Concomitant]
     Active Substance: DEXAMETHASONE
     Dosage: 20 MG ROUTE OF ADMIN (FREE TEXT): UNKNOWN ROUTE
     Dates: start: 20210302, end: 20210302
  753. DEXAMETHASONE [Concomitant]
     Active Substance: DEXAMETHASONE
     Dosage: 20 MG ROUTE OF ADMIN (FREE TEXT): UNKNOWN ROUTE
     Dates: start: 20210302, end: 20210302
  754. DEXAMETHASONE [Concomitant]
     Active Substance: DEXAMETHASONE
     Dosage: 20 MG ROUTE OF ADMIN (FREE TEXT): UNKNOWN ROUTE
     Dates: start: 20210209, end: 20210209
  755. DEXAMETHASONE [Concomitant]
     Active Substance: DEXAMETHASONE
     Dosage: 20 MG ROUTE OF ADMIN (FREE TEXT): UNKNOWN ROUTE
     Dates: start: 20210209, end: 20210209
  756. DEXAMETHASONE [Concomitant]
     Active Substance: DEXAMETHASONE
     Dosage: 20 MG ROUTE OF ADMIN (FREE TEXT): UNKNOWN ROUTE
     Dates: start: 20210302, end: 20210302
  757. DEXAMETHASONE [Concomitant]
     Active Substance: DEXAMETHASONE
     Dosage: 20 MG ROUTE OF ADMIN (FREE TEXT): UNKNOWN ROUTE
     Dates: start: 20210302, end: 20210302
  758. DEXAMETHASONE [Concomitant]
     Active Substance: DEXAMETHASONE
     Dosage: 20 MG ROUTE OF ADMIN (FREE TEXT): UNKNOWN ROUTE
     Dates: start: 20210323, end: 20210323
  759. DEXAMETHASONE [Concomitant]
     Active Substance: DEXAMETHASONE
     Dosage: 20 MG ROUTE OF ADMIN (FREE TEXT): UNKNOWN ROUTE
     Dates: start: 20210323, end: 20210323
  760. DEXAMETHASONE [Concomitant]
     Active Substance: DEXAMETHASONE
     Dosage: 20 MG ROUTE OF ADMIN (FREE TEXT): UNKNOWN ROUTE
     Dates: start: 20210209, end: 20210209
  761. DEXAMETHASONE [Concomitant]
     Active Substance: DEXAMETHASONE
     Dosage: 20 MG ROUTE OF ADMIN (FREE TEXT): UNKNOWN ROUTE
     Dates: start: 20210209, end: 20210209
  762. DEXAMETHASONE [Concomitant]
     Active Substance: DEXAMETHASONE
     Dosage: 20 MG ROUTE OF ADMIN (FREE TEXT): UNKNOWN ROUTE
     Dates: start: 20210119, end: 20210119
  763. DEXAMETHASONE [Concomitant]
     Active Substance: DEXAMETHASONE
     Dosage: 20 MG ROUTE OF ADMIN (FREE TEXT): UNKNOWN ROUTE
     Dates: start: 20210119, end: 20210119
  764. DEXAMETHASONE [Concomitant]
     Active Substance: DEXAMETHASONE
     Dosage: 20 MG ROUTE OF ADMIN (FREE TEXT): UNKNOWN ROUTE
     Dates: start: 20210302, end: 20210302
  765. DEXAMETHASONE [Concomitant]
     Active Substance: DEXAMETHASONE
     Dosage: 20 MG ROUTE OF ADMIN (FREE TEXT): UNKNOWN ROUTE
     Dates: start: 20210302, end: 20210302
  766. DEXAMETHASONE [Concomitant]
     Active Substance: DEXAMETHASONE
     Dosage: 20 MG
     Dates: start: 20210302, end: 20210302
  767. DEXAMETHASONE [Concomitant]
     Active Substance: DEXAMETHASONE
     Dosage: 20 MG
     Dates: start: 20210302, end: 20210302
  768. DEXAMETHASONE [Concomitant]
     Active Substance: DEXAMETHASONE
     Dosage: 20 MG ROUTE OF ADMIN (FREE TEXT): UNKNOWN ROUTE
     Dates: start: 20210209, end: 20210209
  769. DEXAMETHASONE [Concomitant]
     Active Substance: DEXAMETHASONE
     Dosage: 20 MG ROUTE OF ADMIN (FREE TEXT): UNKNOWN ROUTE
     Dates: start: 20210209, end: 20210209
  770. DEXAMETHASONE [Concomitant]
     Active Substance: DEXAMETHASONE
     Dosage: 20 MG ROUTE OF ADMIN (FREE TEXT): UNKNOWN ROUTE
     Dates: start: 20210323, end: 20210323
  771. DEXAMETHASONE [Concomitant]
     Active Substance: DEXAMETHASONE
     Dosage: 20 MG ROUTE OF ADMIN (FREE TEXT): UNKNOWN ROUTE
     Dates: start: 20210323, end: 20210323
  772. DEXAMETHASONE [Concomitant]
     Active Substance: DEXAMETHASONE
     Dosage: 20 MG ROUTE OF ADMIN (FREE TEXT): UNKNOWN ROUTE
     Dates: start: 20210119, end: 20210119
  773. DEXAMETHASONE [Concomitant]
     Active Substance: DEXAMETHASONE
     Dosage: 20 MG ROUTE OF ADMIN (FREE TEXT): UNKNOWN ROUTE
     Dates: start: 20210119, end: 20210119
  774. DEXAMETHASONE [Concomitant]
     Active Substance: DEXAMETHASONE
     Dosage: 20 MG ROUTE OF ADMIN (FREE TEXT): UNKNOWN ROUTE
     Dates: start: 20210323, end: 20210323
  775. DEXAMETHASONE [Concomitant]
     Active Substance: DEXAMETHASONE
     Dosage: 20 MG ROUTE OF ADMIN (FREE TEXT): UNKNOWN ROUTE
     Dates: start: 20210323, end: 20210323
  776. DEXAMETHASONE [Concomitant]
     Active Substance: DEXAMETHASONE
     Dosage: 20 MG ROUTE OF ADMIN (FREE TEXT): UNKNOWN ROUTE
     Dates: start: 20210323, end: 20210323
  777. DEXAMETHASONE [Concomitant]
     Active Substance: DEXAMETHASONE
     Dosage: 20 MG ROUTE OF ADMIN (FREE TEXT): UNKNOWN ROUTE
     Dates: start: 20210323, end: 20210323
  778. DEXAMETHASONE [Concomitant]
     Active Substance: DEXAMETHASONE
     Dosage: 20 MG ROUTE OF ADMIN (FREE TEXT): UNKNOWN ROUTE
     Dates: start: 20210119, end: 20210119
  779. DEXAMETHASONE [Concomitant]
     Active Substance: DEXAMETHASONE
     Dosage: 20 MG ROUTE OF ADMIN (FREE TEXT): UNKNOWN ROUTE
     Dates: start: 20210119, end: 20210119
  780. DEXAMETHASONE [Concomitant]
     Active Substance: DEXAMETHASONE
     Dosage: 20 MG
     Dates: start: 20210323, end: 20210323
  781. DEXAMETHASONE [Concomitant]
     Active Substance: DEXAMETHASONE
     Dosage: 20 MG
     Dates: start: 20210323, end: 20210323
  782. DEXAMETHASONE [Concomitant]
     Active Substance: DEXAMETHASONE
     Dosage: 20 MG ROUTE OF ADMIN (FREE TEXT): UNKNOWN ROUTE
     Dates: start: 20210209, end: 20210209
  783. DEXAMETHASONE [Concomitant]
     Active Substance: DEXAMETHASONE
     Dosage: 20 MG ROUTE OF ADMIN (FREE TEXT): UNKNOWN ROUTE
     Dates: start: 20210209, end: 20210209
  784. DEXAMETHASONE [Concomitant]
     Active Substance: DEXAMETHASONE
     Dosage: 20 MG ROUTE OF ADMIN (FREE TEXT): UNKNOWN ROUTE
     Dates: start: 20210119, end: 20210119
  785. DEXAMETHASONE [Concomitant]
     Active Substance: DEXAMETHASONE
     Dosage: 20 MG ROUTE OF ADMIN (FREE TEXT): UNKNOWN ROUTE
     Dates: start: 20210119, end: 20210119
  786. DEXAMETHASONE [Concomitant]
     Active Substance: DEXAMETHASONE
     Dosage: 20 MG ROUTE OF ADMIN (FREE TEXT): UNKNOWN ROUTE
     Dates: start: 20210209, end: 20210209
  787. DEXAMETHASONE [Concomitant]
     Active Substance: DEXAMETHASONE
     Dosage: 20 MG ROUTE OF ADMIN (FREE TEXT): UNKNOWN ROUTE
     Dates: start: 20210209, end: 20210209
  788. DEXAMETHASONE [Concomitant]
     Active Substance: DEXAMETHASONE
     Dosage: 20 MG
     Dates: start: 20210302, end: 20210302
  789. DEXAMETHASONE [Concomitant]
     Active Substance: DEXAMETHASONE
     Dosage: 20 MG
     Dates: start: 20210302, end: 20210302
  790. DEXAMETHASONE [Concomitant]
     Active Substance: DEXAMETHASONE
     Dosage: 20 MG ROUTE OF ADMIN (FREE TEXT): UNKNOWN ROUTE
     Dates: start: 20210323, end: 20210323
  791. DEXAMETHASONE [Concomitant]
     Active Substance: DEXAMETHASONE
     Dosage: 20 MG ROUTE OF ADMIN (FREE TEXT): UNKNOWN ROUTE
     Dates: start: 20210323, end: 20210323
  792. DEXAMETHASONE [Concomitant]
     Active Substance: DEXAMETHASONE
     Dosage: 20 MG ROUTE OF ADMIN (FREE TEXT): UNKNOWN ROUTE
     Dates: start: 20210302, end: 20210302
  793. DEXAMETHASONE [Concomitant]
     Active Substance: DEXAMETHASONE
     Dosage: 20 MG ROUTE OF ADMIN (FREE TEXT): UNKNOWN ROUTE
     Dates: start: 20210302, end: 20210302
  794. DEXAMETHASONE [Concomitant]
     Active Substance: DEXAMETHASONE
     Dosage: 20 MG ROUTE OF ADMIN (FREE TEXT): UNKNOWN ROUTE
     Dates: start: 20210209, end: 20210209
  795. DEXAMETHASONE [Concomitant]
     Active Substance: DEXAMETHASONE
     Dosage: 20 MG ROUTE OF ADMIN (FREE TEXT): UNKNOWN ROUTE
     Dates: start: 20210209, end: 20210209
  796. DEXAMETHASONE [Concomitant]
     Active Substance: DEXAMETHASONE
     Dosage: 20 MG ROUTE OF ADMIN (FREE TEXT): UNKNOWN ROUTE
     Dates: start: 20210119, end: 20210119
  797. DEXAMETHASONE [Concomitant]
     Active Substance: DEXAMETHASONE
     Dosage: 20 MG ROUTE OF ADMIN (FREE TEXT): UNKNOWN ROUTE
     Dates: start: 20210119, end: 20210119
  798. DEXAMETHASONE [Concomitant]
     Active Substance: DEXAMETHASONE
     Dosage: 20 MG ROUTE OF ADMIN (FREE TEXT): UNKNOWN ROUTE
     Dates: start: 20210323, end: 20210323
  799. DEXAMETHASONE [Concomitant]
     Active Substance: DEXAMETHASONE
     Dosage: 20 MG ROUTE OF ADMIN (FREE TEXT): UNKNOWN ROUTE
     Dates: start: 20210323, end: 20210323
  800. DEXAMETHASONE [Concomitant]
     Active Substance: DEXAMETHASONE
     Dosage: 20 MG ROUTE OF ADMIN (FREE TEXT): UNKNOWN ROUTE
     Dates: start: 20210209, end: 20210209
  801. DEXAMETHASONE [Concomitant]
     Active Substance: DEXAMETHASONE
     Dosage: 20 MG ROUTE OF ADMIN (FREE TEXT): UNKNOWN ROUTE
     Dates: start: 20210209, end: 20210209
  802. DEXAMETHASONE [Concomitant]
     Active Substance: DEXAMETHASONE
     Dosage: 20 MG ROUTE OF ADMIN (FREE TEXT): UNKNOWN ROUTE
     Dates: start: 20210323, end: 20210323
  803. DEXAMETHASONE [Concomitant]
     Active Substance: DEXAMETHASONE
     Dosage: 20 MG ROUTE OF ADMIN (FREE TEXT): UNKNOWN ROUTE
     Dates: start: 20210323, end: 20210323
  804. DEXAMETHASONE [Concomitant]
     Active Substance: DEXAMETHASONE
     Dosage: 20 MG ROUTE OF ADMIN (FREE TEXT): UNKNOWN ROUTE
     Dates: start: 20210302, end: 20210302
  805. DEXAMETHASONE [Concomitant]
     Active Substance: DEXAMETHASONE
     Dosage: 20 MG ROUTE OF ADMIN (FREE TEXT): UNKNOWN ROUTE
     Dates: start: 20210302, end: 20210302
  806. DEXAMETHASONE [Concomitant]
     Active Substance: DEXAMETHASONE
     Dosage: 20 MG ROUTE OF ADMIN (FREE TEXT): UNKNOWN ROUTE
     Dates: start: 20210119, end: 20210119
  807. DEXAMETHASONE [Concomitant]
     Active Substance: DEXAMETHASONE
     Dosage: 20 MG ROUTE OF ADMIN (FREE TEXT): UNKNOWN ROUTE
     Dates: start: 20210119, end: 20210119
  808. DEXAMETHASONE [Concomitant]
     Active Substance: DEXAMETHASONE
     Dosage: DURATION: 1 DAY;
     Dates: start: 20210323, end: 20210323
  809. DEXAMETHASONE [Concomitant]
     Active Substance: DEXAMETHASONE
     Dosage: DURATION: 1 DAY;
     Dates: start: 20210323, end: 20210323
  810. DEXAMETHASONE [Concomitant]
     Active Substance: DEXAMETHASONE
     Dosage: 20 MG ROUTE OF ADMIN (FREE TEXT): UNKNOWN ROUTE
     Dates: start: 20210323, end: 20210323
  811. DEXAMETHASONE [Concomitant]
     Active Substance: DEXAMETHASONE
     Dosage: 20 MG ROUTE OF ADMIN (FREE TEXT): UNKNOWN ROUTE
     Dates: start: 20210323, end: 20210323
  812. DEXAMETHASONE [Concomitant]
     Active Substance: DEXAMETHASONE
     Dosage: 20 MG ROUTE OF ADMIN (FREE TEXT): UNKNOWN ROUTE
     Dates: start: 20210209, end: 20210209
  813. DEXAMETHASONE [Concomitant]
     Active Substance: DEXAMETHASONE
     Dosage: 20 MG ROUTE OF ADMIN (FREE TEXT): UNKNOWN ROUTE
     Dates: start: 20210209, end: 20210209
  814. DEXAMETHASONE [Concomitant]
     Active Substance: DEXAMETHASONE
     Dosage: 20 MG ROUTE OF ADMIN (FREE TEXT): UNKNOWN ROUTE
     Dates: start: 20210119, end: 20210119
  815. DEXAMETHASONE [Concomitant]
     Active Substance: DEXAMETHASONE
     Dosage: 20 MG ROUTE OF ADMIN (FREE TEXT): UNKNOWN ROUTE
     Dates: start: 20210119, end: 20210119
  816. DEXAMETHASONE [Concomitant]
     Active Substance: DEXAMETHASONE
     Dosage: 20 MGUNK
     Dates: start: 20210323, end: 20210323
  817. DEXAMETHASONE [Concomitant]
     Active Substance: DEXAMETHASONE
     Dosage: 20 MGUNK
     Dates: start: 20210323, end: 20210323
  818. DEXAMETHASONE [Concomitant]
     Active Substance: DEXAMETHASONE
     Dosage: 20 MG ROUTE OF ADMIN (FREE TEXT): UNKNOWN ROUTE
     Dates: start: 20210302, end: 20210302
  819. DEXAMETHASONE [Concomitant]
     Active Substance: DEXAMETHASONE
     Dosage: 20 MG ROUTE OF ADMIN (FREE TEXT): UNKNOWN ROUTE
     Dates: start: 20210302, end: 20210302
  820. DEXAMETHASONE [Concomitant]
     Active Substance: DEXAMETHASONE
     Dosage: 20 MG ROUTE OF ADMIN (FREE TEXT): UNKNOWN ROUTE
     Dates: start: 20210302, end: 20210302
  821. DEXAMETHASONE [Concomitant]
     Active Substance: DEXAMETHASONE
     Dosage: 20 MG ROUTE OF ADMIN (FREE TEXT): UNKNOWN ROUTE
     Dates: start: 20210302, end: 20210302
  822. DEXAMETHASONE [Concomitant]
     Active Substance: DEXAMETHASONE
     Dosage: 20 MG
     Dates: start: 20210209, end: 20210209
  823. DEXAMETHASONE [Concomitant]
     Active Substance: DEXAMETHASONE
     Dosage: 20 MG
     Dates: start: 20210209, end: 20210209
  824. DEXAMETHASONE [Concomitant]
     Active Substance: DEXAMETHASONE
     Dosage: 20 MG ROUTE OF ADMIN (FREE TEXT): UNKNOWN ROUTE
     Dates: start: 20210323, end: 20210323
  825. DEXAMETHASONE [Concomitant]
     Active Substance: DEXAMETHASONE
     Dosage: 20 MG ROUTE OF ADMIN (FREE TEXT): UNKNOWN ROUTE
     Dates: start: 20210323, end: 20210323
  826. DEXAMETHASONE [Concomitant]
     Active Substance: DEXAMETHASONE
     Dosage: 20 MG ROUTE OF ADMIN (FREE TEXT): UNKNOWN ROUTE
     Dates: start: 20210302, end: 20210302
  827. DEXAMETHASONE [Concomitant]
     Active Substance: DEXAMETHASONE
     Dosage: 20 MG ROUTE OF ADMIN (FREE TEXT): UNKNOWN ROUTE
     Dates: start: 20210302, end: 20210302
  828. DEXAMETHASONE [Concomitant]
     Active Substance: DEXAMETHASONE
     Dosage: 20 MG
     Dates: start: 20210119, end: 20210119
  829. DEXAMETHASONE [Concomitant]
     Active Substance: DEXAMETHASONE
     Dosage: 20 MG
     Dates: start: 20210119, end: 20210119
  830. DEXAMETHASONE [Concomitant]
     Active Substance: DEXAMETHASONE
     Dosage: 20 MG, UNK
     Route: 042
     Dates: start: 20210209, end: 20210209
  831. DEXAMETHASONE [Concomitant]
     Active Substance: DEXAMETHASONE
     Dosage: 20 MG, UNK
     Route: 042
     Dates: start: 20210209, end: 20210209
  832. DEXAMETHASONE [Concomitant]
     Active Substance: DEXAMETHASONE
     Indication: Product used for unknown indication
     Dosage: 20 MILLIGRAM
     Route: 065
     Dates: start: 20210302, end: 20210302
  833. DEXAMETHASONE [Concomitant]
     Active Substance: DEXAMETHASONE
     Dosage: 20 MILLIGRAM  ROUTE OF ADMIN (FREE TEXT): UNKNOWN ROUTE
     Route: 065
     Dates: start: 20210119, end: 20210119
  834. DEXAMETHASONE [Concomitant]
     Active Substance: DEXAMETHASONE
     Indication: Product used for unknown indication
     Dosage: 20 MILLIGRAM
     Route: 065
     Dates: start: 20210119, end: 20210119
  835. DEXAMETHASONE [Concomitant]
     Active Substance: DEXAMETHASONE
     Dosage: 20 MG
     Route: 065
     Dates: start: 20210302, end: 20210302
  836. DEXAMETHASONE [Concomitant]
     Active Substance: DEXAMETHASONE
     Indication: Product used for unknown indication
     Dosage: 20 MILLIGRAM
     Route: 065
     Dates: start: 20210323, end: 20210323
  837. DEXAMETHASONE [Concomitant]
     Active Substance: DEXAMETHASONE
     Dosage: 20 MG ROUTE OF ADMIN (FREE TEXT): UNKNOWN ROUTE
     Route: 065
     Dates: start: 20210219, end: 20210219
  838. OMEPRAZOLE [Concomitant]
     Active Substance: OMEPRAZOLE
     Indication: Gastrointestinal disorder prophylaxis
     Dosage: UNK
     Route: 065
     Dates: start: 20201118
  839. OMEPRAZOLE [Concomitant]
     Active Substance: OMEPRAZOLE
     Indication: Gastrointestinal disorder prophylaxis
     Dosage: UNK
     Route: 065
     Dates: start: 20201118
  840. OMEPRAZOLE [Concomitant]
     Active Substance: OMEPRAZOLE
     Indication: Product used for unknown indication
     Dosage: UNK
     Route: 065
  841. OMEPRAZOLE [Concomitant]
     Active Substance: OMEPRAZOLE
     Indication: Product used for unknown indication
     Dosage: UNK
     Route: 065
  842. OMEPRAZOLE [Concomitant]
     Active Substance: OMEPRAZOLE
     Indication: Gastrointestinal disorder prophylaxis
     Dosage: UNK ROUTE OF ADMIN (FREE TEXT): UNKNOWN ROUTE
     Route: 065
     Dates: start: 20201118
  843. OMEPRAZOLE [Concomitant]
     Active Substance: OMEPRAZOLE
     Indication: Product used for unknown indication
     Dosage: UNK
     Route: 065
  844. OMEPRAZOLE [Concomitant]
     Active Substance: OMEPRAZOLE
     Indication: Product used for unknown indication
     Dosage: UNK
     Route: 065
  845. OMEPRAZOLE [Concomitant]
     Active Substance: OMEPRAZOLE
     Dosage: UNK
     Route: 065
  846. OMEPRAZOLE [Concomitant]
     Active Substance: OMEPRAZOLE
     Dosage: UNK
     Route: 065
  847. OMEPRAZOLE [Concomitant]
     Active Substance: OMEPRAZOLE
     Dosage: UNK
     Route: 065
  848. OMEPRAZOLE [Concomitant]
     Active Substance: OMEPRAZOLE
     Dosage: UNK
     Route: 065
  849. OMEPRAZOLE [Concomitant]
     Active Substance: OMEPRAZOLE
     Dosage: UNK
     Route: 065
  850. OMEPRAZOLE [Concomitant]
     Active Substance: OMEPRAZOLE
     Dosage: UNK
     Route: 065
  851. OMEPRAZOLE [Concomitant]
     Active Substance: OMEPRAZOLE
     Dosage: UNK
     Route: 065
  852. OMEPRAZOLE [Concomitant]
     Active Substance: OMEPRAZOLE
     Dosage: UNK
     Route: 065
  853. OMEPRAZOLE [Concomitant]
     Active Substance: OMEPRAZOLE
     Dosage: UNK
     Route: 065
  854. OMEPRAZOLE [Concomitant]
     Active Substance: OMEPRAZOLE
     Dosage: UNK
     Route: 065
  855. OMEPRAZOLE [Concomitant]
     Active Substance: OMEPRAZOLE
     Dosage: UNK
     Route: 065
  856. OMEPRAZOLE [Concomitant]
     Active Substance: OMEPRAZOLE
     Dosage: UNK
     Route: 065
  857. OMEPRAZOLE [Concomitant]
     Active Substance: OMEPRAZOLE
     Dosage: UNK ROUTE OF ADMIN (FREE TEXT): UNKNOWN ROUTE
     Route: 065
  858. OMEPRAZOLE [Concomitant]
     Active Substance: OMEPRAZOLE
     Dosage: UNK ROUTE OF ADMIN (FREE TEXT): UNKNOWN ROUTE
     Route: 065
  859. OMEPRAZOLE [Concomitant]
     Active Substance: OMEPRAZOLE
     Dosage: UNK ROUTE OF ADMIN (FREE TEXT): UNKNOWN ROUTE
     Route: 065
  860. OMEPRAZOLE [Concomitant]
     Active Substance: OMEPRAZOLE
     Dosage: UNK ROUTE OF ADMIN (FREE TEXT): UNKNOWN ROUTE
     Route: 065
  861. OMEPRAZOLE [Concomitant]
     Active Substance: OMEPRAZOLE
     Dosage: UNK ROUTE OF ADMIN (FREE TEXT): UNKNOWN ROUTE
     Route: 065
  862. OMEPRAZOLE [Concomitant]
     Active Substance: OMEPRAZOLE
     Dosage: UNK ROUTE OF ADMIN (FREE TEXT): UNKNOWN ROUTE
     Route: 065
  863. OMEPRAZOLE [Concomitant]
     Active Substance: OMEPRAZOLE
     Dosage: UNK ROUTE OF ADMIN (FREE TEXT): UNKNOWN ROUTE
     Route: 065
  864. OMEPRAZOLE [Concomitant]
     Active Substance: OMEPRAZOLE
     Dosage: UNK ROUTE OF ADMIN (FREE TEXT): UNKNOWN ROUTE
     Route: 065
  865. OMEPRAZOLE [Concomitant]
     Active Substance: OMEPRAZOLE
     Dosage: UNK ROUTE OF ADMIN (FREE TEXT): UNKNOWN ROUTE
     Route: 065
  866. OMEPRAZOLE [Concomitant]
     Active Substance: OMEPRAZOLE
     Dosage: UNK ROUTE OF ADMIN (FREE TEXT): UNKNOWN ROUTE
     Route: 065
  867. OMEPRAZOLE [Concomitant]
     Active Substance: OMEPRAZOLE
     Dosage: UNK ROUTE OF ADMIN (FREE TEXT): UNKNOWN ROUTE
     Route: 065
  868. OMEPRAZOLE [Concomitant]
     Active Substance: OMEPRAZOLE
     Dosage: UNK ROUTE OF ADMIN (FREE TEXT): UNKNOWN ROUTE
     Route: 065
  869. OMEPRAZOLE [Concomitant]
     Active Substance: OMEPRAZOLE
     Dosage: UNK ROUTE OF ADMIN (FREE TEXT): UNKNOWN ROUTE
     Route: 065
  870. OMEPRAZOLE [Concomitant]
     Active Substance: OMEPRAZOLE
     Dosage: UNK ROUTE OF ADMIN (FREE TEXT): UNKNOWN ROUTE
     Route: 065
  871. OMEPRAZOLE [Concomitant]
     Active Substance: OMEPRAZOLE
     Dosage: UNK ROUTE OF ADMIN (FREE TEXT): UNKNOWN ROUTE
     Route: 065
  872. OMEPRAZOLE [Concomitant]
     Active Substance: OMEPRAZOLE
     Dosage: UNK ROUTE OF ADMIN (FREE TEXT): UNKNOWN ROUTE
     Route: 065
  873. OMEPRAZOLE [Concomitant]
     Active Substance: OMEPRAZOLE
     Dosage: UNK
     Route: 065
  874. OMEPRAZOLE [Concomitant]
     Active Substance: OMEPRAZOLE
     Dosage: UNK
     Route: 065
  875. OMEPRAZOLE [Concomitant]
     Active Substance: OMEPRAZOLE
     Dosage: UNK
     Route: 065
  876. OMEPRAZOLE [Concomitant]
     Active Substance: OMEPRAZOLE
     Indication: Product used for unknown indication
     Dosage: UNK
     Route: 065
  877. OMEPRAZOLE [Concomitant]
     Active Substance: OMEPRAZOLE
     Indication: Gastrointestinal disorder prophylaxis
     Dosage: UNK ROUTE OF ADMIN (FREE TEXT): UNKNOWN ROUTE
     Route: 065
  878. ACETAMINOPHEN [Concomitant]
     Active Substance: ACETAMINOPHEN
     Indication: Prophylaxis
     Dosage: 1000 MILLIGRAM
     Route: 048
     Dates: start: 20201124, end: 20201124
  879. ACETAMINOPHEN [Concomitant]
     Active Substance: ACETAMINOPHEN
     Indication: Prophylaxis
     Dosage: 1000 MG
     Route: 048
     Dates: start: 20201215, end: 20201215
  880. ACETAMINOPHEN [Concomitant]
     Active Substance: ACETAMINOPHEN
     Indication: Prophylaxis
     Dosage: 1000 MG
     Route: 048
     Dates: start: 20210119, end: 20210119
  881. ACETAMINOPHEN [Concomitant]
     Active Substance: ACETAMINOPHEN
     Indication: Prophylaxis
     Dosage: UNK
     Route: 065
     Dates: start: 20201123
  882. ACETAMINOPHEN [Concomitant]
     Active Substance: ACETAMINOPHEN
     Indication: Prophylaxis
     Dosage: 100 MILLIGRAM, DURATION: 1 DAY
     Route: 065
     Dates: start: 20210126, end: 20210126
  883. ACETAMINOPHEN [Concomitant]
     Active Substance: ACETAMINOPHEN
     Dosage: 1000 MILLIGRAM
     Route: 048
     Dates: start: 20210323, end: 20210323
  884. ACETAMINOPHEN [Concomitant]
     Active Substance: ACETAMINOPHEN
     Dosage: 1000 MILLIGRAM
     Route: 048
     Dates: start: 20210302, end: 20210302
  885. ACETAMINOPHEN [Concomitant]
     Active Substance: ACETAMINOPHEN
     Dosage: 1000 MILLIGRAM
     Route: 048
     Dates: start: 20210216, end: 20210216
  886. ACETAMINOPHEN [Concomitant]
     Active Substance: ACETAMINOPHEN
     Dosage: 1000 MILLIGRAM
     Route: 048
     Dates: start: 20210209, end: 20210209
  887. ACETAMINOPHEN [Concomitant]
     Active Substance: ACETAMINOPHEN
     Dosage: 1000 MILLIGRAM
     Route: 048
     Dates: start: 20210309, end: 20210309
  888. ACETAMINOPHEN [Concomitant]
     Active Substance: ACETAMINOPHEN
     Dosage: UNK
     Route: 065
     Dates: start: 20201123
  889. ACETAMINOPHEN [Concomitant]
     Active Substance: ACETAMINOPHEN
     Dosage: 100 MILLIGRAM
     Route: 048
     Dates: start: 20210126, end: 20210126
  890. ACETAMINOPHEN [Concomitant]
     Active Substance: ACETAMINOPHEN
     Dosage: 100 MILLIGRAM
     Route: 048
     Dates: start: 20210126, end: 20210126
  891. ACETAMINOPHEN [Concomitant]
     Active Substance: ACETAMINOPHEN
     Dosage: UNK ROUTE OF ADMIN (FREE TEXT): UNKNOWN ROUTE
     Route: 065
     Dates: start: 20201123
  892. ACETAMINOPHEN [Concomitant]
     Active Substance: ACETAMINOPHEN
     Dosage: 1000 MILLIGRAM
     Route: 048
     Dates: start: 20210126, end: 20210126
  893. ACETAMINOPHEN [Concomitant]
     Active Substance: ACETAMINOPHEN
     Dosage: 1000 MILLIGRAM, DURATION: 1 DAY;
     Route: 065
     Dates: start: 20210309, end: 20210309
  894. ACETAMINOPHEN [Concomitant]
     Active Substance: ACETAMINOPHEN
     Dosage: 1000 MGUNK
     Route: 065
     Dates: start: 20210309, end: 20210309
  895. ACETAMINOPHEN [Concomitant]
     Active Substance: ACETAMINOPHEN
     Dosage: DURATION: 1 DAY; ROUTE OF ADMIN (FREE TEXT): UNKNOWN ROUTE
     Route: 065
     Dates: start: 20210309, end: 20210309
  896. ACETAMINOPHEN [Concomitant]
     Active Substance: ACETAMINOPHEN
     Dosage: 1000 MILLIGRAM
     Route: 065
     Dates: start: 20210119, end: 20210119
  897. ACETAMINOPHEN [Concomitant]
     Active Substance: ACETAMINOPHEN
     Dosage: 1000 MILLIGRAM
     Route: 065
     Dates: start: 20210126, end: 20210126
  898. ACETAMINOPHEN [Concomitant]
     Active Substance: ACETAMINOPHEN
     Dosage: 1000 MILLIGRAM
     Route: 065
     Dates: start: 20210323, end: 20210323
  899. ACETAMINOPHEN [Concomitant]
     Active Substance: ACETAMINOPHEN
     Dosage: 1000 MILLIGRAM
     Route: 065
     Dates: start: 20201124, end: 20201124
  900. ACETAMINOPHEN [Concomitant]
     Active Substance: ACETAMINOPHEN
     Dosage: 1000 MILLIGRAM
     Route: 065
     Dates: start: 20210302, end: 20210302
  901. ACETAMINOPHEN [Concomitant]
     Active Substance: ACETAMINOPHEN
     Dosage: 1000 MILLIGRAM
     Route: 065
     Dates: start: 20201215, end: 20201215
  902. ACETAMINOPHEN [Concomitant]
     Active Substance: ACETAMINOPHEN
     Dosage: UNK ROUTE OF ADMIN (FREE TEXT): UNKNOWN ROUTE
     Route: 065
     Dates: start: 20201123
  903. ACETAMINOPHEN [Concomitant]
     Active Substance: ACETAMINOPHEN
     Dosage: 100 MILLIGRAM
     Route: 065
     Dates: start: 20210126, end: 20210126
  904. ACETAMINOPHEN [Concomitant]
     Active Substance: ACETAMINOPHEN
     Dosage: 1000 MILLIGRAM
     Route: 065
     Dates: start: 20210216, end: 20210216
  905. ACETAMINOPHEN [Concomitant]
     Active Substance: ACETAMINOPHEN
     Dosage: 1000 MILLIGRAM
     Route: 065
     Dates: start: 20210209, end: 20210209
  906. ACETAMINOPHEN [Concomitant]
     Active Substance: ACETAMINOPHEN
     Dosage: 1000 MILLIGRAM, DURATION: 1 DAY;
     Route: 065
     Dates: start: 20210309, end: 20210309
  907. ACETAMINOPHEN [Concomitant]
     Active Substance: ACETAMINOPHEN
     Dosage: 1000 MILLIGRAM
     Route: 065
     Dates: start: 20210323, end: 20210323
  908. ACETAMINOPHEN [Concomitant]
     Active Substance: ACETAMINOPHEN
     Dosage: 1000 MILLIGRAM
     Route: 065
     Dates: start: 20210323, end: 20210323
  909. ACETAMINOPHEN [Concomitant]
     Active Substance: ACETAMINOPHEN
     Dosage: 1000 MILLIGRAM
     Route: 065
     Dates: start: 20210216, end: 20210216
  910. ACETAMINOPHEN [Concomitant]
     Active Substance: ACETAMINOPHEN
     Dosage: 1000 MILLIGRAM
     Route: 065
     Dates: start: 20210216, end: 20210216
  911. ACETAMINOPHEN [Concomitant]
     Active Substance: ACETAMINOPHEN
     Dosage: 1000 MILLIGRAM
     Route: 065
     Dates: start: 20201215, end: 20201215
  912. ACETAMINOPHEN [Concomitant]
     Active Substance: ACETAMINOPHEN
     Dosage: 1000 MILLIGRAM
     Route: 065
     Dates: start: 20201215, end: 20201215
  913. ACETAMINOPHEN [Concomitant]
     Active Substance: ACETAMINOPHEN
     Dosage: 1000 MILLIGRAM
     Route: 065
     Dates: start: 20210119, end: 20210119
  914. ACETAMINOPHEN [Concomitant]
     Active Substance: ACETAMINOPHEN
     Dosage: 1000 MILLIGRAM
     Route: 065
     Dates: start: 20210119, end: 20210119
  915. ACETAMINOPHEN [Concomitant]
     Active Substance: ACETAMINOPHEN
     Dosage: UNK
     Route: 065
     Dates: start: 20201123
  916. ACETAMINOPHEN [Concomitant]
     Active Substance: ACETAMINOPHEN
     Dosage: UNK ROUTE OF ADMIN (FREE TEXT): UNKNOWN ROUTE
     Route: 065
     Dates: start: 20201123
  917. ACETAMINOPHEN [Concomitant]
     Active Substance: ACETAMINOPHEN
     Dosage: 1000 MILLIGRAM
     Route: 065
     Dates: start: 20201124, end: 20201124
  918. ACETAMINOPHEN [Concomitant]
     Active Substance: ACETAMINOPHEN
     Dosage: 100 MILLIGRAM
     Route: 065
     Dates: start: 20210126, end: 20210126
  919. ACETAMINOPHEN [Concomitant]
     Active Substance: ACETAMINOPHEN
     Dosage: 1000 MILLIGRAM
     Route: 065
     Dates: start: 20201124, end: 20201124
  920. ACETAMINOPHEN [Concomitant]
     Active Substance: ACETAMINOPHEN
     Dosage: 1000 MILLIGRAM
     Route: 065
     Dates: start: 20210209, end: 20210209
  921. ACETAMINOPHEN [Concomitant]
     Active Substance: ACETAMINOPHEN
     Dosage: 1000 MG
     Route: 065
     Dates: start: 20210209, end: 20210209
  922. ACETAMINOPHEN [Concomitant]
     Active Substance: ACETAMINOPHEN
     Dosage: 100 MILLIGRAM
     Route: 065
     Dates: start: 20210126, end: 20210126
  923. ACETAMINOPHEN [Concomitant]
     Active Substance: ACETAMINOPHEN
     Dosage: 1000 MILLIGRAM
     Route: 065
     Dates: start: 20210126, end: 20210126
  924. ACETAMINOPHEN [Concomitant]
     Active Substance: ACETAMINOPHEN
     Dosage: 1000 MG, DURATION: 1 DAY ROUTE OF ADMIN (FREE TEXT): UNKNOWN ROUTE
     Route: 065
     Dates: start: 20210309, end: 20210309
  925. ACETAMINOPHEN [Concomitant]
     Active Substance: ACETAMINOPHEN
     Dosage: DURATION: 1 DAY; ROUTE OF ADMIN (FREE TEXT): UNKNOWN ROUTE
     Route: 065
     Dates: start: 20210309, end: 20210309
  926. ACETAMINOPHEN [Concomitant]
     Active Substance: ACETAMINOPHEN
     Dosage: 1000 MILLIGRAM
     Route: 065
     Dates: start: 20210302, end: 20210302
  927. ACETAMINOPHEN [Concomitant]
     Active Substance: ACETAMINOPHEN
     Dosage: 100 MILLIGRAM
     Route: 065
     Dates: start: 20210126, end: 20210126
  928. ACETAMINOPHEN [Concomitant]
     Active Substance: ACETAMINOPHEN
     Dosage: 100 MG
     Route: 048
     Dates: start: 20210126, end: 20210126
  929. ACETAMINOPHEN [Concomitant]
     Active Substance: ACETAMINOPHEN
     Dosage: 1000 MG
     Route: 048
     Dates: start: 20210126, end: 20210126
  930. ACETAMINOPHEN [Concomitant]
     Active Substance: ACETAMINOPHEN
     Dosage: 1000 MG
     Dates: start: 20210126, end: 20210126
  931. ACETAMINOPHEN [Concomitant]
     Active Substance: ACETAMINOPHEN
     Dosage: 1000 MG
     Dates: start: 20210126, end: 20210126
  932. ACETAMINOPHEN [Concomitant]
     Active Substance: ACETAMINOPHEN
     Dosage: 1000 MG
     Dates: start: 20210119, end: 20210119
  933. ACETAMINOPHEN [Concomitant]
     Active Substance: ACETAMINOPHEN
     Dosage: 1000 MG ROUTE OF ADMIN (FREE TEXT): UNKNOWN ROUTE
     Dates: start: 20210126, end: 20210126
  934. ACETAMINOPHEN [Concomitant]
     Active Substance: ACETAMINOPHEN
     Dosage: 1000 MG
     Dates: start: 20210323, end: 20210323
  935. ACETAMINOPHEN [Concomitant]
     Active Substance: ACETAMINOPHEN
     Dosage: 1000 MG
     Dates: start: 20201124, end: 20201124
  936. ACETAMINOPHEN [Concomitant]
     Active Substance: ACETAMINOPHEN
     Dosage: 1000 MG
     Dates: start: 20210302, end: 20210302
  937. ACETAMINOPHEN [Concomitant]
     Active Substance: ACETAMINOPHEN
     Dosage: 1000 MG
     Dates: start: 20201215, end: 20201215
  938. ACETAMINOPHEN [Concomitant]
     Active Substance: ACETAMINOPHEN
     Dosage: 100 MG ROUTE OF ADMIN (FREE TEXT): UNKNOWN ROUTE
     Dates: start: 20210126, end: 20210126
  939. ACETAMINOPHEN [Concomitant]
     Active Substance: ACETAMINOPHEN
     Dosage: 1000 MG
     Dates: start: 20210216, end: 20210216
  940. ACETAMINOPHEN [Concomitant]
     Active Substance: ACETAMINOPHEN
     Dosage: 1000 MG
     Dates: start: 20210323, end: 20210323
  941. ACETAMINOPHEN [Concomitant]
     Active Substance: ACETAMINOPHEN
     Dosage: 1000 MG ROUTE OF ADMIN (FREE TEXT): UNKNOWN ROUTE
     Dates: start: 20210323, end: 20210323
  942. ACETAMINOPHEN [Concomitant]
     Active Substance: ACETAMINOPHEN
     Dosage: 1000 MG
     Dates: start: 20210216, end: 20210216
  943. ACETAMINOPHEN [Concomitant]
     Active Substance: ACETAMINOPHEN
     Dosage: 1000 MG ROUTE OF ADMIN (FREE TEXT): UNKNOWN ROUTE
     Dates: start: 20210216, end: 20210216
  944. ACETAMINOPHEN [Concomitant]
     Active Substance: ACETAMINOPHEN
     Dosage: 1000 MG
     Dates: start: 20201215, end: 20201215
  945. ACETAMINOPHEN [Concomitant]
     Active Substance: ACETAMINOPHEN
     Dosage: 1000 MG ROUTE OF ADMIN (FREE TEXT): UNKNOWN ROUTE
     Dates: start: 20201215, end: 20201215
  946. ACETAMINOPHEN [Concomitant]
     Active Substance: ACETAMINOPHEN
     Dosage: 1000 MG
     Dates: start: 20210119, end: 20210119
  947. ACETAMINOPHEN [Concomitant]
     Active Substance: ACETAMINOPHEN
     Dosage: 1000 MG ROUTE OF ADMIN (FREE TEXT): UNKNOWN ROUTE
     Dates: start: 20210119, end: 20210119
  948. ACETAMINOPHEN [Concomitant]
     Active Substance: ACETAMINOPHEN
     Dosage: 1000 MG
     Dates: start: 20201124, end: 20201124
  949. ACETAMINOPHEN [Concomitant]
     Active Substance: ACETAMINOPHEN
     Dosage: 100 MG ROUTE OF ADMIN (FREE TEXT): UNKNOWN ROUTE
     Dates: start: 20210126, end: 20210126
  950. ACETAMINOPHEN [Concomitant]
     Active Substance: ACETAMINOPHEN
     Dosage: 1000 MG ROUTE OF ADMIN (FREE TEXT): UNKNOWN ROUTE
     Dates: start: 20201124, end: 20201124
  951. ACETAMINOPHEN [Concomitant]
     Active Substance: ACETAMINOPHEN
     Dosage: 1000 MG ROUTE OF ADMIN (FREE TEXT): UNKNOWN ROUTE
     Dates: start: 20210209, end: 20210209
  952. ACETAMINOPHEN [Concomitant]
     Active Substance: ACETAMINOPHEN
     Dosage: 100 MG
     Dates: start: 20210126, end: 20210126
  953. ACETAMINOPHEN [Concomitant]
     Active Substance: ACETAMINOPHEN
     Dosage: 1000 MG ROUTE OF ADMIN (FREE TEXT): UNKNOWN ROUTE
     Dates: start: 20210126, end: 20210126
  954. ACETAMINOPHEN [Concomitant]
     Active Substance: ACETAMINOPHEN
     Dosage: 1000 MG
     Dates: start: 20210302, end: 20210302
  955. ACETAMINOPHEN [Concomitant]
     Active Substance: ACETAMINOPHEN
     Dosage: 100 MG ROUTE OF ADMIN (FREE TEXT): UNKNOWN ROUTE
     Dates: start: 20210126, end: 20210126
  956. ACETAMINOPHEN [Concomitant]
     Active Substance: ACETAMINOPHEN
     Dosage: 1000 MG ROUTE OF ADMIN (FREE TEXT): UNKNOWN ROUTE
     Dates: start: 20210302, end: 20210302
  957. ACETAMINOPHEN [Concomitant]
     Active Substance: ACETAMINOPHEN
     Dosage: 1000 MG ROUTE OF ADMIN (FREE TEXT): UNKNOWN ROUTE
     Dates: start: 20210119, end: 20210119
  958. ACETAMINOPHEN [Concomitant]
     Active Substance: ACETAMINOPHEN
     Dosage: 1000 MG ROUTE OF ADMIN (FREE TEXT): UNKNOWN ROUTE
     Dates: start: 20210216, end: 20210216
  959. ACETAMINOPHEN [Concomitant]
     Active Substance: ACETAMINOPHEN
     Dosage: UNK ROUTE OF ADMIN (FREE TEXT): UNKNOWN ROUTE
     Dates: start: 20201123
  960. ACETAMINOPHEN [Concomitant]
     Active Substance: ACETAMINOPHEN
     Dosage: 1000 MG ROUTE OF ADMIN (FREE TEXT): UNKNOWN ROUTE
     Dates: start: 20210323, end: 20210323
  961. ACETAMINOPHEN [Concomitant]
     Active Substance: ACETAMINOPHEN
     Dosage: 1000 MG ROUTE OF ADMIN (FREE TEXT): UNKNOWN ROUTE
     Dates: start: 20201215, end: 20201215
  962. ACETAMINOPHEN [Concomitant]
     Active Substance: ACETAMINOPHEN
     Dosage: 1000 MG ROUTE OF ADMIN (FREE TEXT): UNKNOWN ROUTE
     Dates: start: 20201124, end: 20201124
  963. ACETAMINOPHEN [Concomitant]
     Active Substance: ACETAMINOPHEN
     Dosage: 1000 MG ROUTE OF ADMIN (FREE TEXT): UNKNOWN ROUTE
     Dates: start: 20210126, end: 20210126
  964. ACETAMINOPHEN [Concomitant]
     Active Substance: ACETAMINOPHEN
     Dosage: 1000 MG ROUTE OF ADMIN (FREE TEXT): UNKNOWN ROUTE
     Dates: start: 20210302, end: 20210302
  965. ACETAMINOPHEN [Concomitant]
     Active Substance: ACETAMINOPHEN
     Dosage: 1000 MG ROUTE OF ADMIN (FREE TEXT): UNKNOWN ROUTE
     Dates: start: 20210209, end: 20210209
  966. ACETAMINOPHEN [Concomitant]
     Active Substance: ACETAMINOPHEN
     Dosage: 100 MG ROUTE OF ADMIN (FREE TEXT): UNKNOWN ROUTE
     Dates: start: 20210126, end: 20210126
  967. ACETAMINOPHEN [Concomitant]
     Active Substance: ACETAMINOPHEN
     Dosage: 1000 MG ROUTE OF ADMIN (FREE TEXT): UNKNOWN ROUTE
     Dates: start: 20210126, end: 20210126
  968. ACETAMINOPHEN [Concomitant]
     Active Substance: ACETAMINOPHEN
     Dosage: 1000 MG ROUTE OF ADMIN (FREE TEXT): UNKNOWN ROUTE
     Dates: start: 20210126, end: 20210126
  969. ACETAMINOPHEN [Concomitant]
     Active Substance: ACETAMINOPHEN
     Dosage: 1000 MG ROUTE OF ADMIN (FREE TEXT): UNKNOWN ROUTE
     Dates: start: 20210216, end: 20210216
  970. ACETAMINOPHEN [Concomitant]
     Active Substance: ACETAMINOPHEN
     Dosage: 1000 MG ROUTE OF ADMIN (FREE TEXT): UNKNOWN ROUTE
     Dates: start: 20210216, end: 20210216
  971. ACETAMINOPHEN [Concomitant]
     Active Substance: ACETAMINOPHEN
     Dosage: 1000 MG ROUTE OF ADMIN (FREE TEXT): UNKNOWN ROUTE
     Dates: start: 20210302, end: 20210302
  972. ACETAMINOPHEN [Concomitant]
     Active Substance: ACETAMINOPHEN
     Dosage: 1000 MG ROUTE OF ADMIN (FREE TEXT): UNKNOWN ROUTE
     Dates: start: 20210302, end: 20210302
  973. ACETAMINOPHEN [Concomitant]
     Active Substance: ACETAMINOPHEN
     Dosage: UNK ROUTE OF ADMIN (FREE TEXT): UNKNOWN ROUTE
     Dates: start: 20201123
  974. ACETAMINOPHEN [Concomitant]
     Active Substance: ACETAMINOPHEN
     Dosage: UNK ROUTE OF ADMIN (FREE TEXT): UNKNOWN ROUTE
     Dates: start: 20201123
  975. ACETAMINOPHEN [Concomitant]
     Active Substance: ACETAMINOPHEN
     Dosage: 1000 MG ROUTE OF ADMIN (FREE TEXT): UNKNOWN ROUTE
     Dates: start: 20210323, end: 20210323
  976. ACETAMINOPHEN [Concomitant]
     Active Substance: ACETAMINOPHEN
     Dosage: 1000 MG ROUTE OF ADMIN (FREE TEXT): UNKNOWN ROUTE
     Dates: start: 20210323, end: 20210323
  977. ACETAMINOPHEN [Concomitant]
     Active Substance: ACETAMINOPHEN
     Dosage: 1000 MG ROUTE OF ADMIN (FREE TEXT): UNKNOWN ROUTE
     Dates: start: 20201124, end: 20201124
  978. ACETAMINOPHEN [Concomitant]
     Active Substance: ACETAMINOPHEN
     Dosage: 1000 MG ROUTE OF ADMIN (FREE TEXT): UNKNOWN ROUTE
     Dates: start: 20201124, end: 20201124
  979. ACETAMINOPHEN [Concomitant]
     Active Substance: ACETAMINOPHEN
     Dosage: 1000 MG ROUTE OF ADMIN (FREE TEXT): UNKNOWN ROUTE
     Dates: start: 20210119, end: 20210119
  980. ACETAMINOPHEN [Concomitant]
     Active Substance: ACETAMINOPHEN
     Dosage: 1000 MG ROUTE OF ADMIN (FREE TEXT): UNKNOWN ROUTE
     Dates: start: 20210119, end: 20210119
  981. ACETAMINOPHEN [Concomitant]
     Active Substance: ACETAMINOPHEN
     Dosage: 1000 MG ROUTE OF ADMIN (FREE TEXT): UNKNOWN ROUTE
     Dates: start: 20201215, end: 20201215
  982. ACETAMINOPHEN [Concomitant]
     Active Substance: ACETAMINOPHEN
     Dosage: 1000 MG ROUTE OF ADMIN (FREE TEXT): UNKNOWN ROUTE
     Dates: start: 20201215, end: 20201215
  983. ACETAMINOPHEN [Concomitant]
     Active Substance: ACETAMINOPHEN
     Dosage: 1000 MG ROUTE OF ADMIN (FREE TEXT): UNKNOWN ROUTE
     Dates: start: 20210309, end: 20210309
  984. ACETAMINOPHEN [Concomitant]
     Active Substance: ACETAMINOPHEN
     Dosage: 1000 MG ROUTE OF ADMIN (FREE TEXT): UNKNOWN ROUTE
     Dates: start: 20210309, end: 20210309
  985. ACETAMINOPHEN [Concomitant]
     Active Substance: ACETAMINOPHEN
     Dosage: 1000 MG ROUTE OF ADMIN (FREE TEXT): UNKNOWN ROUTE
     Dates: start: 20210209, end: 20210209
  986. ACETAMINOPHEN [Concomitant]
     Active Substance: ACETAMINOPHEN
     Dosage: 1000 MG ROUTE OF ADMIN (FREE TEXT): UNKNOWN ROUTE
     Dates: start: 20210209, end: 20210209
  987. ACETAMINOPHEN [Concomitant]
     Active Substance: ACETAMINOPHEN
     Dosage: 100 MG ROUTE OF ADMIN (FREE TEXT): UNKNOWN ROUTE
     Dates: start: 20210126, end: 20210126
  988. ACETAMINOPHEN [Concomitant]
     Active Substance: ACETAMINOPHEN
     Dosage: 100 MG ROUTE OF ADMIN (FREE TEXT): UNKNOWN ROUTE
     Dates: start: 20210126, end: 20210126
  989. ACETAMINOPHEN [Concomitant]
     Active Substance: ACETAMINOPHEN
     Dosage: 1000 MG ROUTE OF ADMIN (FREE TEXT): UNKNOWN ROUTE
     Dates: start: 20210126, end: 20210126
  990. ACETAMINOPHEN [Concomitant]
     Active Substance: ACETAMINOPHEN
     Dosage: 1000 MG ROUTE OF ADMIN (FREE TEXT): UNKNOWN ROUTE
     Dates: start: 20210126, end: 20210126
  991. ACETAMINOPHEN [Concomitant]
     Active Substance: ACETAMINOPHEN
     Dosage: 1000 MG ROUTE OF ADMIN (FREE TEXT): UNKNOWN ROUTE
     Dates: start: 20201124, end: 20201124
  992. ACETAMINOPHEN [Concomitant]
     Active Substance: ACETAMINOPHEN
     Dosage: 1000 MG ROUTE OF ADMIN (FREE TEXT): UNKNOWN ROUTE
     Dates: start: 20201124, end: 20201124
  993. ACETAMINOPHEN [Concomitant]
     Active Substance: ACETAMINOPHEN
     Dosage: 1000 MG ROUTE OF ADMIN (FREE TEXT): UNKNOWN ROUTE
     Dates: start: 20210323, end: 20210323
  994. ACETAMINOPHEN [Concomitant]
     Active Substance: ACETAMINOPHEN
     Dosage: 1000 MG ROUTE OF ADMIN (FREE TEXT): UNKNOWN ROUTE
     Dates: start: 20210323, end: 20210323
  995. ACETAMINOPHEN [Concomitant]
     Active Substance: ACETAMINOPHEN
     Dosage: 1000 MG ROUTE OF ADMIN (FREE TEXT): UNKNOWN ROUTE
     Dates: start: 20210309, end: 20210309
  996. ACETAMINOPHEN [Concomitant]
     Active Substance: ACETAMINOPHEN
     Dosage: 1000 MG ROUTE OF ADMIN (FREE TEXT): UNKNOWN ROUTE
     Dates: start: 20210309, end: 20210309
  997. ACETAMINOPHEN [Concomitant]
     Active Substance: ACETAMINOPHEN
     Dosage: 100 MG ROUTE OF ADMIN (FREE TEXT): UNKNOWN ROUTE
     Dates: start: 20210126, end: 20210126
  998. ACETAMINOPHEN [Concomitant]
     Active Substance: ACETAMINOPHEN
     Dosage: 100 MG ROUTE OF ADMIN (FREE TEXT): UNKNOWN ROUTE
     Dates: start: 20210126, end: 20210126
  999. ACETAMINOPHEN [Concomitant]
     Active Substance: ACETAMINOPHEN
     Dosage: 1000 MG ROUTE OF ADMIN (FREE TEXT): UNKNOWN ROUTE
     Dates: start: 20210119, end: 20210119
  1000. ACETAMINOPHEN [Concomitant]
     Active Substance: ACETAMINOPHEN
     Dosage: 1000 MG ROUTE OF ADMIN (FREE TEXT): UNKNOWN ROUTE
     Dates: start: 20210119, end: 20210119
  1001. ACETAMINOPHEN [Concomitant]
     Active Substance: ACETAMINOPHEN
     Dosage: 1000 MG ROUTE OF ADMIN (FREE TEXT): UNKNOWN ROUTE
     Dates: start: 20210209, end: 20210209
  1002. ACETAMINOPHEN [Concomitant]
     Active Substance: ACETAMINOPHEN
     Dosage: 1000 MG ROUTE OF ADMIN (FREE TEXT): UNKNOWN ROUTE
     Dates: start: 20210209, end: 20210209
  1003. ACETAMINOPHEN [Concomitant]
     Active Substance: ACETAMINOPHEN
     Dosage: 1000 MG ROUTE OF ADMIN (FREE TEXT): UNKNOWN ROUTE
     Dates: start: 20210216, end: 20210216
  1004. ACETAMINOPHEN [Concomitant]
     Active Substance: ACETAMINOPHEN
     Dosage: 1000 MG ROUTE OF ADMIN (FREE TEXT): UNKNOWN ROUTE
     Dates: start: 20210216, end: 20210216
  1005. ACETAMINOPHEN [Concomitant]
     Active Substance: ACETAMINOPHEN
     Dosage: UNK ROUTE OF ADMIN (FREE TEXT): UNKNOWN ROUTE
     Dates: start: 20201123
  1006. ACETAMINOPHEN [Concomitant]
     Active Substance: ACETAMINOPHEN
     Dosage: UNK ROUTE OF ADMIN (FREE TEXT): UNKNOWN ROUTE
     Dates: start: 20201123
  1007. ACETAMINOPHEN [Concomitant]
     Active Substance: ACETAMINOPHEN
     Dosage: 1000 MG ROUTE OF ADMIN (FREE TEXT): UNKNOWN ROUTE
     Dates: start: 20201215, end: 20201215
  1008. ACETAMINOPHEN [Concomitant]
     Active Substance: ACETAMINOPHEN
     Dosage: 1000 MG ROUTE OF ADMIN (FREE TEXT): UNKNOWN ROUTE
     Dates: start: 20201215, end: 20201215
  1009. ACETAMINOPHEN [Concomitant]
     Active Substance: ACETAMINOPHEN
     Dosage: 1000 MG ROUTE OF ADMIN (FREE TEXT): UNKNOWN ROUTE
     Dates: start: 20210302, end: 20210302
  1010. ACETAMINOPHEN [Concomitant]
     Active Substance: ACETAMINOPHEN
     Dosage: 1000 MG ROUTE OF ADMIN (FREE TEXT): UNKNOWN ROUTE
     Dates: start: 20210302, end: 20210302
  1011. ACETAMINOPHEN [Concomitant]
     Active Substance: ACETAMINOPHEN
     Dosage: 1000 MG, DURATION: 1 DAY
     Dates: start: 20210309, end: 20210309
  1012. ACETAMINOPHEN [Concomitant]
     Active Substance: ACETAMINOPHEN
     Dosage: 1000 MG, DURATION: 1 DAY
     Dates: start: 20210309, end: 20210309
  1013. ACETAMINOPHEN [Concomitant]
     Active Substance: ACETAMINOPHEN
     Dosage: 1000 MG, DURATION: 1 DAY
     Dates: start: 20210309, end: 20210309
  1014. ACETAMINOPHEN [Concomitant]
     Active Substance: ACETAMINOPHEN
     Dosage: 1000 MG, DURATION: 1 DAY
     Dates: start: 20210309, end: 20210309
  1015. ACETAMINOPHEN [Concomitant]
     Active Substance: ACETAMINOPHEN
     Dosage: 1000 MG
     Route: 048
     Dates: start: 20210209, end: 20210209
  1016. ACETAMINOPHEN [Concomitant]
     Active Substance: ACETAMINOPHEN
     Dosage: 1000 MG
     Dates: start: 20210323, end: 20210323
  1017. ACETAMINOPHEN [Concomitant]
     Active Substance: ACETAMINOPHEN
     Dosage: 1000 MG
     Dates: start: 20210323, end: 20210323
  1018. ACETAMINOPHEN [Concomitant]
     Active Substance: ACETAMINOPHEN
     Dosage: 1000 MG
     Route: 048
     Dates: start: 20210209, end: 20210209
  1019. ACETAMINOPHEN [Concomitant]
     Active Substance: ACETAMINOPHEN
     Dosage: 1000 MG
     Route: 048
     Dates: start: 20210216, end: 20210216
  1020. ACETAMINOPHEN [Concomitant]
     Active Substance: ACETAMINOPHEN
     Dosage: 1000 MG
     Route: 048
     Dates: start: 20210216, end: 20210216
  1021. ACETAMINOPHEN [Concomitant]
     Active Substance: ACETAMINOPHEN
     Dosage: 1000 MG
     Route: 048
     Dates: start: 20210302, end: 20210302
  1022. ACETAMINOPHEN [Concomitant]
     Active Substance: ACETAMINOPHEN
     Dosage: 1000 MG
     Route: 048
     Dates: start: 20210302, end: 20210302
  1023. ACETAMINOPHEN [Concomitant]
     Active Substance: ACETAMINOPHEN
     Dosage: 1000 MG
     Route: 048
     Dates: start: 20210309, end: 20210309
  1024. ACETAMINOPHEN [Concomitant]
     Active Substance: ACETAMINOPHEN
     Dosage: 1000 MG
     Route: 048
     Dates: start: 20210309, end: 20210309
  1025. ACETAMINOPHEN [Concomitant]
     Active Substance: ACETAMINOPHEN
     Indication: Product used for unknown indication
     Dosage: 1000 MILLIGRAM
     Route: 065
     Dates: start: 20210119, end: 20210119
  1026. ACETAMINOPHEN [Concomitant]
     Active Substance: ACETAMINOPHEN
     Dosage: 1000 MILLIGRAM
     Route: 065
     Dates: start: 20210209, end: 20210209
  1027. ACETAMINOPHEN [Concomitant]
     Active Substance: ACETAMINOPHEN
     Dosage: 1000 MILLIGRAM
     Route: 065
     Dates: start: 20201124, end: 20201124
  1028. ACETAMINOPHEN [Concomitant]
     Active Substance: ACETAMINOPHEN
     Indication: Product used for unknown indication
     Dosage: UNK ROUTE OF ADMIN (FREE TEXT): UNKNOWN ROUTE
     Route: 065
     Dates: start: 20201123, end: 20201123
  1029. ACETAMINOPHEN [Concomitant]
     Active Substance: ACETAMINOPHEN
     Dosage: 1000 MILLIGRAM
     Route: 065
     Dates: start: 20210323, end: 20210323
  1030. ACETAMINOPHEN [Concomitant]
     Active Substance: ACETAMINOPHEN
     Indication: Product used for unknown indication
     Dosage: 1000 MILLIGRAM
     Route: 065
     Dates: start: 20210126, end: 20210126
  1031. ACETAMINOPHEN [Concomitant]
     Active Substance: ACETAMINOPHEN
     Dosage: 100 MILLIGRAM
     Route: 065
     Dates: start: 20210126, end: 20210126
  1032. ACETAMINOPHEN [Concomitant]
     Active Substance: ACETAMINOPHEN
     Dosage: 1000 MILLIGRAM
     Route: 065
     Dates: start: 20210216, end: 20210216
  1033. ACETAMINOPHEN [Concomitant]
     Active Substance: ACETAMINOPHEN
     Dosage: 1000 MILLIGRAM
     Route: 065
     Dates: start: 20210309, end: 20210309
  1034. ACETAMINOPHEN [Concomitant]
     Active Substance: ACETAMINOPHEN
     Indication: Prophylaxis
     Dosage: 1000 MILLIGRAM
     Route: 065
     Dates: start: 20210323, end: 20210323
  1035. ACETAMINOPHEN [Concomitant]
     Active Substance: ACETAMINOPHEN
     Dosage: 100 MILLIGRAM
     Route: 065
     Dates: start: 20210126, end: 20210126
  1036. ACETAMINOPHEN [Concomitant]
     Active Substance: ACETAMINOPHEN
     Dosage: UNK
     Route: 065
     Dates: start: 20201215, end: 20201215
  1037. ACETAMINOPHEN [Concomitant]
     Active Substance: ACETAMINOPHEN
     Indication: Product used for unknown indication
     Dosage: 1000 MILLIGRAM
     Route: 065
     Dates: start: 20210302, end: 20210302
  1038. ACETAMINOPHEN [Concomitant]
     Active Substance: ACETAMINOPHEN
     Dosage: 1000 MILLIGRAM
     Route: 065
     Dates: start: 20210119, end: 20210119
  1039. ACETAMINOPHEN [Concomitant]
     Active Substance: ACETAMINOPHEN
     Dosage: 1000 MILLIGRAM
     Route: 065
     Dates: start: 20210209, end: 20210209
  1040. ACETAMINOPHEN [Concomitant]
     Active Substance: ACETAMINOPHEN
     Indication: Product used for unknown indication
     Dosage: 1000 MILLIGRAM
     Route: 065
     Dates: start: 20210216, end: 20210216
  1041. ACETAMINOPHEN [Concomitant]
     Active Substance: ACETAMINOPHEN
     Dosage: 1000 MILLIGRAM
     Route: 065
     Dates: start: 20210302, end: 20210302
  1042. ACETAMINOPHEN [Concomitant]
     Active Substance: ACETAMINOPHEN
     Dosage: 1000 MILLIGRAM
     Route: 065
     Dates: start: 20210119, end: 20210119
  1043. ACETAMINOPHEN [Concomitant]
     Active Substance: ACETAMINOPHEN
     Indication: Product used for unknown indication
     Dosage: 1000 MILLIGRAM
     Route: 065
     Dates: start: 20210209, end: 20210209
  1044. ACETAMINOPHEN [Concomitant]
     Active Substance: ACETAMINOPHEN
     Dosage: UNK
     Route: 065
     Dates: start: 20201123
  1045. ACETAMINOPHEN [Concomitant]
     Active Substance: ACETAMINOPHEN
     Dosage: 1000 MILLIGRAM
     Route: 065
     Dates: start: 20210126, end: 20210126
  1046. ACETAMINOPHEN [Concomitant]
     Active Substance: ACETAMINOPHEN
     Indication: Product used for unknown indication
     Dosage: 1000 MILLIGRAM, DURATION: 1 DAY;
     Route: 065
     Dates: start: 20210309, end: 20210309
  1047. ACETAMINOPHEN [Concomitant]
     Active Substance: ACETAMINOPHEN
     Dosage: 1000 MILLIGRAM
     Route: 065
     Dates: start: 20210302, end: 20210302
  1048. ACETAMINOPHEN [Concomitant]
     Active Substance: ACETAMINOPHEN
     Indication: Product used for unknown indication
     Dosage: 1000 MG
     Route: 065
     Dates: start: 20201215, end: 20201215
  1049. ACETAMINOPHEN [Concomitant]
     Active Substance: ACETAMINOPHEN
     Dosage: 1000 MG
     Route: 065
     Dates: start: 20210216, end: 20210216
  1050. PREDNISOLONE [Concomitant]
     Active Substance: PREDNISOLONE
     Indication: Diffuse large B-cell lymphoma
     Dosage: UNK
     Route: 048
     Dates: start: 20201118, end: 20201122
  1051. PREDNISOLONE [Concomitant]
     Active Substance: PREDNISOLONE
     Indication: Product used for unknown indication
     Dosage: UNK
     Route: 065
     Dates: start: 20201124
  1052. PREDNISOLONE [Concomitant]
     Active Substance: PREDNISOLONE
     Indication: Product used for unknown indication
     Dosage: UNK
     Route: 065
  1053. PREDNISOLONE [Concomitant]
     Active Substance: PREDNISOLONE
     Indication: Product used for unknown indication
  1054. SENNA [Concomitant]
     Active Substance: SENNA LEAF\SENNOSIDES\SENNOSIDES A AND B
     Indication: Constipation
     Dosage: UNK
     Route: 065
     Dates: start: 20201124
  1055. SENNA [Concomitant]
     Active Substance: SENNA LEAF\SENNOSIDES\SENNOSIDES A AND B
     Indication: Constipation
     Dosage: UNK
     Route: 065
     Dates: start: 20201124
  1056. SENNA [Concomitant]
     Active Substance: SENNA LEAF\SENNOSIDES\SENNOSIDES A AND B
     Indication: Constipation
     Dosage: UNK ROUTE OF ADMIN (FREE TEXT): UNKNOWN ROUTE
     Route: 065
     Dates: start: 20201124
  1057. SENNA [Concomitant]
     Active Substance: SENNA LEAF\SENNOSIDES\SENNOSIDES A AND B
     Indication: Constipation
     Dosage: UNK
     Route: 065
     Dates: start: 20201124
  1058. SENNA [Concomitant]
     Active Substance: SENNA LEAF\SENNOSIDES\SENNOSIDES A AND B
     Indication: Constipation
     Dosage: UNK
     Route: 065
     Dates: start: 20201124
  1059. SENNA [Concomitant]
     Active Substance: SENNA LEAF\SENNOSIDES\SENNOSIDES A AND B
     Dosage: UNK ROUTE OF ADMIN (FREE TEXT): UNKNOWN ROUTE
     Route: 065
     Dates: start: 20201124
  1060. SENNA [Concomitant]
     Active Substance: SENNA LEAF\SENNOSIDES\SENNOSIDES A AND B
     Dosage: UNK
     Route: 065
     Dates: start: 20201124
  1061. SENNA [Concomitant]
     Active Substance: SENNA LEAF\SENNOSIDES\SENNOSIDES A AND B
     Dosage: UNK ROUTE OF ADMIN (FREE TEXT): UNKNOWN ROUTE
     Route: 065
     Dates: start: 20201124
  1062. SENNA [Concomitant]
     Active Substance: SENNA LEAF\SENNOSIDES\SENNOSIDES A AND B
     Dosage: UNK ROUTE OF ADMIN (FREE TEXT): UNKNOWN ROUTE
     Route: 065
     Dates: start: 20201124
  1063. SENNA [Concomitant]
     Active Substance: SENNA LEAF\SENNOSIDES\SENNOSIDES A AND B
     Dosage: UNK ROUTE OF ADMIN (FREE TEXT): UNKNOWN ROUTE
     Route: 065
     Dates: start: 20201124
  1064. SENNA [Concomitant]
     Active Substance: SENNA LEAF\SENNOSIDES\SENNOSIDES A AND B
     Dosage: UNK ROUTE OF ADMIN (FREE TEXT): UNKNOWN ROUTE
     Route: 065
     Dates: start: 20201124
  1065. SENNA [Concomitant]
     Active Substance: SENNA LEAF\SENNOSIDES\SENNOSIDES A AND B
     Dosage: UNK ROUTE OF ADMIN (FREE TEXT): UNKNOWN ROUTE
     Route: 065
     Dates: start: 20201124
  1066. SENNA [Concomitant]
     Active Substance: SENNA LEAF\SENNOSIDES\SENNOSIDES A AND B
     Dosage: UNK ROUTE OF ADMIN (FREE TEXT): UNKNOWN ROUTE
     Route: 065
     Dates: start: 20201124
  1067. SENOKOT [Concomitant]
     Active Substance: SENNOSIDES
     Indication: Constipation
     Dosage: UNK (SENNA PODS POWDERED )
     Route: 065
  1068. SENOKOT [Concomitant]
     Active Substance: SENNOSIDES
     Indication: Constipation
     Dosage: UNK (SENNA PODS POWDERED )
     Route: 065
  1069. SENOKOT [Concomitant]
     Active Substance: SENNOSIDES
     Indication: Constipation
     Dosage: UNK
     Route: 065
  1070. SENOKOT [Concomitant]
     Active Substance: SENNOSIDES
     Indication: Constipation
     Dosage: UNK
     Route: 065
  1071. SENOKOT [Concomitant]
     Active Substance: SENNOSIDES
     Indication: Constipation
     Dosage: UNK (SENNA PODS POWDERED)
     Route: 065
     Dates: start: 20201124
  1072. SENOKOT [Concomitant]
     Active Substance: SENNOSIDES
     Dosage: UNK
     Route: 065
     Dates: start: 20201124
  1073. SENOKOT [Concomitant]
     Active Substance: SENNOSIDES
     Dosage: UNK, SENNA PODS POWDERED
     Route: 065
  1074. SENOKOT [Concomitant]
     Active Substance: SENNOSIDES
     Dosage: UNK, SENNA PODS POWDERED
     Route: 065
  1075. SENOKOT [Concomitant]
     Active Substance: SENNOSIDES
     Dosage: UNK, SENNA PODS POWDERED
     Route: 065
  1076. SENOKOT [Concomitant]
     Active Substance: SENNOSIDES
     Dosage: UNK, SENNA PODS POWDERED
     Route: 065
  1077. SENOKOT [Concomitant]
     Active Substance: SENNOSIDES
     Dosage: UNK,SENNA PODS POWDERED
     Route: 065
  1078. SENOKOT [Concomitant]
     Active Substance: SENNOSIDES
     Dosage: UNK, SENNA PODS POWDERED
     Route: 065
  1079. SENOKOT [Concomitant]
     Active Substance: SENNOSIDES
     Dosage: UNK, SENNA PODS POWDERED
     Route: 065
  1080. SENOKOT [Concomitant]
     Active Substance: SENNOSIDES
     Dosage: UNK, SENNA PODS POWDERED
     Route: 065
  1081. SENOKOT [Concomitant]
     Active Substance: SENNOSIDES
     Dosage: UNK, SENNA PODS POWDERED
     Route: 065
  1082. SENOKOT [Concomitant]
     Active Substance: SENNOSIDES
     Dosage: UNK,SENNA PODS POWDERED
     Route: 065
  1083. SENOKOT [Concomitant]
     Active Substance: SENNOSIDES
     Dosage: UNK, SENNA PODS POWDERED
     Route: 065
  1084. SENOKOT [Concomitant]
     Active Substance: SENNOSIDES
     Dosage: UNK, SENNA PODS POWDERED
     Route: 065
  1085. SENOKOT [Concomitant]
     Active Substance: SENNOSIDES
     Dosage: UNK, SENNA PODS POWDERED
     Route: 065
  1086. SENOKOT [Concomitant]
     Active Substance: SENNOSIDES
     Dosage: UNK, SENNA PODS POWDERED
     Route: 065
  1087. SENOKOT [Concomitant]
     Active Substance: SENNOSIDES
     Dosage: UNK, SENNA PODS POWDERED
     Route: 065
  1088. SENOKOT [Concomitant]
     Active Substance: SENNOSIDES
     Dosage: UNK,SENNA PODS POWDERED
     Route: 065
  1089. SENOKOT [Concomitant]
     Active Substance: SENNOSIDES
     Dosage: UNK, SENNA PODS POWDERED
     Route: 065
  1090. SENOKOT [Concomitant]
     Active Substance: SENNOSIDES
     Dosage: UNK, SENNA PODS POWDERED
     Route: 065
  1091. SENOKOT [Concomitant]
     Active Substance: SENNOSIDES
     Dosage: UNK
     Route: 065
  1092. SENOKOT [Concomitant]
     Active Substance: SENNOSIDES
     Dosage: UNK, (UNK, SENNA PODS POWDERED ROUTE OF ADMIN (FREE TEXT): UNKNOWN ROUTE )
     Route: 065
  1093. SENOKOT [Concomitant]
     Active Substance: SENNOSIDES
     Dosage: UNK, UNK, SENNA PODS POWDERED ROUTE OF ADMIN (FREE TEXT): UNKNOWN ROUTE
     Route: 065
  1094. SENOKOT [Concomitant]
     Active Substance: SENNOSIDES
     Dosage: UNK (SENNA PODS POWDERED )
     Route: 065
  1095. SENOKOT [Concomitant]
     Active Substance: SENNOSIDES
     Dosage: UNK, UNK, SENNA PODS POWDERED ROUTE OF ADMIN (FREE TEXT): UNKNOWN ROUTE
     Route: 065
  1096. SENOKOT [Concomitant]
     Active Substance: SENNOSIDES
     Dosage: UNK, SENNA PODS POWDERED ROUTE OF ADMIN (FREE TEXT): UNKNOWN ROUTE
     Route: 065
     Dates: start: 20201124
  1097. SENOKOT [Concomitant]
     Active Substance: SENNOSIDES
     Dosage: UNK, SENNA PODS POWDERED ROUTE OF ADMIN (FREE TEXT): UNKNOWN ROUTE
     Route: 065
     Dates: start: 20201124
  1098. SENOKOT [Concomitant]
     Active Substance: SENNOSIDES
     Dosage: UNK
     Route: 065
     Dates: start: 20201124
  1099. SENOKOT [Concomitant]
     Active Substance: SENNOSIDES
     Dosage: UNK
     Route: 065
     Dates: start: 20201124
  1100. SENOKOT [Concomitant]
     Active Substance: SENNOSIDES
     Dosage: UNK, SENNA PODS POWDERED ROUTE OF ADMIN (FREE TEXT): UNKNOWN ROUTE
     Route: 065
     Dates: start: 20201124
  1101. SENOKOT [Concomitant]
     Active Substance: SENNOSIDES
     Dosage: UNK, SENNA PODS POWDERED ROUTE OF ADMIN (FREE TEXT): UNKNOWN ROUTE
     Route: 065
     Dates: start: 20201124
  1102. SENOKOT [Concomitant]
     Active Substance: SENNOSIDES
     Dosage: UNK, SENNA PODS POWDERED ROUTE OF ADMIN (FREE TEXT): UNKNOWN ROUTE
     Route: 065
     Dates: start: 20201124
  1103. SENOKOT [Concomitant]
     Active Substance: SENNOSIDES
     Dosage: UNK, SENNA PODS POWDERED ROUTE OF ADMIN (FREE TEXT): UNKNOWN ROUTE
     Route: 065
     Dates: start: 20201124
  1104. SENOKOT [Concomitant]
     Active Substance: SENNOSIDES
     Dosage: UNK, SENNA PODS POWDERED ROUTE OF ADMIN (FREE TEXT): UNKNOWN ROUTE
     Route: 065
     Dates: start: 20201124
  1105. SENOKOT [Concomitant]
     Active Substance: SENNOSIDES
     Dosage: UNK, SENNA PODS POWDERED ROUTE OF ADMIN (FREE TEXT): UNKNOWN ROUTE
     Route: 065
     Dates: start: 20201124
  1106. SENOKOT [Concomitant]
     Active Substance: SENNOSIDES
     Dosage: UNK, SENNA PODS POWDERED ROUTE OF ADMIN (FREE TEXT): UNKNOWN ROUTE
     Route: 065
     Dates: start: 20201124
  1107. SENOKOT [Concomitant]
     Active Substance: SENNOSIDES
     Dosage: UNK, SENNA PODS POWDERED ROUTE OF ADMIN (FREE TEXT): UNKNOWN ROUTE
     Route: 065
     Dates: start: 20201124
  1108. SENOKOT [Concomitant]
     Active Substance: SENNOSIDES
     Dosage: UNK, SENNA PODS POWDERED ROUTE OF ADMIN (FREE TEXT): UNKNOWN ROUTE
     Route: 065
     Dates: start: 20201124
  1109. SENOKOT [Concomitant]
     Active Substance: SENNOSIDES
     Dosage: UNK, SENNA PODS POWDERED ROUTE OF ADMIN (FREE TEXT): UNKNOWN ROUTE
     Route: 065
     Dates: start: 20201124
  1110. SENOKOT [Concomitant]
     Active Substance: SENNOSIDES
     Dosage: UNK
     Route: 065
     Dates: start: 20201124
  1111. SENOKOT [Concomitant]
     Active Substance: SENNOSIDES
     Dosage: UNK, SENNA PODS POWDERED ROUTE OF ADMIN (FREE TEXT): UNKNOWN ROUTE
     Route: 065
     Dates: start: 20201124
  1112. SENOKOT [Concomitant]
     Active Substance: SENNOSIDES
     Dosage: UNK, SENNA PODS POWDERED ROUTE OF ADMIN (FREE TEXT): UNKNOWN ROUTE
     Route: 065
     Dates: start: 20201124
  1113. SENOKOT [Concomitant]
     Active Substance: SENNOSIDES
     Dosage: UNK
     Route: 065
     Dates: start: 20201124
  1114. SENOKOT [Concomitant]
     Active Substance: SENNOSIDES
     Dosage: UNK, SENNA PODS POWDERED ROUTE OF ADMIN (FREE TEXT): UNKNOWN ROUTE
     Route: 065
     Dates: start: 20201124
  1115. SENOKOT [Concomitant]
     Active Substance: SENNOSIDES
     Dosage: UNK, SENNA PODS POWDERED ROUTE OF ADMIN (FREE TEXT): UNKNOWN ROUTE
     Route: 065
     Dates: start: 20201124
  1116. SENOKOT [Concomitant]
     Active Substance: SENNOSIDES
     Dosage: UNK, SENNA PODS POWDERED ROUTE OF ADMIN (FREE TEXT): UNKNOWN ROUTE
     Route: 065
     Dates: start: 20201124
  1117. SENOKOT [Concomitant]
     Active Substance: SENNOSIDES
     Dosage: UNK
  1118. SENOKOT [Concomitant]
     Active Substance: SENNOSIDES
     Dosage: UNK, SENNA PODS POWDERED ROUTE OF ADMIN (FREE TEXT): UNKNOWN ROUTE
  1119. SENOKOT [Concomitant]
     Active Substance: SENNOSIDES
     Dosage: UNK, SENNA PODS POWDERED ROUTE OF ADMIN (FREE TEXT): UNKNOWN ROUTE
  1120. SENOKOT [Concomitant]
     Active Substance: SENNOSIDES
     Dosage: UNK
  1121. SENOKOT [Concomitant]
     Active Substance: SENNOSIDES
     Dosage: UNK
  1122. SENOKOT [Concomitant]
     Active Substance: SENNOSIDES
     Dosage: UNK, SENNA PODS POWDERED ROUTE OF ADMIN (FREE TEXT): UNKNOWN ROUTE
  1123. SENOKOT [Concomitant]
     Active Substance: SENNOSIDES
     Dosage: UNK, SENNA PODS POWDERED ROUTE OF ADMIN (FREE TEXT): UNKNOWN ROUTE
  1124. SENOKOT [Concomitant]
     Active Substance: SENNOSIDES
     Dosage: UNK, SENNA PODS POWDERED ROUTE OF ADMIN (FREE TEXT): UNKNOWN ROUTE
  1125. SENOKOT [Concomitant]
     Active Substance: SENNOSIDES
     Dosage: UNK, SENNA PODS POWDERED ROUTE OF ADMIN (FREE TEXT): UNKNOWN ROUTE
  1126. SENOKOT [Concomitant]
     Active Substance: SENNOSIDES
     Dosage: UNK, SENNA PODS POWDERED
  1127. SENOKOT [Concomitant]
     Active Substance: SENNOSIDES
     Dosage: UNK, SENNA PODS POWDERED
  1128. SENOKOT [Concomitant]
     Active Substance: SENNOSIDES
     Dosage: UNK, SENNA PODS POWDERED ROUTE OF ADMIN (FREE TEXT): UNKNOWN ROUTE
  1129. SENOKOT [Concomitant]
     Active Substance: SENNOSIDES
     Dosage: UNK, SENNA PODS POWDERED ROUTE OF ADMIN (FREE TEXT): UNKNOWN ROUTE
  1130. SENOKOT [Concomitant]
     Active Substance: SENNOSIDES
     Dosage: UNK, SENNA PODS POWDERED
  1131. SENOKOT [Concomitant]
     Active Substance: SENNOSIDES
     Dosage: UNK, SENNA PODS POWDERED
  1132. SENOKOT [Concomitant]
     Active Substance: SENNOSIDES
     Dosage: UNK, SENNA PODS POWDERED ROUTE OF ADMIN (FREE TEXT): UNKNOWN ROUTE
  1133. SENOKOT [Concomitant]
     Active Substance: SENNOSIDES
     Dosage: UNK, SENNA PODS POWDERED ROUTE OF ADMIN (FREE TEXT): UNKNOWN ROUTE
  1134. SENOKOT [Concomitant]
     Active Substance: SENNOSIDES
     Dosage: UNK, SENNA PODS POWDERED ROUTE OF ADMIN (FREE TEXT): UNKNOWN ROUTE
  1135. SENOKOT [Concomitant]
     Active Substance: SENNOSIDES
     Dosage: UNK, SENNA PODS POWDERED ROUTE OF ADMIN (FREE TEXT): UNKNOWN ROUTE
  1136. SENOKOT [Concomitant]
     Active Substance: SENNOSIDES
     Dosage: UNK, SENNA PODS POWDERED ROUTE OF ADMIN (FREE TEXT): UNKNOWN ROUTE
  1137. SENOKOT [Concomitant]
     Active Substance: SENNOSIDES
     Dosage: UNK, SENNA PODS POWDERED ROUTE OF ADMIN (FREE TEXT): UNKNOWN ROUTE
  1138. SENOKOT [Concomitant]
     Active Substance: SENNOSIDES
     Dosage: UNK
  1139. SENOKOT [Concomitant]
     Active Substance: SENNOSIDES
     Dosage: UNK, SENNA PODS POWDERED ROUTE OF ADMIN (FREE TEXT): UNKNOWN ROUTE
  1140. SENOKOT [Concomitant]
     Active Substance: SENNOSIDES
     Dosage: UNK, SENNA PODS POWDERED ROUTE OF ADMIN (FREE TEXT): UNKNOWN ROUTE
  1141. SENOKOT [Concomitant]
     Active Substance: SENNOSIDES
     Dosage: UNK, SENNA PODS POWDERED ROUTE OF ADMIN (FREE TEXT): UNKNOWN ROUTE
  1142. SENOKOT [Concomitant]
     Active Substance: SENNOSIDES
     Dosage: UNK, SENNA PODS POWDERED ROUTE OF ADMIN (FREE TEXT): UNKNOWN ROUTE
  1143. SENOKOT [Concomitant]
     Active Substance: SENNOSIDES
     Dosage: UNK, SENNA PODS POWDERED
  1144. SENOKOT [Concomitant]
     Active Substance: SENNOSIDES
     Dosage: UNK, SENNA PODS POWDERED ROUTE OF ADMIN (FREE TEXT): UNKNOWN ROUTE
     Dates: start: 20201124
  1145. SENOKOT [Concomitant]
     Active Substance: SENNOSIDES
     Dosage: UNK
     Dates: start: 20201124
  1146. SENOKOT [Concomitant]
     Active Substance: SENNOSIDES
     Dosage: UNK, SENNA PODS POWDERED ROUTE OF ADMIN (FREE TEXT): UNKNOWN ROUTE
     Dates: start: 20201124
  1147. SENOKOT [Concomitant]
     Active Substance: SENNOSIDES
     Dosage: UNK, SENNA PODS POWDERED ROUTE OF ADMIN (FREE TEXT): UNKNOWN ROUTE
     Dates: start: 20201124
  1148. SENOKOT [Concomitant]
     Active Substance: SENNOSIDES
     Dosage: UNK
     Dates: start: 20201124
  1149. SENOKOT [Concomitant]
     Active Substance: SENNOSIDES
     Dosage: UNK, SENNA PODS POWDERED ROUTE OF ADMIN (FREE TEXT): UNKNOWN ROUTE
     Dates: start: 20201124
  1150. SENOKOT [Concomitant]
     Active Substance: SENNOSIDES
     Dosage: UNK, SENNA PODS POWDERED ROUTE OF ADMIN (FREE TEXT): UNKNOWN ROUTE
     Dates: start: 20201124
  1151. SENOKOT [Concomitant]
     Active Substance: SENNOSIDES
     Dosage: UNK, SENNA PODS POWDERED ROUTE OF ADMIN (FREE TEXT): UNKNOWN ROUTE
     Dates: start: 20201124
  1152. SENOKOT [Concomitant]
     Active Substance: SENNOSIDES
     Dosage: UNK, SENNA PODS POWDERED ROUTE OF ADMIN (FREE TEXT): UNKNOWN ROUTE
     Dates: start: 20201124
  1153. SENOKOT [Concomitant]
     Active Substance: SENNOSIDES
     Dosage: UNK, SENNA PODS POWDERED ROUTE OF ADMIN (FREE TEXT): UNKNOWN ROUTE
     Dates: start: 20201124
  1154. SENOKOT [Concomitant]
     Active Substance: SENNOSIDES
     Dosage: UNK, SENNA PODS POWDERED ROUTE OF ADMIN (FREE TEXT): UNKNOWN ROUTE
     Dates: start: 20201124
  1155. SENOKOT [Concomitant]
     Active Substance: SENNOSIDES
     Dosage: UNK, SENNA PODS POWDERED ROUTE OF ADMIN (FREE TEXT): UNKNOWN ROUTE
     Dates: start: 20201124
  1156. SENOKOT [Concomitant]
     Active Substance: SENNOSIDES
     Dosage: UNK, SENNA PODS POWDERED ROUTE OF ADMIN (FREE TEXT): UNKNOWN ROUTE
     Dates: start: 20201124
  1157. SENOKOT [Concomitant]
     Active Substance: SENNOSIDES
     Dosage: UNK (SENNA PODS POWDERED)
  1158. SENOKOT [Concomitant]
     Active Substance: SENNOSIDES
     Dosage: UNK (SENNA PODS POWDERED)
  1159. SENOKOT [Concomitant]
     Active Substance: SENNOSIDES
     Dosage: UNK (SENNA PODS POWDERED)
  1160. COVID-19 vaccine [Concomitant]
     Indication: Product used for unknown indication
     Dosage: UNK
     Route: 065
  1161. COVID-19 vaccine [Concomitant]
     Indication: Product used for unknown indication
     Dosage: UNK
     Route: 065
  1162. COVID-19 vaccine [Concomitant]
     Dosage: UNK
     Route: 065

REACTIONS (7)
  - Neutropenia [Recovered/Resolved]
  - Neutropenia [Recovered/Resolved]
  - Neutropenia [Recovered/Resolved]
  - Neutropenia [Recovered/Resolved]
  - Neutropenia [Recovered/Resolved]
  - Product use in unapproved indication [Unknown]
  - Off label use [Unknown]

NARRATIVE: CASE EVENT DATE: 20201124
